FAERS Safety Report 18248303 (Version 11)
Quarter: 2023Q4

REPORT INFORMATION
  Report Type: Spontaneous
  Country: CA (occurrence: None)
  Receive Date: 20200909
  Receipt Date: 20231222
  Transmission Date: 20240109
  Serious: Yes (Life-Threatening, Hospitalization, Other)
  Sender: FDA-Public Use
  Company Number: 2020SF11813

PATIENT
  Age: 77 Year
  Sex: Female

DRUGS (1246)
  1. OMEPRAZOLE [Interacting]
     Active Substance: OMEPRAZOLE
     Indication: Duodenal ulcer
     Route: 048
  2. OMEPRAZOLE [Interacting]
     Active Substance: OMEPRAZOLE
     Indication: Small intestine carcinoma
     Route: 048
  3. OMEPRAZOLE [Interacting]
     Active Substance: OMEPRAZOLE
     Indication: Hypertension
     Route: 048
  4. OMEPRAZOLE [Interacting]
     Active Substance: OMEPRAZOLE
     Indication: Coronary artery disease
     Route: 048
  5. OMEPRAZOLE [Interacting]
     Active Substance: OMEPRAZOLE
     Indication: Chest pain
     Route: 048
  6. OMEPRAZOLE [Interacting]
     Active Substance: OMEPRAZOLE
     Indication: Angina pectoris
     Route: 048
  7. ROSUVASTATIN CALCIUM [Interacting]
     Active Substance: ROSUVASTATIN CALCIUM
     Indication: Product used for unknown indication
     Route: 048
  8. ROSUVASTATIN CALCIUM [Interacting]
     Active Substance: ROSUVASTATIN CALCIUM
     Indication: Cerebrovascular accident
     Route: 048
  9. ROSUVASTATIN CALCIUM [Interacting]
     Active Substance: ROSUVASTATIN CALCIUM
     Indication: Chronic obstructive pulmonary disease
     Route: 048
  10. ROSUVASTATIN CALCIUM [Interacting]
     Active Substance: ROSUVASTATIN CALCIUM
     Indication: Angina pectoris
     Route: 048
  11. ROSUVASTATIN CALCIUM [Interacting]
     Active Substance: ROSUVASTATIN CALCIUM
     Indication: Chest pain
     Route: 048
  12. ROSUVASTATIN CALCIUM [Interacting]
     Active Substance: ROSUVASTATIN CALCIUM
     Indication: Product used for unknown indication
     Route: 048
  13. ROSUVASTATIN CALCIUM [Interacting]
     Active Substance: ROSUVASTATIN CALCIUM
     Indication: Cerebrovascular accident
     Route: 048
  14. ROSUVASTATIN CALCIUM [Interacting]
     Active Substance: ROSUVASTATIN CALCIUM
     Indication: Chronic obstructive pulmonary disease
     Route: 048
  15. ROSUVASTATIN CALCIUM [Interacting]
     Active Substance: ROSUVASTATIN CALCIUM
     Indication: Angina pectoris
     Route: 048
  16. ROSUVASTATIN CALCIUM [Interacting]
     Active Substance: ROSUVASTATIN CALCIUM
     Indication: Chest pain
     Route: 048
  17. ROSUVASTATIN CALCIUM [Interacting]
     Active Substance: ROSUVASTATIN CALCIUM
     Indication: Product used for unknown indication
     Route: 048
  18. ROSUVASTATIN CALCIUM [Interacting]
     Active Substance: ROSUVASTATIN CALCIUM
     Indication: Cerebrovascular accident
     Route: 048
  19. ROSUVASTATIN CALCIUM [Interacting]
     Active Substance: ROSUVASTATIN CALCIUM
     Indication: Chronic obstructive pulmonary disease
     Route: 048
  20. ROSUVASTATIN CALCIUM [Interacting]
     Active Substance: ROSUVASTATIN CALCIUM
     Indication: Angina pectoris
     Route: 048
  21. ROSUVASTATIN CALCIUM [Interacting]
     Active Substance: ROSUVASTATIN CALCIUM
     Indication: Chest pain
     Route: 048
  22. ROSUVASTATIN CALCIUM [Interacting]
     Active Substance: ROSUVASTATIN CALCIUM
     Indication: Product used for unknown indication
     Dosage: 40 MG, QD, 1 EVERY 1 DAY
  23. ROSUVASTATIN CALCIUM [Interacting]
     Active Substance: ROSUVASTATIN CALCIUM
     Indication: Cerebrovascular accident
     Dosage: 40 MG, QD, 1 EVERY 1 DAY
  24. ROSUVASTATIN CALCIUM [Interacting]
     Active Substance: ROSUVASTATIN CALCIUM
     Indication: Chronic obstructive pulmonary disease
     Dosage: 40 MG, QD, 1 EVERY 1 DAY
  25. ROSUVASTATIN CALCIUM [Interacting]
     Active Substance: ROSUVASTATIN CALCIUM
     Indication: Angina pectoris
     Dosage: 40 MG, QD, 1 EVERY 1 DAY
  26. ROSUVASTATIN CALCIUM [Interacting]
     Active Substance: ROSUVASTATIN CALCIUM
     Indication: Chest pain
     Dosage: 40 MG, QD, 1 EVERY 1 DAY
  27. ROSUVASTATIN [Interacting]
     Active Substance: ROSUVASTATIN
     Indication: Product used for unknown indication
     Route: 048
  28. ROSUVASTATIN [Interacting]
     Active Substance: ROSUVASTATIN
     Indication: Cerebrovascular accident
     Route: 048
  29. ROSUVASTATIN [Interacting]
     Active Substance: ROSUVASTATIN
     Indication: Chronic obstructive pulmonary disease
     Route: 048
  30. ROSUVASTATIN [Interacting]
     Active Substance: ROSUVASTATIN
     Indication: Angina pectoris
     Route: 048
  31. ROSUVASTATIN [Interacting]
     Active Substance: ROSUVASTATIN
     Indication: Chest pain
     Route: 048
  32. ROSUVASTATIN [Interacting]
     Active Substance: ROSUVASTATIN
     Indication: Product used for unknown indication
     Route: 048
  33. ROSUVASTATIN [Interacting]
     Active Substance: ROSUVASTATIN
     Indication: Cerebrovascular accident
     Route: 048
  34. ROSUVASTATIN [Interacting]
     Active Substance: ROSUVASTATIN
     Indication: Chronic obstructive pulmonary disease
     Route: 048
  35. ROSUVASTATIN [Interacting]
     Active Substance: ROSUVASTATIN
     Indication: Angina pectoris
     Route: 048
  36. ROSUVASTATIN [Interacting]
     Active Substance: ROSUVASTATIN
     Indication: Chest pain
     Route: 048
  37. ROSUVASTATIN [Interacting]
     Active Substance: ROSUVASTATIN
     Indication: Product used for unknown indication
     Route: 048
  38. ROSUVASTATIN [Interacting]
     Active Substance: ROSUVASTATIN
     Indication: Cerebrovascular accident
     Route: 048
  39. ROSUVASTATIN [Interacting]
     Active Substance: ROSUVASTATIN
     Indication: Chronic obstructive pulmonary disease
     Route: 048
  40. ROSUVASTATIN [Interacting]
     Active Substance: ROSUVASTATIN
     Indication: Angina pectoris
     Route: 048
  41. ROSUVASTATIN [Interacting]
     Active Substance: ROSUVASTATIN
     Indication: Chest pain
     Route: 048
  42. ROSUVASTATIN [Interacting]
     Active Substance: ROSUVASTATIN
     Indication: Product used for unknown indication
     Dosage: 40 MG, QD, 1 EVERY 1 DAY
  43. ROSUVASTATIN [Interacting]
     Active Substance: ROSUVASTATIN
     Indication: Cerebrovascular accident
     Dosage: 40 MG, QD, 1 EVERY 1 DAY
  44. ROSUVASTATIN [Interacting]
     Active Substance: ROSUVASTATIN
     Indication: Chronic obstructive pulmonary disease
     Dosage: 40 MG, QD, 1 EVERY 1 DAY
  45. ROSUVASTATIN [Interacting]
     Active Substance: ROSUVASTATIN
     Indication: Angina pectoris
     Dosage: 40 MG, QD, 1 EVERY 1 DAY
  46. ROSUVASTATIN [Interacting]
     Active Substance: ROSUVASTATIN
     Indication: Chest pain
     Dosage: 40 MG, QD, 1 EVERY 1 DAY
  47. ACEBUTOLOL HYDROCHLORIDE [Interacting]
     Active Substance: ACEBUTOLOL HYDROCHLORIDE
     Indication: Hypertension
  48. ACEBUTOLOL HYDROCHLORIDE [Interacting]
     Active Substance: ACEBUTOLOL HYDROCHLORIDE
     Indication: Coronary artery disease
  49. ACEBUTOLOL HYDROCHLORIDE [Interacting]
     Active Substance: ACEBUTOLOL HYDROCHLORIDE
     Indication: Chest pain
  50. ACEBUTOLOL HYDROCHLORIDE [Interacting]
     Active Substance: ACEBUTOLOL HYDROCHLORIDE
     Indication: Angina pectoris
  51. ACEBUTOLOL HYDROCHLORIDE [Interacting]
     Active Substance: ACEBUTOLOL HYDROCHLORIDE
     Indication: Constipation
  52. ACEBUTOLOL HYDROCHLORIDE [Interacting]
     Active Substance: ACEBUTOLOL HYDROCHLORIDE
     Indication: Hypertension
  53. ACEBUTOLOL HYDROCHLORIDE [Interacting]
     Active Substance: ACEBUTOLOL HYDROCHLORIDE
     Indication: Coronary artery disease
  54. ACEBUTOLOL HYDROCHLORIDE [Interacting]
     Active Substance: ACEBUTOLOL HYDROCHLORIDE
     Indication: Chest pain
  55. ACEBUTOLOL HYDROCHLORIDE [Interacting]
     Active Substance: ACEBUTOLOL HYDROCHLORIDE
     Indication: Angina pectoris
  56. ACEBUTOLOL HYDROCHLORIDE [Interacting]
     Active Substance: ACEBUTOLOL HYDROCHLORIDE
     Indication: Constipation
  57. ACEBUTOLOL HYDROCHLORIDE [Interacting]
     Active Substance: ACEBUTOLOL HYDROCHLORIDE
     Indication: Hypertension
  58. ACEBUTOLOL HYDROCHLORIDE [Interacting]
     Active Substance: ACEBUTOLOL HYDROCHLORIDE
     Indication: Coronary artery disease
  59. ACEBUTOLOL HYDROCHLORIDE [Interacting]
     Active Substance: ACEBUTOLOL HYDROCHLORIDE
     Indication: Chest pain
  60. ACEBUTOLOL HYDROCHLORIDE [Interacting]
     Active Substance: ACEBUTOLOL HYDROCHLORIDE
     Indication: Angina pectoris
  61. ACEBUTOLOL HYDROCHLORIDE [Interacting]
     Active Substance: ACEBUTOLOL HYDROCHLORIDE
     Indication: Constipation
  62. ACEBUTOLOL HYDROCHLORIDE [Interacting]
     Active Substance: ACEBUTOLOL HYDROCHLORIDE
     Indication: Hypertension
  63. ACEBUTOLOL HYDROCHLORIDE [Interacting]
     Active Substance: ACEBUTOLOL HYDROCHLORIDE
     Indication: Coronary artery disease
  64. ACEBUTOLOL HYDROCHLORIDE [Interacting]
     Active Substance: ACEBUTOLOL HYDROCHLORIDE
     Indication: Chest pain
  65. ACEBUTOLOL HYDROCHLORIDE [Interacting]
     Active Substance: ACEBUTOLOL HYDROCHLORIDE
     Indication: Angina pectoris
  66. ACEBUTOLOL HYDROCHLORIDE [Interacting]
     Active Substance: ACEBUTOLOL HYDROCHLORIDE
     Indication: Constipation
  67. ACEBUTOLOL HYDROCHLORIDE [Interacting]
     Active Substance: ACEBUTOLOL HYDROCHLORIDE
     Indication: Hypertension
  68. ACEBUTOLOL HYDROCHLORIDE [Interacting]
     Active Substance: ACEBUTOLOL HYDROCHLORIDE
     Indication: Coronary artery disease
  69. ACEBUTOLOL HYDROCHLORIDE [Interacting]
     Active Substance: ACEBUTOLOL HYDROCHLORIDE
     Indication: Chest pain
  70. ACEBUTOLOL HYDROCHLORIDE [Interacting]
     Active Substance: ACEBUTOLOL HYDROCHLORIDE
     Indication: Angina pectoris
  71. ACEBUTOLOL HYDROCHLORIDE [Interacting]
     Active Substance: ACEBUTOLOL HYDROCHLORIDE
     Indication: Constipation
  72. ACEBUTOLOL HYDROCHLORIDE [Interacting]
     Active Substance: ACEBUTOLOL HYDROCHLORIDE
     Indication: Hypertension
  73. ACEBUTOLOL HYDROCHLORIDE [Interacting]
     Active Substance: ACEBUTOLOL HYDROCHLORIDE
     Indication: Coronary artery disease
  74. ACEBUTOLOL HYDROCHLORIDE [Interacting]
     Active Substance: ACEBUTOLOL HYDROCHLORIDE
     Indication: Chest pain
  75. ACEBUTOLOL HYDROCHLORIDE [Interacting]
     Active Substance: ACEBUTOLOL HYDROCHLORIDE
     Indication: Angina pectoris
  76. ACEBUTOLOL HYDROCHLORIDE [Interacting]
     Active Substance: ACEBUTOLOL HYDROCHLORIDE
     Indication: Constipation
  77. ACEBUTOLOL HYDROCHLORIDE [Interacting]
     Active Substance: ACEBUTOLOL HYDROCHLORIDE
     Indication: Hypertension
  78. ACEBUTOLOL HYDROCHLORIDE [Interacting]
     Active Substance: ACEBUTOLOL HYDROCHLORIDE
     Indication: Coronary artery disease
  79. ACEBUTOLOL HYDROCHLORIDE [Interacting]
     Active Substance: ACEBUTOLOL HYDROCHLORIDE
     Indication: Chest pain
  80. ACEBUTOLOL HYDROCHLORIDE [Interacting]
     Active Substance: ACEBUTOLOL HYDROCHLORIDE
     Indication: Angina pectoris
  81. ACEBUTOLOL HYDROCHLORIDE [Interacting]
     Active Substance: ACEBUTOLOL HYDROCHLORIDE
     Indication: Constipation
  82. ACETAMINOPHEN\CAFFEINE [Interacting]
     Active Substance: ACETAMINOPHEN\CAFFEINE
     Indication: Pain
  83. ACETAMINOPHEN\CAFFEINE [Interacting]
     Active Substance: ACETAMINOPHEN\CAFFEINE
     Indication: Coronary artery disease
  84. ACETAMINOPHEN\CAFFEINE [Interacting]
     Active Substance: ACETAMINOPHEN\CAFFEINE
     Indication: Chronic obstructive pulmonary disease
  85. ACETAMINOPHEN\CAFFEINE [Interacting]
     Active Substance: ACETAMINOPHEN\CAFFEINE
     Indication: Chest pain
  86. ACETAMINOPHEN\CAFFEINE [Interacting]
     Active Substance: ACETAMINOPHEN\CAFFEINE
     Indication: Cerebrovascular accident
  87. ACETAMINOPHEN\CAFFEINE [Interacting]
     Active Substance: ACETAMINOPHEN\CAFFEINE
     Indication: Angina pectoris
  88. ACETAMINOPHEN\CAFFEINE [Interacting]
     Active Substance: ACETAMINOPHEN\CAFFEINE
     Indication: Hypertension
  89. ACETAMINOPHEN\CAFFEINE [Interacting]
     Active Substance: ACETAMINOPHEN\CAFFEINE
     Indication: Radioactive iodine therapy
  90. ACETAMINOPHEN\CAFFEINE [Interacting]
     Active Substance: ACETAMINOPHEN\CAFFEINE
     Indication: Fibromyalgia
  91. ACETAMINOPHEN\CAFFEINE [Interacting]
     Active Substance: ACETAMINOPHEN\CAFFEINE
     Indication: Pain
     Dosage: 60 MG, QD
  92. ACETAMINOPHEN\CAFFEINE [Interacting]
     Active Substance: ACETAMINOPHEN\CAFFEINE
     Indication: Coronary artery disease
     Dosage: 60 MG, QD
  93. ACETAMINOPHEN\CAFFEINE [Interacting]
     Active Substance: ACETAMINOPHEN\CAFFEINE
     Indication: Chronic obstructive pulmonary disease
     Dosage: 60 MG, QD
  94. ACETAMINOPHEN\CAFFEINE [Interacting]
     Active Substance: ACETAMINOPHEN\CAFFEINE
     Indication: Chest pain
     Dosage: 60 MG, QD
  95. ACETAMINOPHEN\CAFFEINE [Interacting]
     Active Substance: ACETAMINOPHEN\CAFFEINE
     Indication: Cerebrovascular accident
     Dosage: 60 MG, QD
  96. ACETAMINOPHEN\CAFFEINE [Interacting]
     Active Substance: ACETAMINOPHEN\CAFFEINE
     Indication: Angina pectoris
     Dosage: 60 MG, QD
  97. ACETAMINOPHEN\CAFFEINE [Interacting]
     Active Substance: ACETAMINOPHEN\CAFFEINE
     Indication: Hypertension
     Dosage: 60 MG, QD
  98. ACETAMINOPHEN\CAFFEINE [Interacting]
     Active Substance: ACETAMINOPHEN\CAFFEINE
     Indication: Radioactive iodine therapy
     Dosage: 60 MG, QD
  99. ACETAMINOPHEN\CAFFEINE [Interacting]
     Active Substance: ACETAMINOPHEN\CAFFEINE
     Indication: Fibromyalgia
     Dosage: 60 MG, QD
  100. ACETAMINOPHEN\CAFFEINE [Interacting]
     Active Substance: ACETAMINOPHEN\CAFFEINE
     Indication: Pain
     Dosage: 50 MG, QD
  101. ACETAMINOPHEN\CAFFEINE [Interacting]
     Active Substance: ACETAMINOPHEN\CAFFEINE
     Indication: Coronary artery disease
     Dosage: 50 MG, QD
  102. ACETAMINOPHEN\CAFFEINE [Interacting]
     Active Substance: ACETAMINOPHEN\CAFFEINE
     Indication: Chronic obstructive pulmonary disease
     Dosage: 50 MG, QD
  103. ACETAMINOPHEN\CAFFEINE [Interacting]
     Active Substance: ACETAMINOPHEN\CAFFEINE
     Indication: Chest pain
     Dosage: 50 MG, QD
  104. ACETAMINOPHEN\CAFFEINE [Interacting]
     Active Substance: ACETAMINOPHEN\CAFFEINE
     Indication: Cerebrovascular accident
     Dosage: 50 MG, QD
  105. ACETAMINOPHEN\CAFFEINE [Interacting]
     Active Substance: ACETAMINOPHEN\CAFFEINE
     Indication: Angina pectoris
     Dosage: 50 MG, QD
  106. ACETAMINOPHEN\CAFFEINE [Interacting]
     Active Substance: ACETAMINOPHEN\CAFFEINE
     Indication: Hypertension
     Dosage: 50 MG, QD
  107. ACETAMINOPHEN\CAFFEINE [Interacting]
     Active Substance: ACETAMINOPHEN\CAFFEINE
     Indication: Radioactive iodine therapy
     Dosage: 50 MG, QD
  108. ACETAMINOPHEN\CAFFEINE [Interacting]
     Active Substance: ACETAMINOPHEN\CAFFEINE
     Indication: Fibromyalgia
     Dosage: 50 MG, QD
  109. ACETAMINOPHEN\CAFFEINE [Interacting]
     Active Substance: ACETAMINOPHEN\CAFFEINE
     Indication: Pain
     Dosage: 600 MG, QD, 1 EVERY 1 DAY
  110. ACETAMINOPHEN\CAFFEINE [Interacting]
     Active Substance: ACETAMINOPHEN\CAFFEINE
     Indication: Coronary artery disease
     Dosage: 600 MG, QD, 1 EVERY 1 DAY
  111. ACETAMINOPHEN\CAFFEINE [Interacting]
     Active Substance: ACETAMINOPHEN\CAFFEINE
     Indication: Chronic obstructive pulmonary disease
     Dosage: 600 MG, QD, 1 EVERY 1 DAY
  112. ACETAMINOPHEN\CAFFEINE [Interacting]
     Active Substance: ACETAMINOPHEN\CAFFEINE
     Indication: Chest pain
     Dosage: 600 MG, QD, 1 EVERY 1 DAY
  113. ACETAMINOPHEN\CAFFEINE [Interacting]
     Active Substance: ACETAMINOPHEN\CAFFEINE
     Indication: Cerebrovascular accident
     Dosage: 600 MG, QD, 1 EVERY 1 DAY
  114. ACETAMINOPHEN\CAFFEINE [Interacting]
     Active Substance: ACETAMINOPHEN\CAFFEINE
     Indication: Angina pectoris
     Dosage: 600 MG, QD, 1 EVERY 1 DAY
  115. ACETAMINOPHEN\CAFFEINE [Interacting]
     Active Substance: ACETAMINOPHEN\CAFFEINE
     Indication: Hypertension
     Dosage: 600 MG, QD, 1 EVERY 1 DAY
  116. ACETAMINOPHEN\CAFFEINE [Interacting]
     Active Substance: ACETAMINOPHEN\CAFFEINE
     Indication: Radioactive iodine therapy
     Dosage: 600 MG, QD, 1 EVERY 1 DAY
  117. ACETAMINOPHEN\CAFFEINE [Interacting]
     Active Substance: ACETAMINOPHEN\CAFFEINE
     Indication: Fibromyalgia
     Dosage: 600 MG, QD, 1 EVERY 1 DAY
  118. ACETAMINOPHEN\CAFFEINE [Interacting]
     Active Substance: ACETAMINOPHEN\CAFFEINE
     Indication: Pain
  119. ACETAMINOPHEN\CAFFEINE [Interacting]
     Active Substance: ACETAMINOPHEN\CAFFEINE
     Indication: Coronary artery disease
  120. ACETAMINOPHEN\CAFFEINE [Interacting]
     Active Substance: ACETAMINOPHEN\CAFFEINE
     Indication: Chronic obstructive pulmonary disease
  121. ACETAMINOPHEN\CAFFEINE [Interacting]
     Active Substance: ACETAMINOPHEN\CAFFEINE
     Indication: Chest pain
  122. ACETAMINOPHEN\CAFFEINE [Interacting]
     Active Substance: ACETAMINOPHEN\CAFFEINE
     Indication: Cerebrovascular accident
  123. ACETAMINOPHEN\CAFFEINE [Interacting]
     Active Substance: ACETAMINOPHEN\CAFFEINE
     Indication: Angina pectoris
  124. ACETAMINOPHEN\CAFFEINE [Interacting]
     Active Substance: ACETAMINOPHEN\CAFFEINE
     Indication: Hypertension
  125. ACETAMINOPHEN\CAFFEINE [Interacting]
     Active Substance: ACETAMINOPHEN\CAFFEINE
     Indication: Radioactive iodine therapy
  126. ACETAMINOPHEN\CAFFEINE [Interacting]
     Active Substance: ACETAMINOPHEN\CAFFEINE
     Indication: Fibromyalgia
  127. AGGRENOX [Interacting]
     Active Substance: ASPIRIN\DIPYRIDAMOLE
     Indication: Cerebrovascular accident
  128. AGGRENOX [Interacting]
     Active Substance: ASPIRIN\DIPYRIDAMOLE
     Indication: Arthritis
  129. AGGRENOX [Interacting]
     Active Substance: ASPIRIN\DIPYRIDAMOLE
     Indication: Hypertension
  130. AMITRIPTYLINE [Interacting]
     Active Substance: AMITRIPTYLINE
     Indication: Product used for unknown indication
  131. AMITRIPTYLINE [Interacting]
     Active Substance: AMITRIPTYLINE
     Indication: Insomnia
  132. AMITRIPTYLINE [Interacting]
     Active Substance: AMITRIPTYLINE
     Indication: Duodenal ulcer
  133. AMITRIPTYLINE [Interacting]
     Active Substance: AMITRIPTYLINE
     Indication: Arthritis
  134. AMITRIPTYLINE [Interacting]
     Active Substance: AMITRIPTYLINE
     Indication: Angina pectoris
  135. AMITRIPTYLINE [Interacting]
     Active Substance: AMITRIPTYLINE
     Indication: Thyroid disorder
  136. AMITRIPTYLINE [Interacting]
     Active Substance: AMITRIPTYLINE
     Indication: Radioactive iodine therapy
  137. AMITRIPTYLINE [Interacting]
     Active Substance: AMITRIPTYLINE
     Indication: Prophylaxis
  138. AMITRIPTYLINE [Interacting]
     Active Substance: AMITRIPTYLINE
     Indication: Pain
  139. AMITRIPTYLINE [Interacting]
     Active Substance: AMITRIPTYLINE
     Indication: Oedema
  140. AMITRIPTYLINE [Interacting]
     Active Substance: AMITRIPTYLINE
     Indication: Hypertension
  141. AMITRIPTYLINE [Interacting]
     Active Substance: AMITRIPTYLINE
     Indication: Fibromyalgia
  142. AMITRIPTYLINE [Interacting]
     Active Substance: AMITRIPTYLINE
     Indication: Dementia
  143. AMITRIPTYLINE [Interacting]
     Active Substance: AMITRIPTYLINE
     Indication: Coronary artery disease
  144. AMITRIPTYLINE [Interacting]
     Active Substance: AMITRIPTYLINE
     Indication: Constipation
  145. AMITRIPTYLINE [Interacting]
     Active Substance: AMITRIPTYLINE
     Indication: Chest pain
  146. AMITRIPTYLINE [Interacting]
     Active Substance: AMITRIPTYLINE
     Indication: Product used for unknown indication
     Dosage: 50.0MG UNKNOWN
  147. AMITRIPTYLINE [Interacting]
     Active Substance: AMITRIPTYLINE
     Indication: Insomnia
     Dosage: 50.0MG UNKNOWN
  148. AMITRIPTYLINE [Interacting]
     Active Substance: AMITRIPTYLINE
     Indication: Duodenal ulcer
     Dosage: 50.0MG UNKNOWN
  149. AMITRIPTYLINE [Interacting]
     Active Substance: AMITRIPTYLINE
     Indication: Arthritis
     Dosage: 50.0MG UNKNOWN
  150. AMITRIPTYLINE [Interacting]
     Active Substance: AMITRIPTYLINE
     Indication: Angina pectoris
     Dosage: 50.0MG UNKNOWN
  151. AMITRIPTYLINE [Interacting]
     Active Substance: AMITRIPTYLINE
     Indication: Thyroid disorder
     Dosage: 50.0MG UNKNOWN
  152. AMITRIPTYLINE [Interacting]
     Active Substance: AMITRIPTYLINE
     Indication: Radioactive iodine therapy
     Dosage: 50.0MG UNKNOWN
  153. AMITRIPTYLINE [Interacting]
     Active Substance: AMITRIPTYLINE
     Indication: Prophylaxis
     Dosage: 50.0MG UNKNOWN
  154. AMITRIPTYLINE [Interacting]
     Active Substance: AMITRIPTYLINE
     Indication: Pain
     Dosage: 50.0MG UNKNOWN
  155. AMITRIPTYLINE [Interacting]
     Active Substance: AMITRIPTYLINE
     Indication: Oedema
     Dosage: 50.0MG UNKNOWN
  156. AMITRIPTYLINE [Interacting]
     Active Substance: AMITRIPTYLINE
     Indication: Hypertension
     Dosage: 50.0MG UNKNOWN
  157. AMITRIPTYLINE [Interacting]
     Active Substance: AMITRIPTYLINE
     Indication: Fibromyalgia
     Dosage: 50.0MG UNKNOWN
  158. AMITRIPTYLINE [Interacting]
     Active Substance: AMITRIPTYLINE
     Indication: Dementia
     Dosage: 50.0MG UNKNOWN
  159. AMITRIPTYLINE [Interacting]
     Active Substance: AMITRIPTYLINE
     Indication: Coronary artery disease
     Dosage: 50.0MG UNKNOWN
  160. AMITRIPTYLINE [Interacting]
     Active Substance: AMITRIPTYLINE
     Indication: Constipation
     Dosage: 50.0MG UNKNOWN
  161. AMITRIPTYLINE [Interacting]
     Active Substance: AMITRIPTYLINE
     Indication: Chest pain
     Dosage: 50.0MG UNKNOWN
  162. AMITRIPTYLINE [Interacting]
     Active Substance: AMITRIPTYLINE
     Indication: Product used for unknown indication
     Dosage: 50.0MG UNKNOWN
  163. AMITRIPTYLINE [Interacting]
     Active Substance: AMITRIPTYLINE
     Indication: Insomnia
     Dosage: 50.0MG UNKNOWN
  164. AMITRIPTYLINE [Interacting]
     Active Substance: AMITRIPTYLINE
     Indication: Duodenal ulcer
     Dosage: 50.0MG UNKNOWN
  165. AMITRIPTYLINE [Interacting]
     Active Substance: AMITRIPTYLINE
     Indication: Arthritis
     Dosage: 50.0MG UNKNOWN
  166. AMITRIPTYLINE [Interacting]
     Active Substance: AMITRIPTYLINE
     Indication: Angina pectoris
     Dosage: 50.0MG UNKNOWN
  167. AMITRIPTYLINE [Interacting]
     Active Substance: AMITRIPTYLINE
     Indication: Thyroid disorder
     Dosage: 50.0MG UNKNOWN
  168. AMITRIPTYLINE [Interacting]
     Active Substance: AMITRIPTYLINE
     Indication: Radioactive iodine therapy
     Dosage: 50.0MG UNKNOWN
  169. AMITRIPTYLINE [Interacting]
     Active Substance: AMITRIPTYLINE
     Indication: Prophylaxis
     Dosage: 50.0MG UNKNOWN
  170. AMITRIPTYLINE [Interacting]
     Active Substance: AMITRIPTYLINE
     Indication: Pain
     Dosage: 50.0MG UNKNOWN
  171. AMITRIPTYLINE [Interacting]
     Active Substance: AMITRIPTYLINE
     Indication: Oedema
     Dosage: 50.0MG UNKNOWN
  172. AMITRIPTYLINE [Interacting]
     Active Substance: AMITRIPTYLINE
     Indication: Hypertension
     Dosage: 50.0MG UNKNOWN
  173. AMITRIPTYLINE [Interacting]
     Active Substance: AMITRIPTYLINE
     Indication: Fibromyalgia
     Dosage: 50.0MG UNKNOWN
  174. AMITRIPTYLINE [Interacting]
     Active Substance: AMITRIPTYLINE
     Indication: Dementia
     Dosage: 50.0MG UNKNOWN
  175. AMITRIPTYLINE [Interacting]
     Active Substance: AMITRIPTYLINE
     Indication: Coronary artery disease
     Dosage: 50.0MG UNKNOWN
  176. AMITRIPTYLINE [Interacting]
     Active Substance: AMITRIPTYLINE
     Indication: Constipation
     Dosage: 50.0MG UNKNOWN
  177. AMITRIPTYLINE [Interacting]
     Active Substance: AMITRIPTYLINE
     Indication: Chest pain
     Dosage: 50.0MG UNKNOWN
  178. AMITRIPTYLINE [Interacting]
     Active Substance: AMITRIPTYLINE
     Indication: Product used for unknown indication
     Dosage: 75.0MG UNKNOWN
  179. AMITRIPTYLINE [Interacting]
     Active Substance: AMITRIPTYLINE
     Indication: Insomnia
     Dosage: 75.0MG UNKNOWN
  180. AMITRIPTYLINE [Interacting]
     Active Substance: AMITRIPTYLINE
     Indication: Duodenal ulcer
     Dosage: 75.0MG UNKNOWN
  181. AMITRIPTYLINE [Interacting]
     Active Substance: AMITRIPTYLINE
     Indication: Arthritis
     Dosage: 75.0MG UNKNOWN
  182. AMITRIPTYLINE [Interacting]
     Active Substance: AMITRIPTYLINE
     Indication: Angina pectoris
     Dosage: 75.0MG UNKNOWN
  183. AMITRIPTYLINE [Interacting]
     Active Substance: AMITRIPTYLINE
     Indication: Thyroid disorder
     Dosage: 75.0MG UNKNOWN
  184. AMITRIPTYLINE [Interacting]
     Active Substance: AMITRIPTYLINE
     Indication: Radioactive iodine therapy
     Dosage: 75.0MG UNKNOWN
  185. AMITRIPTYLINE [Interacting]
     Active Substance: AMITRIPTYLINE
     Indication: Prophylaxis
     Dosage: 75.0MG UNKNOWN
  186. AMITRIPTYLINE [Interacting]
     Active Substance: AMITRIPTYLINE
     Indication: Pain
     Dosage: 75.0MG UNKNOWN
  187. AMITRIPTYLINE [Interacting]
     Active Substance: AMITRIPTYLINE
     Indication: Oedema
     Dosage: 75.0MG UNKNOWN
  188. AMITRIPTYLINE [Interacting]
     Active Substance: AMITRIPTYLINE
     Indication: Hypertension
     Dosage: 75.0MG UNKNOWN
  189. AMITRIPTYLINE [Interacting]
     Active Substance: AMITRIPTYLINE
     Indication: Fibromyalgia
     Dosage: 75.0MG UNKNOWN
  190. AMITRIPTYLINE [Interacting]
     Active Substance: AMITRIPTYLINE
     Indication: Dementia
     Dosage: 75.0MG UNKNOWN
  191. AMITRIPTYLINE [Interacting]
     Active Substance: AMITRIPTYLINE
     Indication: Coronary artery disease
     Dosage: 75.0MG UNKNOWN
  192. AMITRIPTYLINE [Interacting]
     Active Substance: AMITRIPTYLINE
     Indication: Constipation
     Dosage: 75.0MG UNKNOWN
  193. AMITRIPTYLINE [Interacting]
     Active Substance: AMITRIPTYLINE
     Indication: Chest pain
     Dosage: 75.0MG UNKNOWN
  194. AMITRIPTYLINE [Interacting]
     Active Substance: AMITRIPTYLINE
     Indication: Product used for unknown indication
     Dosage: 75.0MG UNKNOWN
  195. AMITRIPTYLINE [Interacting]
     Active Substance: AMITRIPTYLINE
     Indication: Insomnia
     Dosage: 75.0MG UNKNOWN
  196. AMITRIPTYLINE [Interacting]
     Active Substance: AMITRIPTYLINE
     Indication: Duodenal ulcer
     Dosage: 75.0MG UNKNOWN
  197. AMITRIPTYLINE [Interacting]
     Active Substance: AMITRIPTYLINE
     Indication: Arthritis
     Dosage: 75.0MG UNKNOWN
  198. AMITRIPTYLINE [Interacting]
     Active Substance: AMITRIPTYLINE
     Indication: Angina pectoris
     Dosage: 75.0MG UNKNOWN
  199. AMITRIPTYLINE [Interacting]
     Active Substance: AMITRIPTYLINE
     Indication: Thyroid disorder
     Dosage: 75.0MG UNKNOWN
  200. AMITRIPTYLINE [Interacting]
     Active Substance: AMITRIPTYLINE
     Indication: Radioactive iodine therapy
     Dosage: 75.0MG UNKNOWN
  201. AMITRIPTYLINE [Interacting]
     Active Substance: AMITRIPTYLINE
     Indication: Prophylaxis
     Dosage: 75.0MG UNKNOWN
  202. AMITRIPTYLINE [Interacting]
     Active Substance: AMITRIPTYLINE
     Indication: Pain
     Dosage: 75.0MG UNKNOWN
  203. AMITRIPTYLINE [Interacting]
     Active Substance: AMITRIPTYLINE
     Indication: Oedema
     Dosage: 75.0MG UNKNOWN
  204. AMITRIPTYLINE [Interacting]
     Active Substance: AMITRIPTYLINE
     Indication: Hypertension
     Dosage: 75.0MG UNKNOWN
  205. AMITRIPTYLINE [Interacting]
     Active Substance: AMITRIPTYLINE
     Indication: Fibromyalgia
     Dosage: 75.0MG UNKNOWN
  206. AMITRIPTYLINE [Interacting]
     Active Substance: AMITRIPTYLINE
     Indication: Dementia
     Dosage: 75.0MG UNKNOWN
  207. AMITRIPTYLINE [Interacting]
     Active Substance: AMITRIPTYLINE
     Indication: Coronary artery disease
     Dosage: 75.0MG UNKNOWN
  208. AMITRIPTYLINE [Interacting]
     Active Substance: AMITRIPTYLINE
     Indication: Constipation
     Dosage: 75.0MG UNKNOWN
  209. AMITRIPTYLINE [Interacting]
     Active Substance: AMITRIPTYLINE
     Indication: Chest pain
     Dosage: 75.0MG UNKNOWN
  210. AMITRIPTYLINE [Interacting]
     Active Substance: AMITRIPTYLINE
     Indication: Product used for unknown indication
     Dosage: 75.0MG UNKNOWN
  211. AMITRIPTYLINE [Interacting]
     Active Substance: AMITRIPTYLINE
     Indication: Insomnia
     Dosage: 75.0MG UNKNOWN
  212. AMITRIPTYLINE [Interacting]
     Active Substance: AMITRIPTYLINE
     Indication: Duodenal ulcer
     Dosage: 75.0MG UNKNOWN
  213. AMITRIPTYLINE [Interacting]
     Active Substance: AMITRIPTYLINE
     Indication: Arthritis
     Dosage: 75.0MG UNKNOWN
  214. AMITRIPTYLINE [Interacting]
     Active Substance: AMITRIPTYLINE
     Indication: Angina pectoris
     Dosage: 75.0MG UNKNOWN
  215. AMITRIPTYLINE [Interacting]
     Active Substance: AMITRIPTYLINE
     Indication: Thyroid disorder
     Dosage: 75.0MG UNKNOWN
  216. AMITRIPTYLINE [Interacting]
     Active Substance: AMITRIPTYLINE
     Indication: Radioactive iodine therapy
     Dosage: 75.0MG UNKNOWN
  217. AMITRIPTYLINE [Interacting]
     Active Substance: AMITRIPTYLINE
     Indication: Prophylaxis
     Dosage: 75.0MG UNKNOWN
  218. AMITRIPTYLINE [Interacting]
     Active Substance: AMITRIPTYLINE
     Indication: Pain
     Dosage: 75.0MG UNKNOWN
  219. AMITRIPTYLINE [Interacting]
     Active Substance: AMITRIPTYLINE
     Indication: Oedema
     Dosage: 75.0MG UNKNOWN
  220. AMITRIPTYLINE [Interacting]
     Active Substance: AMITRIPTYLINE
     Indication: Hypertension
     Dosage: 75.0MG UNKNOWN
  221. AMITRIPTYLINE [Interacting]
     Active Substance: AMITRIPTYLINE
     Indication: Fibromyalgia
     Dosage: 75.0MG UNKNOWN
  222. AMITRIPTYLINE [Interacting]
     Active Substance: AMITRIPTYLINE
     Indication: Dementia
     Dosage: 75.0MG UNKNOWN
  223. AMITRIPTYLINE [Interacting]
     Active Substance: AMITRIPTYLINE
     Indication: Coronary artery disease
     Dosage: 75.0MG UNKNOWN
  224. AMITRIPTYLINE [Interacting]
     Active Substance: AMITRIPTYLINE
     Indication: Constipation
     Dosage: 75.0MG UNKNOWN
  225. AMITRIPTYLINE [Interacting]
     Active Substance: AMITRIPTYLINE
     Indication: Chest pain
     Dosage: 75.0MG UNKNOWN
  226. AMITRIPTYLINE [Interacting]
     Active Substance: AMITRIPTYLINE
     Indication: Product used for unknown indication
     Dosage: 75.0MG UNKNOWN
  227. AMITRIPTYLINE [Interacting]
     Active Substance: AMITRIPTYLINE
     Indication: Insomnia
     Dosage: 75.0MG UNKNOWN
  228. AMITRIPTYLINE [Interacting]
     Active Substance: AMITRIPTYLINE
     Indication: Duodenal ulcer
     Dosage: 75.0MG UNKNOWN
  229. AMITRIPTYLINE [Interacting]
     Active Substance: AMITRIPTYLINE
     Indication: Arthritis
     Dosage: 75.0MG UNKNOWN
  230. AMITRIPTYLINE [Interacting]
     Active Substance: AMITRIPTYLINE
     Indication: Angina pectoris
     Dosage: 75.0MG UNKNOWN
  231. AMITRIPTYLINE [Interacting]
     Active Substance: AMITRIPTYLINE
     Indication: Thyroid disorder
     Dosage: 75.0MG UNKNOWN
  232. AMITRIPTYLINE [Interacting]
     Active Substance: AMITRIPTYLINE
     Indication: Radioactive iodine therapy
     Dosage: 75.0MG UNKNOWN
  233. AMITRIPTYLINE [Interacting]
     Active Substance: AMITRIPTYLINE
     Indication: Prophylaxis
     Dosage: 75.0MG UNKNOWN
  234. AMITRIPTYLINE [Interacting]
     Active Substance: AMITRIPTYLINE
     Indication: Pain
     Dosage: 75.0MG UNKNOWN
  235. AMITRIPTYLINE [Interacting]
     Active Substance: AMITRIPTYLINE
     Indication: Oedema
     Dosage: 75.0MG UNKNOWN
  236. AMITRIPTYLINE [Interacting]
     Active Substance: AMITRIPTYLINE
     Indication: Hypertension
     Dosage: 75.0MG UNKNOWN
  237. AMITRIPTYLINE [Interacting]
     Active Substance: AMITRIPTYLINE
     Indication: Fibromyalgia
     Dosage: 75.0MG UNKNOWN
  238. AMITRIPTYLINE [Interacting]
     Active Substance: AMITRIPTYLINE
     Indication: Dementia
     Dosage: 75.0MG UNKNOWN
  239. AMITRIPTYLINE [Interacting]
     Active Substance: AMITRIPTYLINE
     Indication: Coronary artery disease
     Dosage: 75.0MG UNKNOWN
  240. AMITRIPTYLINE [Interacting]
     Active Substance: AMITRIPTYLINE
     Indication: Constipation
     Dosage: 75.0MG UNKNOWN
  241. AMITRIPTYLINE [Interacting]
     Active Substance: AMITRIPTYLINE
     Indication: Chest pain
     Dosage: 75.0MG UNKNOWN
  242. AMITRIPTYLINE [Interacting]
     Active Substance: AMITRIPTYLINE
     Indication: Product used for unknown indication
     Dosage: 75.0MG UNKNOWN
  243. AMITRIPTYLINE [Interacting]
     Active Substance: AMITRIPTYLINE
     Indication: Insomnia
     Dosage: 75.0MG UNKNOWN
  244. AMITRIPTYLINE [Interacting]
     Active Substance: AMITRIPTYLINE
     Indication: Duodenal ulcer
     Dosage: 75.0MG UNKNOWN
  245. AMITRIPTYLINE [Interacting]
     Active Substance: AMITRIPTYLINE
     Indication: Arthritis
     Dosage: 75.0MG UNKNOWN
  246. AMITRIPTYLINE [Interacting]
     Active Substance: AMITRIPTYLINE
     Indication: Angina pectoris
     Dosage: 75.0MG UNKNOWN
  247. AMITRIPTYLINE [Interacting]
     Active Substance: AMITRIPTYLINE
     Indication: Thyroid disorder
     Dosage: 75.0MG UNKNOWN
  248. AMITRIPTYLINE [Interacting]
     Active Substance: AMITRIPTYLINE
     Indication: Radioactive iodine therapy
     Dosage: 75.0MG UNKNOWN
  249. AMITRIPTYLINE [Interacting]
     Active Substance: AMITRIPTYLINE
     Indication: Prophylaxis
     Dosage: 75.0MG UNKNOWN
  250. AMITRIPTYLINE [Interacting]
     Active Substance: AMITRIPTYLINE
     Indication: Pain
     Dosage: 75.0MG UNKNOWN
  251. AMITRIPTYLINE [Interacting]
     Active Substance: AMITRIPTYLINE
     Indication: Oedema
     Dosage: 75.0MG UNKNOWN
  252. AMITRIPTYLINE [Interacting]
     Active Substance: AMITRIPTYLINE
     Indication: Hypertension
     Dosage: 75.0MG UNKNOWN
  253. AMITRIPTYLINE [Interacting]
     Active Substance: AMITRIPTYLINE
     Indication: Fibromyalgia
     Dosage: 75.0MG UNKNOWN
  254. AMITRIPTYLINE [Interacting]
     Active Substance: AMITRIPTYLINE
     Indication: Dementia
     Dosage: 75.0MG UNKNOWN
  255. AMITRIPTYLINE [Interacting]
     Active Substance: AMITRIPTYLINE
     Indication: Coronary artery disease
     Dosage: 75.0MG UNKNOWN
  256. AMITRIPTYLINE [Interacting]
     Active Substance: AMITRIPTYLINE
     Indication: Constipation
     Dosage: 75.0MG UNKNOWN
  257. AMITRIPTYLINE [Interacting]
     Active Substance: AMITRIPTYLINE
     Indication: Chest pain
     Dosage: 75.0MG UNKNOWN
  258. AMITRIPTYLINE [Interacting]
     Active Substance: AMITRIPTYLINE
     Indication: Product used for unknown indication
     Dosage: 75.0MG UNKNOWN
  259. AMITRIPTYLINE [Interacting]
     Active Substance: AMITRIPTYLINE
     Indication: Insomnia
     Dosage: 75.0MG UNKNOWN
  260. AMITRIPTYLINE [Interacting]
     Active Substance: AMITRIPTYLINE
     Indication: Duodenal ulcer
     Dosage: 75.0MG UNKNOWN
  261. AMITRIPTYLINE [Interacting]
     Active Substance: AMITRIPTYLINE
     Indication: Arthritis
     Dosage: 75.0MG UNKNOWN
  262. AMITRIPTYLINE [Interacting]
     Active Substance: AMITRIPTYLINE
     Indication: Angina pectoris
     Dosage: 75.0MG UNKNOWN
  263. AMITRIPTYLINE [Interacting]
     Active Substance: AMITRIPTYLINE
     Indication: Thyroid disorder
     Dosage: 75.0MG UNKNOWN
  264. AMITRIPTYLINE [Interacting]
     Active Substance: AMITRIPTYLINE
     Indication: Radioactive iodine therapy
     Dosage: 75.0MG UNKNOWN
  265. AMITRIPTYLINE [Interacting]
     Active Substance: AMITRIPTYLINE
     Indication: Prophylaxis
     Dosage: 75.0MG UNKNOWN
  266. AMITRIPTYLINE [Interacting]
     Active Substance: AMITRIPTYLINE
     Indication: Pain
     Dosage: 75.0MG UNKNOWN
  267. AMITRIPTYLINE [Interacting]
     Active Substance: AMITRIPTYLINE
     Indication: Oedema
     Dosage: 75.0MG UNKNOWN
  268. AMITRIPTYLINE [Interacting]
     Active Substance: AMITRIPTYLINE
     Indication: Hypertension
     Dosage: 75.0MG UNKNOWN
  269. AMITRIPTYLINE [Interacting]
     Active Substance: AMITRIPTYLINE
     Indication: Fibromyalgia
     Dosage: 75.0MG UNKNOWN
  270. AMITRIPTYLINE [Interacting]
     Active Substance: AMITRIPTYLINE
     Indication: Dementia
     Dosage: 75.0MG UNKNOWN
  271. AMITRIPTYLINE [Interacting]
     Active Substance: AMITRIPTYLINE
     Indication: Coronary artery disease
     Dosage: 75.0MG UNKNOWN
  272. AMITRIPTYLINE [Interacting]
     Active Substance: AMITRIPTYLINE
     Indication: Constipation
     Dosage: 75.0MG UNKNOWN
  273. AMITRIPTYLINE [Interacting]
     Active Substance: AMITRIPTYLINE
     Indication: Chest pain
     Dosage: 75.0MG UNKNOWN
  274. AMITRIPTYLINE [Interacting]
     Active Substance: AMITRIPTYLINE
     Indication: Product used for unknown indication
     Dosage: 75.0MG UNKNOWN
  275. AMITRIPTYLINE [Interacting]
     Active Substance: AMITRIPTYLINE
     Indication: Insomnia
     Dosage: 75.0MG UNKNOWN
  276. AMITRIPTYLINE [Interacting]
     Active Substance: AMITRIPTYLINE
     Indication: Duodenal ulcer
     Dosage: 75.0MG UNKNOWN
  277. AMITRIPTYLINE [Interacting]
     Active Substance: AMITRIPTYLINE
     Indication: Arthritis
     Dosage: 75.0MG UNKNOWN
  278. AMITRIPTYLINE [Interacting]
     Active Substance: AMITRIPTYLINE
     Indication: Angina pectoris
     Dosage: 75.0MG UNKNOWN
  279. AMITRIPTYLINE [Interacting]
     Active Substance: AMITRIPTYLINE
     Indication: Thyroid disorder
     Dosage: 75.0MG UNKNOWN
  280. AMITRIPTYLINE [Interacting]
     Active Substance: AMITRIPTYLINE
     Indication: Radioactive iodine therapy
     Dosage: 75.0MG UNKNOWN
  281. AMITRIPTYLINE [Interacting]
     Active Substance: AMITRIPTYLINE
     Indication: Prophylaxis
     Dosage: 75.0MG UNKNOWN
  282. AMITRIPTYLINE [Interacting]
     Active Substance: AMITRIPTYLINE
     Indication: Pain
     Dosage: 75.0MG UNKNOWN
  283. AMITRIPTYLINE [Interacting]
     Active Substance: AMITRIPTYLINE
     Indication: Oedema
     Dosage: 75.0MG UNKNOWN
  284. AMITRIPTYLINE [Interacting]
     Active Substance: AMITRIPTYLINE
     Indication: Hypertension
     Dosage: 75.0MG UNKNOWN
  285. AMITRIPTYLINE [Interacting]
     Active Substance: AMITRIPTYLINE
     Indication: Fibromyalgia
     Dosage: 75.0MG UNKNOWN
  286. AMITRIPTYLINE [Interacting]
     Active Substance: AMITRIPTYLINE
     Indication: Dementia
     Dosage: 75.0MG UNKNOWN
  287. AMITRIPTYLINE [Interacting]
     Active Substance: AMITRIPTYLINE
     Indication: Coronary artery disease
     Dosage: 75.0MG UNKNOWN
  288. AMITRIPTYLINE [Interacting]
     Active Substance: AMITRIPTYLINE
     Indication: Constipation
     Dosage: 75.0MG UNKNOWN
  289. AMITRIPTYLINE [Interacting]
     Active Substance: AMITRIPTYLINE
     Indication: Chest pain
     Dosage: 75.0MG UNKNOWN
  290. AMITRIPTYLINE [Interacting]
     Active Substance: AMITRIPTYLINE
     Indication: Product used for unknown indication
     Dosage: 50.0MG UNKNOWN
  291. AMITRIPTYLINE [Interacting]
     Active Substance: AMITRIPTYLINE
     Indication: Insomnia
     Dosage: 50.0MG UNKNOWN
  292. AMITRIPTYLINE [Interacting]
     Active Substance: AMITRIPTYLINE
     Indication: Duodenal ulcer
     Dosage: 50.0MG UNKNOWN
  293. AMITRIPTYLINE [Interacting]
     Active Substance: AMITRIPTYLINE
     Indication: Arthritis
     Dosage: 50.0MG UNKNOWN
  294. AMITRIPTYLINE [Interacting]
     Active Substance: AMITRIPTYLINE
     Indication: Angina pectoris
     Dosage: 50.0MG UNKNOWN
  295. AMITRIPTYLINE [Interacting]
     Active Substance: AMITRIPTYLINE
     Indication: Thyroid disorder
     Dosage: 50.0MG UNKNOWN
  296. AMITRIPTYLINE [Interacting]
     Active Substance: AMITRIPTYLINE
     Indication: Radioactive iodine therapy
     Dosage: 50.0MG UNKNOWN
  297. AMITRIPTYLINE [Interacting]
     Active Substance: AMITRIPTYLINE
     Indication: Prophylaxis
     Dosage: 50.0MG UNKNOWN
  298. AMITRIPTYLINE [Interacting]
     Active Substance: AMITRIPTYLINE
     Indication: Pain
     Dosage: 50.0MG UNKNOWN
  299. AMITRIPTYLINE [Interacting]
     Active Substance: AMITRIPTYLINE
     Indication: Oedema
     Dosage: 50.0MG UNKNOWN
  300. AMITRIPTYLINE [Interacting]
     Active Substance: AMITRIPTYLINE
     Indication: Hypertension
     Dosage: 50.0MG UNKNOWN
  301. AMITRIPTYLINE [Interacting]
     Active Substance: AMITRIPTYLINE
     Indication: Fibromyalgia
     Dosage: 50.0MG UNKNOWN
  302. AMITRIPTYLINE [Interacting]
     Active Substance: AMITRIPTYLINE
     Indication: Dementia
     Dosage: 50.0MG UNKNOWN
  303. AMITRIPTYLINE [Interacting]
     Active Substance: AMITRIPTYLINE
     Indication: Coronary artery disease
     Dosage: 50.0MG UNKNOWN
  304. AMITRIPTYLINE [Interacting]
     Active Substance: AMITRIPTYLINE
     Indication: Constipation
     Dosage: 50.0MG UNKNOWN
  305. AMITRIPTYLINE [Interacting]
     Active Substance: AMITRIPTYLINE
     Indication: Chest pain
     Dosage: 50.0MG UNKNOWN
  306. AMITRIPTYLINE [Interacting]
     Active Substance: AMITRIPTYLINE
     Indication: Product used for unknown indication
     Dosage: 50.0MG UNKNOWN
  307. AMITRIPTYLINE [Interacting]
     Active Substance: AMITRIPTYLINE
     Indication: Insomnia
     Dosage: 50.0MG UNKNOWN
  308. AMITRIPTYLINE [Interacting]
     Active Substance: AMITRIPTYLINE
     Indication: Duodenal ulcer
     Dosage: 50.0MG UNKNOWN
  309. AMITRIPTYLINE [Interacting]
     Active Substance: AMITRIPTYLINE
     Indication: Arthritis
     Dosage: 50.0MG UNKNOWN
  310. AMITRIPTYLINE [Interacting]
     Active Substance: AMITRIPTYLINE
     Indication: Angina pectoris
     Dosage: 50.0MG UNKNOWN
  311. AMITRIPTYLINE [Interacting]
     Active Substance: AMITRIPTYLINE
     Indication: Thyroid disorder
     Dosage: 50.0MG UNKNOWN
  312. AMITRIPTYLINE [Interacting]
     Active Substance: AMITRIPTYLINE
     Indication: Radioactive iodine therapy
     Dosage: 50.0MG UNKNOWN
  313. AMITRIPTYLINE [Interacting]
     Active Substance: AMITRIPTYLINE
     Indication: Prophylaxis
     Dosage: 50.0MG UNKNOWN
  314. AMITRIPTYLINE [Interacting]
     Active Substance: AMITRIPTYLINE
     Indication: Pain
     Dosage: 50.0MG UNKNOWN
  315. AMITRIPTYLINE [Interacting]
     Active Substance: AMITRIPTYLINE
     Indication: Oedema
     Dosage: 50.0MG UNKNOWN
  316. AMITRIPTYLINE [Interacting]
     Active Substance: AMITRIPTYLINE
     Indication: Hypertension
     Dosage: 50.0MG UNKNOWN
  317. AMITRIPTYLINE [Interacting]
     Active Substance: AMITRIPTYLINE
     Indication: Fibromyalgia
     Dosage: 50.0MG UNKNOWN
  318. AMITRIPTYLINE [Interacting]
     Active Substance: AMITRIPTYLINE
     Indication: Dementia
     Dosage: 50.0MG UNKNOWN
  319. AMITRIPTYLINE [Interacting]
     Active Substance: AMITRIPTYLINE
     Indication: Coronary artery disease
     Dosage: 50.0MG UNKNOWN
  320. AMITRIPTYLINE [Interacting]
     Active Substance: AMITRIPTYLINE
     Indication: Constipation
     Dosage: 50.0MG UNKNOWN
  321. AMITRIPTYLINE [Interacting]
     Active Substance: AMITRIPTYLINE
     Indication: Chest pain
     Dosage: 50.0MG UNKNOWN
  322. AMITRIPTYLINE [Interacting]
     Active Substance: AMITRIPTYLINE
     Indication: Product used for unknown indication
     Dosage: 50.0MG UNKNOWN
  323. AMITRIPTYLINE [Interacting]
     Active Substance: AMITRIPTYLINE
     Indication: Insomnia
     Dosage: 50.0MG UNKNOWN
  324. AMITRIPTYLINE [Interacting]
     Active Substance: AMITRIPTYLINE
     Indication: Duodenal ulcer
     Dosage: 50.0MG UNKNOWN
  325. AMITRIPTYLINE [Interacting]
     Active Substance: AMITRIPTYLINE
     Indication: Arthritis
     Dosage: 50.0MG UNKNOWN
  326. AMITRIPTYLINE [Interacting]
     Active Substance: AMITRIPTYLINE
     Indication: Angina pectoris
     Dosage: 50.0MG UNKNOWN
  327. AMITRIPTYLINE [Interacting]
     Active Substance: AMITRIPTYLINE
     Indication: Thyroid disorder
     Dosage: 50.0MG UNKNOWN
  328. AMITRIPTYLINE [Interacting]
     Active Substance: AMITRIPTYLINE
     Indication: Radioactive iodine therapy
     Dosage: 50.0MG UNKNOWN
  329. AMITRIPTYLINE [Interacting]
     Active Substance: AMITRIPTYLINE
     Indication: Prophylaxis
     Dosage: 50.0MG UNKNOWN
  330. AMITRIPTYLINE [Interacting]
     Active Substance: AMITRIPTYLINE
     Indication: Pain
     Dosage: 50.0MG UNKNOWN
  331. AMITRIPTYLINE [Interacting]
     Active Substance: AMITRIPTYLINE
     Indication: Oedema
     Dosage: 50.0MG UNKNOWN
  332. AMITRIPTYLINE [Interacting]
     Active Substance: AMITRIPTYLINE
     Indication: Hypertension
     Dosage: 50.0MG UNKNOWN
  333. AMITRIPTYLINE [Interacting]
     Active Substance: AMITRIPTYLINE
     Indication: Fibromyalgia
     Dosage: 50.0MG UNKNOWN
  334. AMITRIPTYLINE [Interacting]
     Active Substance: AMITRIPTYLINE
     Indication: Dementia
     Dosage: 50.0MG UNKNOWN
  335. AMITRIPTYLINE [Interacting]
     Active Substance: AMITRIPTYLINE
     Indication: Coronary artery disease
     Dosage: 50.0MG UNKNOWN
  336. AMITRIPTYLINE [Interacting]
     Active Substance: AMITRIPTYLINE
     Indication: Constipation
     Dosage: 50.0MG UNKNOWN
  337. AMITRIPTYLINE [Interacting]
     Active Substance: AMITRIPTYLINE
     Indication: Chest pain
     Dosage: 50.0MG UNKNOWN
  338. AMITRIPTYLINE [Interacting]
     Active Substance: AMITRIPTYLINE
     Indication: Product used for unknown indication
     Dosage: 50.0MG UNKNOWN
  339. AMITRIPTYLINE [Interacting]
     Active Substance: AMITRIPTYLINE
     Indication: Insomnia
     Dosage: 50.0MG UNKNOWN
  340. AMITRIPTYLINE [Interacting]
     Active Substance: AMITRIPTYLINE
     Indication: Duodenal ulcer
     Dosage: 50.0MG UNKNOWN
  341. AMITRIPTYLINE [Interacting]
     Active Substance: AMITRIPTYLINE
     Indication: Arthritis
     Dosage: 50.0MG UNKNOWN
  342. AMITRIPTYLINE [Interacting]
     Active Substance: AMITRIPTYLINE
     Indication: Angina pectoris
     Dosage: 50.0MG UNKNOWN
  343. AMITRIPTYLINE [Interacting]
     Active Substance: AMITRIPTYLINE
     Indication: Thyroid disorder
     Dosage: 50.0MG UNKNOWN
  344. AMITRIPTYLINE [Interacting]
     Active Substance: AMITRIPTYLINE
     Indication: Radioactive iodine therapy
     Dosage: 50.0MG UNKNOWN
  345. AMITRIPTYLINE [Interacting]
     Active Substance: AMITRIPTYLINE
     Indication: Prophylaxis
     Dosage: 50.0MG UNKNOWN
  346. AMITRIPTYLINE [Interacting]
     Active Substance: AMITRIPTYLINE
     Indication: Pain
     Dosage: 50.0MG UNKNOWN
  347. AMITRIPTYLINE [Interacting]
     Active Substance: AMITRIPTYLINE
     Indication: Oedema
     Dosage: 50.0MG UNKNOWN
  348. AMITRIPTYLINE [Interacting]
     Active Substance: AMITRIPTYLINE
     Indication: Hypertension
     Dosage: 50.0MG UNKNOWN
  349. AMITRIPTYLINE [Interacting]
     Active Substance: AMITRIPTYLINE
     Indication: Fibromyalgia
     Dosage: 50.0MG UNKNOWN
  350. AMITRIPTYLINE [Interacting]
     Active Substance: AMITRIPTYLINE
     Indication: Dementia
     Dosage: 50.0MG UNKNOWN
  351. AMITRIPTYLINE [Interacting]
     Active Substance: AMITRIPTYLINE
     Indication: Coronary artery disease
     Dosage: 50.0MG UNKNOWN
  352. AMITRIPTYLINE [Interacting]
     Active Substance: AMITRIPTYLINE
     Indication: Constipation
     Dosage: 50.0MG UNKNOWN
  353. AMITRIPTYLINE [Interacting]
     Active Substance: AMITRIPTYLINE
     Indication: Chest pain
     Dosage: 50.0MG UNKNOWN
  354. AMITRIPTYLINE [Interacting]
     Active Substance: AMITRIPTYLINE
     Indication: Product used for unknown indication
     Dosage: 50.0MG UNKNOWN
  355. AMITRIPTYLINE [Interacting]
     Active Substance: AMITRIPTYLINE
     Indication: Insomnia
     Dosage: 50.0MG UNKNOWN
  356. AMITRIPTYLINE [Interacting]
     Active Substance: AMITRIPTYLINE
     Indication: Duodenal ulcer
     Dosage: 50.0MG UNKNOWN
  357. AMITRIPTYLINE [Interacting]
     Active Substance: AMITRIPTYLINE
     Indication: Arthritis
     Dosage: 50.0MG UNKNOWN
  358. AMITRIPTYLINE [Interacting]
     Active Substance: AMITRIPTYLINE
     Indication: Angina pectoris
     Dosage: 50.0MG UNKNOWN
  359. AMITRIPTYLINE [Interacting]
     Active Substance: AMITRIPTYLINE
     Indication: Thyroid disorder
     Dosage: 50.0MG UNKNOWN
  360. AMITRIPTYLINE [Interacting]
     Active Substance: AMITRIPTYLINE
     Indication: Radioactive iodine therapy
     Dosage: 50.0MG UNKNOWN
  361. AMITRIPTYLINE [Interacting]
     Active Substance: AMITRIPTYLINE
     Indication: Prophylaxis
     Dosage: 50.0MG UNKNOWN
  362. AMITRIPTYLINE [Interacting]
     Active Substance: AMITRIPTYLINE
     Indication: Pain
     Dosage: 50.0MG UNKNOWN
  363. AMITRIPTYLINE [Interacting]
     Active Substance: AMITRIPTYLINE
     Indication: Oedema
     Dosage: 50.0MG UNKNOWN
  364. AMITRIPTYLINE [Interacting]
     Active Substance: AMITRIPTYLINE
     Indication: Hypertension
     Dosage: 50.0MG UNKNOWN
  365. AMITRIPTYLINE [Interacting]
     Active Substance: AMITRIPTYLINE
     Indication: Fibromyalgia
     Dosage: 50.0MG UNKNOWN
  366. AMITRIPTYLINE [Interacting]
     Active Substance: AMITRIPTYLINE
     Indication: Dementia
     Dosage: 50.0MG UNKNOWN
  367. AMITRIPTYLINE [Interacting]
     Active Substance: AMITRIPTYLINE
     Indication: Coronary artery disease
     Dosage: 50.0MG UNKNOWN
  368. AMITRIPTYLINE [Interacting]
     Active Substance: AMITRIPTYLINE
     Indication: Constipation
     Dosage: 50.0MG UNKNOWN
  369. AMITRIPTYLINE [Interacting]
     Active Substance: AMITRIPTYLINE
     Indication: Chest pain
     Dosage: 50.0MG UNKNOWN
  370. AMITRIPTYLINE [Interacting]
     Active Substance: AMITRIPTYLINE
     Indication: Product used for unknown indication
     Dosage: 50.0MG UNKNOWN
  371. AMITRIPTYLINE [Interacting]
     Active Substance: AMITRIPTYLINE
     Indication: Insomnia
     Dosage: 50.0MG UNKNOWN
  372. AMITRIPTYLINE [Interacting]
     Active Substance: AMITRIPTYLINE
     Indication: Duodenal ulcer
     Dosage: 50.0MG UNKNOWN
  373. AMITRIPTYLINE [Interacting]
     Active Substance: AMITRIPTYLINE
     Indication: Arthritis
     Dosage: 50.0MG UNKNOWN
  374. AMITRIPTYLINE [Interacting]
     Active Substance: AMITRIPTYLINE
     Indication: Angina pectoris
     Dosage: 50.0MG UNKNOWN
  375. AMITRIPTYLINE [Interacting]
     Active Substance: AMITRIPTYLINE
     Indication: Thyroid disorder
     Dosage: 50.0MG UNKNOWN
  376. AMITRIPTYLINE [Interacting]
     Active Substance: AMITRIPTYLINE
     Indication: Radioactive iodine therapy
     Dosage: 50.0MG UNKNOWN
  377. AMITRIPTYLINE [Interacting]
     Active Substance: AMITRIPTYLINE
     Indication: Prophylaxis
     Dosage: 50.0MG UNKNOWN
  378. AMITRIPTYLINE [Interacting]
     Active Substance: AMITRIPTYLINE
     Indication: Pain
     Dosage: 50.0MG UNKNOWN
  379. AMITRIPTYLINE [Interacting]
     Active Substance: AMITRIPTYLINE
     Indication: Oedema
     Dosage: 50.0MG UNKNOWN
  380. AMITRIPTYLINE [Interacting]
     Active Substance: AMITRIPTYLINE
     Indication: Hypertension
     Dosage: 50.0MG UNKNOWN
  381. AMITRIPTYLINE [Interacting]
     Active Substance: AMITRIPTYLINE
     Indication: Fibromyalgia
     Dosage: 50.0MG UNKNOWN
  382. AMITRIPTYLINE [Interacting]
     Active Substance: AMITRIPTYLINE
     Indication: Dementia
     Dosage: 50.0MG UNKNOWN
  383. AMITRIPTYLINE [Interacting]
     Active Substance: AMITRIPTYLINE
     Indication: Coronary artery disease
     Dosage: 50.0MG UNKNOWN
  384. AMITRIPTYLINE [Interacting]
     Active Substance: AMITRIPTYLINE
     Indication: Constipation
     Dosage: 50.0MG UNKNOWN
  385. AMITRIPTYLINE [Interacting]
     Active Substance: AMITRIPTYLINE
     Indication: Chest pain
     Dosage: 50.0MG UNKNOWN
  386. AMITRIPTYLINE [Interacting]
     Active Substance: AMITRIPTYLINE
     Indication: Product used for unknown indication
     Dosage: 50.0MG UNKNOWN
  387. AMITRIPTYLINE [Interacting]
     Active Substance: AMITRIPTYLINE
     Indication: Insomnia
     Dosage: 50.0MG UNKNOWN
  388. AMITRIPTYLINE [Interacting]
     Active Substance: AMITRIPTYLINE
     Indication: Duodenal ulcer
     Dosage: 50.0MG UNKNOWN
  389. AMITRIPTYLINE [Interacting]
     Active Substance: AMITRIPTYLINE
     Indication: Arthritis
     Dosage: 50.0MG UNKNOWN
  390. AMITRIPTYLINE [Interacting]
     Active Substance: AMITRIPTYLINE
     Indication: Angina pectoris
     Dosage: 50.0MG UNKNOWN
  391. AMITRIPTYLINE [Interacting]
     Active Substance: AMITRIPTYLINE
     Indication: Thyroid disorder
     Dosage: 50.0MG UNKNOWN
  392. AMITRIPTYLINE [Interacting]
     Active Substance: AMITRIPTYLINE
     Indication: Radioactive iodine therapy
     Dosage: 50.0MG UNKNOWN
  393. AMITRIPTYLINE [Interacting]
     Active Substance: AMITRIPTYLINE
     Indication: Prophylaxis
     Dosage: 50.0MG UNKNOWN
  394. AMITRIPTYLINE [Interacting]
     Active Substance: AMITRIPTYLINE
     Indication: Pain
     Dosage: 50.0MG UNKNOWN
  395. AMITRIPTYLINE [Interacting]
     Active Substance: AMITRIPTYLINE
     Indication: Oedema
     Dosage: 50.0MG UNKNOWN
  396. AMITRIPTYLINE [Interacting]
     Active Substance: AMITRIPTYLINE
     Indication: Hypertension
     Dosage: 50.0MG UNKNOWN
  397. AMITRIPTYLINE [Interacting]
     Active Substance: AMITRIPTYLINE
     Indication: Fibromyalgia
     Dosage: 50.0MG UNKNOWN
  398. AMITRIPTYLINE [Interacting]
     Active Substance: AMITRIPTYLINE
     Indication: Dementia
     Dosage: 50.0MG UNKNOWN
  399. AMITRIPTYLINE [Interacting]
     Active Substance: AMITRIPTYLINE
     Indication: Coronary artery disease
     Dosage: 50.0MG UNKNOWN
  400. AMITRIPTYLINE [Interacting]
     Active Substance: AMITRIPTYLINE
     Indication: Constipation
     Dosage: 50.0MG UNKNOWN
  401. AMITRIPTYLINE [Interacting]
     Active Substance: AMITRIPTYLINE
     Indication: Chest pain
     Dosage: 50.0MG UNKNOWN
  402. AMITRIPTYLINE [Interacting]
     Active Substance: AMITRIPTYLINE
     Indication: Product used for unknown indication
     Dosage: 50.0MG UNKNOWN
  403. AMITRIPTYLINE [Interacting]
     Active Substance: AMITRIPTYLINE
     Indication: Insomnia
     Dosage: 50.0MG UNKNOWN
  404. AMITRIPTYLINE [Interacting]
     Active Substance: AMITRIPTYLINE
     Indication: Duodenal ulcer
     Dosage: 50.0MG UNKNOWN
  405. AMITRIPTYLINE [Interacting]
     Active Substance: AMITRIPTYLINE
     Indication: Arthritis
     Dosage: 50.0MG UNKNOWN
  406. AMITRIPTYLINE [Interacting]
     Active Substance: AMITRIPTYLINE
     Indication: Angina pectoris
     Dosage: 50.0MG UNKNOWN
  407. AMITRIPTYLINE [Interacting]
     Active Substance: AMITRIPTYLINE
     Indication: Thyroid disorder
     Dosage: 50.0MG UNKNOWN
  408. AMITRIPTYLINE [Interacting]
     Active Substance: AMITRIPTYLINE
     Indication: Radioactive iodine therapy
     Dosage: 50.0MG UNKNOWN
  409. AMITRIPTYLINE [Interacting]
     Active Substance: AMITRIPTYLINE
     Indication: Prophylaxis
     Dosage: 50.0MG UNKNOWN
  410. AMITRIPTYLINE [Interacting]
     Active Substance: AMITRIPTYLINE
     Indication: Pain
     Dosage: 50.0MG UNKNOWN
  411. AMITRIPTYLINE [Interacting]
     Active Substance: AMITRIPTYLINE
     Indication: Oedema
     Dosage: 50.0MG UNKNOWN
  412. AMITRIPTYLINE [Interacting]
     Active Substance: AMITRIPTYLINE
     Indication: Hypertension
     Dosage: 50.0MG UNKNOWN
  413. AMITRIPTYLINE [Interacting]
     Active Substance: AMITRIPTYLINE
     Indication: Fibromyalgia
     Dosage: 50.0MG UNKNOWN
  414. AMITRIPTYLINE [Interacting]
     Active Substance: AMITRIPTYLINE
     Indication: Dementia
     Dosage: 50.0MG UNKNOWN
  415. AMITRIPTYLINE [Interacting]
     Active Substance: AMITRIPTYLINE
     Indication: Coronary artery disease
     Dosage: 50.0MG UNKNOWN
  416. AMITRIPTYLINE [Interacting]
     Active Substance: AMITRIPTYLINE
     Indication: Constipation
     Dosage: 50.0MG UNKNOWN
  417. AMITRIPTYLINE [Interacting]
     Active Substance: AMITRIPTYLINE
     Indication: Chest pain
     Dosage: 50.0MG UNKNOWN
  418. AMITRIPTYLINE [Interacting]
     Active Substance: AMITRIPTYLINE
     Indication: Product used for unknown indication
     Dosage: 50.0MG UNKNOWN
  419. AMITRIPTYLINE [Interacting]
     Active Substance: AMITRIPTYLINE
     Indication: Insomnia
     Dosage: 50.0MG UNKNOWN
  420. AMITRIPTYLINE [Interacting]
     Active Substance: AMITRIPTYLINE
     Indication: Duodenal ulcer
     Dosage: 50.0MG UNKNOWN
  421. AMITRIPTYLINE [Interacting]
     Active Substance: AMITRIPTYLINE
     Indication: Arthritis
     Dosage: 50.0MG UNKNOWN
  422. AMITRIPTYLINE [Interacting]
     Active Substance: AMITRIPTYLINE
     Indication: Angina pectoris
     Dosage: 50.0MG UNKNOWN
  423. AMITRIPTYLINE [Interacting]
     Active Substance: AMITRIPTYLINE
     Indication: Thyroid disorder
     Dosage: 50.0MG UNKNOWN
  424. AMITRIPTYLINE [Interacting]
     Active Substance: AMITRIPTYLINE
     Indication: Radioactive iodine therapy
     Dosage: 50.0MG UNKNOWN
  425. AMITRIPTYLINE [Interacting]
     Active Substance: AMITRIPTYLINE
     Indication: Prophylaxis
     Dosage: 50.0MG UNKNOWN
  426. AMITRIPTYLINE [Interacting]
     Active Substance: AMITRIPTYLINE
     Indication: Pain
     Dosage: 50.0MG UNKNOWN
  427. AMITRIPTYLINE [Interacting]
     Active Substance: AMITRIPTYLINE
     Indication: Oedema
     Dosage: 50.0MG UNKNOWN
  428. AMITRIPTYLINE [Interacting]
     Active Substance: AMITRIPTYLINE
     Indication: Hypertension
     Dosage: 50.0MG UNKNOWN
  429. AMITRIPTYLINE [Interacting]
     Active Substance: AMITRIPTYLINE
     Indication: Fibromyalgia
     Dosage: 50.0MG UNKNOWN
  430. AMITRIPTYLINE [Interacting]
     Active Substance: AMITRIPTYLINE
     Indication: Dementia
     Dosage: 50.0MG UNKNOWN
  431. AMITRIPTYLINE [Interacting]
     Active Substance: AMITRIPTYLINE
     Indication: Coronary artery disease
     Dosage: 50.0MG UNKNOWN
  432. AMITRIPTYLINE [Interacting]
     Active Substance: AMITRIPTYLINE
     Indication: Constipation
     Dosage: 50.0MG UNKNOWN
  433. AMITRIPTYLINE [Interacting]
     Active Substance: AMITRIPTYLINE
     Indication: Chest pain
     Dosage: 50.0MG UNKNOWN
  434. AMITRIPTYLINE [Interacting]
     Active Substance: AMITRIPTYLINE
     Indication: Product used for unknown indication
     Dosage: 50.0MG UNKNOWN
  435. AMITRIPTYLINE [Interacting]
     Active Substance: AMITRIPTYLINE
     Indication: Insomnia
     Dosage: 50.0MG UNKNOWN
  436. AMITRIPTYLINE [Interacting]
     Active Substance: AMITRIPTYLINE
     Indication: Duodenal ulcer
     Dosage: 50.0MG UNKNOWN
  437. AMITRIPTYLINE [Interacting]
     Active Substance: AMITRIPTYLINE
     Indication: Arthritis
     Dosage: 50.0MG UNKNOWN
  438. AMITRIPTYLINE [Interacting]
     Active Substance: AMITRIPTYLINE
     Indication: Angina pectoris
     Dosage: 50.0MG UNKNOWN
  439. AMITRIPTYLINE [Interacting]
     Active Substance: AMITRIPTYLINE
     Indication: Thyroid disorder
     Dosage: 50.0MG UNKNOWN
  440. AMITRIPTYLINE [Interacting]
     Active Substance: AMITRIPTYLINE
     Indication: Radioactive iodine therapy
     Dosage: 50.0MG UNKNOWN
  441. AMITRIPTYLINE [Interacting]
     Active Substance: AMITRIPTYLINE
     Indication: Prophylaxis
     Dosage: 50.0MG UNKNOWN
  442. AMITRIPTYLINE [Interacting]
     Active Substance: AMITRIPTYLINE
     Indication: Pain
     Dosage: 50.0MG UNKNOWN
  443. AMITRIPTYLINE [Interacting]
     Active Substance: AMITRIPTYLINE
     Indication: Oedema
     Dosage: 50.0MG UNKNOWN
  444. AMITRIPTYLINE [Interacting]
     Active Substance: AMITRIPTYLINE
     Indication: Hypertension
     Dosage: 50.0MG UNKNOWN
  445. AMITRIPTYLINE [Interacting]
     Active Substance: AMITRIPTYLINE
     Indication: Fibromyalgia
     Dosage: 50.0MG UNKNOWN
  446. AMITRIPTYLINE [Interacting]
     Active Substance: AMITRIPTYLINE
     Indication: Dementia
     Dosage: 50.0MG UNKNOWN
  447. AMITRIPTYLINE [Interacting]
     Active Substance: AMITRIPTYLINE
     Indication: Coronary artery disease
     Dosage: 50.0MG UNKNOWN
  448. AMITRIPTYLINE [Interacting]
     Active Substance: AMITRIPTYLINE
     Indication: Constipation
     Dosage: 50.0MG UNKNOWN
  449. AMITRIPTYLINE [Interacting]
     Active Substance: AMITRIPTYLINE
     Indication: Chest pain
     Dosage: 50.0MG UNKNOWN
  450. AMITRIPTYLINE [Interacting]
     Active Substance: AMITRIPTYLINE
     Indication: Product used for unknown indication
     Dosage: 50.0MG UNKNOWN
  451. AMITRIPTYLINE [Interacting]
     Active Substance: AMITRIPTYLINE
     Indication: Insomnia
     Dosage: 50.0MG UNKNOWN
  452. AMITRIPTYLINE [Interacting]
     Active Substance: AMITRIPTYLINE
     Indication: Duodenal ulcer
     Dosage: 50.0MG UNKNOWN
  453. AMITRIPTYLINE [Interacting]
     Active Substance: AMITRIPTYLINE
     Indication: Arthritis
     Dosage: 50.0MG UNKNOWN
  454. AMITRIPTYLINE [Interacting]
     Active Substance: AMITRIPTYLINE
     Indication: Angina pectoris
     Dosage: 50.0MG UNKNOWN
  455. AMITRIPTYLINE [Interacting]
     Active Substance: AMITRIPTYLINE
     Indication: Thyroid disorder
     Dosage: 50.0MG UNKNOWN
  456. AMITRIPTYLINE [Interacting]
     Active Substance: AMITRIPTYLINE
     Indication: Radioactive iodine therapy
     Dosage: 50.0MG UNKNOWN
  457. AMITRIPTYLINE [Interacting]
     Active Substance: AMITRIPTYLINE
     Indication: Prophylaxis
     Dosage: 50.0MG UNKNOWN
  458. AMITRIPTYLINE [Interacting]
     Active Substance: AMITRIPTYLINE
     Indication: Pain
     Dosage: 50.0MG UNKNOWN
  459. AMITRIPTYLINE [Interacting]
     Active Substance: AMITRIPTYLINE
     Indication: Oedema
     Dosage: 50.0MG UNKNOWN
  460. AMITRIPTYLINE [Interacting]
     Active Substance: AMITRIPTYLINE
     Indication: Hypertension
     Dosage: 50.0MG UNKNOWN
  461. AMITRIPTYLINE [Interacting]
     Active Substance: AMITRIPTYLINE
     Indication: Fibromyalgia
     Dosage: 50.0MG UNKNOWN
  462. AMITRIPTYLINE [Interacting]
     Active Substance: AMITRIPTYLINE
     Indication: Dementia
     Dosage: 50.0MG UNKNOWN
  463. AMITRIPTYLINE [Interacting]
     Active Substance: AMITRIPTYLINE
     Indication: Coronary artery disease
     Dosage: 50.0MG UNKNOWN
  464. AMITRIPTYLINE [Interacting]
     Active Substance: AMITRIPTYLINE
     Indication: Constipation
     Dosage: 50.0MG UNKNOWN
  465. AMITRIPTYLINE [Interacting]
     Active Substance: AMITRIPTYLINE
     Indication: Chest pain
     Dosage: 50.0MG UNKNOWN
  466. AMITRIPTYLINE [Interacting]
     Active Substance: AMITRIPTYLINE
     Indication: Product used for unknown indication
     Dosage: 50.0MG UNKNOWN
  467. AMITRIPTYLINE [Interacting]
     Active Substance: AMITRIPTYLINE
     Indication: Insomnia
     Dosage: 50.0MG UNKNOWN
  468. AMITRIPTYLINE [Interacting]
     Active Substance: AMITRIPTYLINE
     Indication: Duodenal ulcer
     Dosage: 50.0MG UNKNOWN
  469. AMITRIPTYLINE [Interacting]
     Active Substance: AMITRIPTYLINE
     Indication: Arthritis
     Dosage: 50.0MG UNKNOWN
  470. AMITRIPTYLINE [Interacting]
     Active Substance: AMITRIPTYLINE
     Indication: Angina pectoris
     Dosage: 50.0MG UNKNOWN
  471. AMITRIPTYLINE [Interacting]
     Active Substance: AMITRIPTYLINE
     Indication: Thyroid disorder
     Dosage: 50.0MG UNKNOWN
  472. AMITRIPTYLINE [Interacting]
     Active Substance: AMITRIPTYLINE
     Indication: Radioactive iodine therapy
     Dosage: 50.0MG UNKNOWN
  473. AMITRIPTYLINE [Interacting]
     Active Substance: AMITRIPTYLINE
     Indication: Prophylaxis
     Dosage: 50.0MG UNKNOWN
  474. AMITRIPTYLINE [Interacting]
     Active Substance: AMITRIPTYLINE
     Indication: Pain
     Dosage: 50.0MG UNKNOWN
  475. AMITRIPTYLINE [Interacting]
     Active Substance: AMITRIPTYLINE
     Indication: Oedema
     Dosage: 50.0MG UNKNOWN
  476. AMITRIPTYLINE [Interacting]
     Active Substance: AMITRIPTYLINE
     Indication: Hypertension
     Dosage: 50.0MG UNKNOWN
  477. AMITRIPTYLINE [Interacting]
     Active Substance: AMITRIPTYLINE
     Indication: Fibromyalgia
     Dosage: 50.0MG UNKNOWN
  478. AMITRIPTYLINE [Interacting]
     Active Substance: AMITRIPTYLINE
     Indication: Dementia
     Dosage: 50.0MG UNKNOWN
  479. AMITRIPTYLINE [Interacting]
     Active Substance: AMITRIPTYLINE
     Indication: Coronary artery disease
     Dosage: 50.0MG UNKNOWN
  480. AMITRIPTYLINE [Interacting]
     Active Substance: AMITRIPTYLINE
     Indication: Constipation
     Dosage: 50.0MG UNKNOWN
  481. AMITRIPTYLINE [Interacting]
     Active Substance: AMITRIPTYLINE
     Indication: Chest pain
     Dosage: 50.0MG UNKNOWN
  482. AMITRIPTYLINE [Interacting]
     Active Substance: AMITRIPTYLINE
     Indication: Product used for unknown indication
     Dosage: 50.0MG UNKNOWN
  483. AMITRIPTYLINE [Interacting]
     Active Substance: AMITRIPTYLINE
     Indication: Insomnia
     Dosage: 50.0MG UNKNOWN
  484. AMITRIPTYLINE [Interacting]
     Active Substance: AMITRIPTYLINE
     Indication: Duodenal ulcer
     Dosage: 50.0MG UNKNOWN
  485. AMITRIPTYLINE [Interacting]
     Active Substance: AMITRIPTYLINE
     Indication: Arthritis
     Dosage: 50.0MG UNKNOWN
  486. AMITRIPTYLINE [Interacting]
     Active Substance: AMITRIPTYLINE
     Indication: Angina pectoris
     Dosage: 50.0MG UNKNOWN
  487. AMITRIPTYLINE [Interacting]
     Active Substance: AMITRIPTYLINE
     Indication: Thyroid disorder
     Dosage: 50.0MG UNKNOWN
  488. AMITRIPTYLINE [Interacting]
     Active Substance: AMITRIPTYLINE
     Indication: Radioactive iodine therapy
     Dosage: 50.0MG UNKNOWN
  489. AMITRIPTYLINE [Interacting]
     Active Substance: AMITRIPTYLINE
     Indication: Prophylaxis
     Dosage: 50.0MG UNKNOWN
  490. AMITRIPTYLINE [Interacting]
     Active Substance: AMITRIPTYLINE
     Indication: Pain
     Dosage: 50.0MG UNKNOWN
  491. AMITRIPTYLINE [Interacting]
     Active Substance: AMITRIPTYLINE
     Indication: Oedema
     Dosage: 50.0MG UNKNOWN
  492. AMITRIPTYLINE [Interacting]
     Active Substance: AMITRIPTYLINE
     Indication: Hypertension
     Dosage: 50.0MG UNKNOWN
  493. AMITRIPTYLINE [Interacting]
     Active Substance: AMITRIPTYLINE
     Indication: Fibromyalgia
     Dosage: 50.0MG UNKNOWN
  494. AMITRIPTYLINE [Interacting]
     Active Substance: AMITRIPTYLINE
     Indication: Dementia
     Dosage: 50.0MG UNKNOWN
  495. AMITRIPTYLINE [Interacting]
     Active Substance: AMITRIPTYLINE
     Indication: Coronary artery disease
     Dosage: 50.0MG UNKNOWN
  496. AMITRIPTYLINE [Interacting]
     Active Substance: AMITRIPTYLINE
     Indication: Constipation
     Dosage: 50.0MG UNKNOWN
  497. AMITRIPTYLINE [Interacting]
     Active Substance: AMITRIPTYLINE
     Indication: Chest pain
     Dosage: 50.0MG UNKNOWN
  498. AMLODIPINE BESYLATE [Interacting]
     Active Substance: AMLODIPINE BESYLATE
     Indication: Hypertension
  499. AMLODIPINE BESYLATE [Interacting]
     Active Substance: AMLODIPINE BESYLATE
     Indication: Coronary artery disease
  500. AMLODIPINE BESYLATE [Interacting]
     Active Substance: AMLODIPINE BESYLATE
     Indication: Angina pectoris
  501. AMLODIPINE BESYLATE [Interacting]
     Active Substance: AMLODIPINE BESYLATE
     Indication: Hypertension
     Dosage: UNKNOWN
  502. AMLODIPINE BESYLATE [Interacting]
     Active Substance: AMLODIPINE BESYLATE
     Indication: Coronary artery disease
     Dosage: UNKNOWN
  503. AMLODIPINE BESYLATE [Interacting]
     Active Substance: AMLODIPINE BESYLATE
     Indication: Angina pectoris
     Dosage: UNKNOWN
  504. AMLODIPINE BESYLATE [Interacting]
     Active Substance: AMLODIPINE BESYLATE
     Indication: Hypertension
     Dosage: UNKNOWN
  505. AMLODIPINE BESYLATE [Interacting]
     Active Substance: AMLODIPINE BESYLATE
     Indication: Coronary artery disease
     Dosage: UNKNOWN
  506. AMLODIPINE BESYLATE [Interacting]
     Active Substance: AMLODIPINE BESYLATE
     Indication: Angina pectoris
     Dosage: UNKNOWN
  507. AMLODIPINE BESYLATE [Interacting]
     Active Substance: AMLODIPINE BESYLATE
     Indication: Hypertension
     Dosage: 5.0MG UNKNOWN
  508. AMLODIPINE BESYLATE [Interacting]
     Active Substance: AMLODIPINE BESYLATE
     Indication: Coronary artery disease
     Dosage: 5.0MG UNKNOWN
  509. AMLODIPINE BESYLATE [Interacting]
     Active Substance: AMLODIPINE BESYLATE
     Indication: Angina pectoris
     Dosage: 5.0MG UNKNOWN
  510. AMLODIPINE BESYLATE [Interacting]
     Active Substance: AMLODIPINE BESYLATE
     Indication: Hypertension
     Dosage: 5.0MG UNKNOWN
  511. AMLODIPINE BESYLATE [Interacting]
     Active Substance: AMLODIPINE BESYLATE
     Indication: Coronary artery disease
     Dosage: 5.0MG UNKNOWN
  512. AMLODIPINE BESYLATE [Interacting]
     Active Substance: AMLODIPINE BESYLATE
     Indication: Angina pectoris
     Dosage: 5.0MG UNKNOWN
  513. AMLODIPINE BESYLATE [Interacting]
     Active Substance: AMLODIPINE BESYLATE
     Indication: Hypertension
     Dosage: 5.0MG UNKNOWN
  514. AMLODIPINE BESYLATE [Interacting]
     Active Substance: AMLODIPINE BESYLATE
     Indication: Coronary artery disease
     Dosage: 5.0MG UNKNOWN
  515. AMLODIPINE BESYLATE [Interacting]
     Active Substance: AMLODIPINE BESYLATE
     Indication: Angina pectoris
     Dosage: 5.0MG UNKNOWN
  516. AMLODIPINE BESYLATE [Interacting]
     Active Substance: AMLODIPINE BESYLATE
     Indication: Hypertension
     Dosage: 5.0MG UNKNOWN
  517. AMLODIPINE BESYLATE [Interacting]
     Active Substance: AMLODIPINE BESYLATE
     Indication: Coronary artery disease
     Dosage: 5.0MG UNKNOWN
  518. AMLODIPINE BESYLATE [Interacting]
     Active Substance: AMLODIPINE BESYLATE
     Indication: Angina pectoris
     Dosage: 5.0MG UNKNOWN
  519. AMLODIPINE BESYLATE [Interacting]
     Active Substance: AMLODIPINE BESYLATE
     Indication: Hypertension
     Dosage: UNKNOWN
  520. AMLODIPINE BESYLATE [Interacting]
     Active Substance: AMLODIPINE BESYLATE
     Indication: Coronary artery disease
     Dosage: UNKNOWN
  521. AMLODIPINE BESYLATE [Interacting]
     Active Substance: AMLODIPINE BESYLATE
     Indication: Angina pectoris
     Dosage: UNKNOWN
  522. AMLODIPINE BESYLATE [Interacting]
     Active Substance: AMLODIPINE BESYLATE
     Indication: Hypertension
     Dosage: UNKNOWN
  523. AMLODIPINE BESYLATE [Interacting]
     Active Substance: AMLODIPINE BESYLATE
     Indication: Coronary artery disease
     Dosage: UNKNOWN
  524. AMLODIPINE BESYLATE [Interacting]
     Active Substance: AMLODIPINE BESYLATE
     Indication: Angina pectoris
     Dosage: UNKNOWN
  525. AMLODIPINE BESYLATE [Interacting]
     Active Substance: AMLODIPINE BESYLATE
     Indication: Hypertension
     Dosage: UNKNOWN
  526. AMLODIPINE BESYLATE [Interacting]
     Active Substance: AMLODIPINE BESYLATE
     Indication: Coronary artery disease
     Dosage: UNKNOWN
  527. AMLODIPINE BESYLATE [Interacting]
     Active Substance: AMLODIPINE BESYLATE
     Indication: Angina pectoris
     Dosage: UNKNOWN
  528. AMLODIPINE BESYLATE [Interacting]
     Active Substance: AMLODIPINE BESYLATE
     Indication: Hypertension
     Dosage: UNKNOWN
  529. AMLODIPINE BESYLATE [Interacting]
     Active Substance: AMLODIPINE BESYLATE
     Indication: Coronary artery disease
     Dosage: UNKNOWN
  530. AMLODIPINE BESYLATE [Interacting]
     Active Substance: AMLODIPINE BESYLATE
     Indication: Angina pectoris
     Dosage: UNKNOWN
  531. AMLODIPINE BESYLATE [Interacting]
     Active Substance: AMLODIPINE BESYLATE
     Indication: Hypertension
     Dosage: UNKNOWN
  532. AMLODIPINE BESYLATE [Interacting]
     Active Substance: AMLODIPINE BESYLATE
     Indication: Coronary artery disease
     Dosage: UNKNOWN
  533. AMLODIPINE BESYLATE [Interacting]
     Active Substance: AMLODIPINE BESYLATE
     Indication: Angina pectoris
     Dosage: UNKNOWN
  534. AMLODIPINE BESYLATE [Interacting]
     Active Substance: AMLODIPINE BESYLATE
     Indication: Hypertension
     Dosage: UNKNOWN
  535. AMLODIPINE BESYLATE [Interacting]
     Active Substance: AMLODIPINE BESYLATE
     Indication: Coronary artery disease
     Dosage: UNKNOWN
  536. AMLODIPINE BESYLATE [Interacting]
     Active Substance: AMLODIPINE BESYLATE
     Indication: Angina pectoris
     Dosage: UNKNOWN
  537. AMLODIPINE BESYLATE [Interacting]
     Active Substance: AMLODIPINE BESYLATE
     Indication: Hypertension
     Dosage: UNKNOWN
  538. AMLODIPINE BESYLATE [Interacting]
     Active Substance: AMLODIPINE BESYLATE
     Indication: Coronary artery disease
     Dosage: UNKNOWN
  539. AMLODIPINE BESYLATE [Interacting]
     Active Substance: AMLODIPINE BESYLATE
     Indication: Angina pectoris
     Dosage: UNKNOWN
  540. AMLODIPINE BESYLATE [Interacting]
     Active Substance: AMLODIPINE BESYLATE
     Indication: Hypertension
     Dosage: UNKNOWN
  541. AMLODIPINE BESYLATE [Interacting]
     Active Substance: AMLODIPINE BESYLATE
     Indication: Coronary artery disease
     Dosage: UNKNOWN
  542. AMLODIPINE BESYLATE [Interacting]
     Active Substance: AMLODIPINE BESYLATE
     Indication: Angina pectoris
     Dosage: UNKNOWN
  543. AMLODIPINE BESYLATE [Interacting]
     Active Substance: AMLODIPINE BESYLATE
     Indication: Hypertension
     Dosage: UNKNOWN
  544. AMLODIPINE BESYLATE [Interacting]
     Active Substance: AMLODIPINE BESYLATE
     Indication: Coronary artery disease
     Dosage: UNKNOWN
  545. AMLODIPINE BESYLATE [Interacting]
     Active Substance: AMLODIPINE BESYLATE
     Indication: Angina pectoris
     Dosage: UNKNOWN
  546. AMLODIPINE BESYLATE [Interacting]
     Active Substance: AMLODIPINE BESYLATE
     Indication: Hypertension
     Dosage: UNKNOWN
  547. AMLODIPINE BESYLATE [Interacting]
     Active Substance: AMLODIPINE BESYLATE
     Indication: Coronary artery disease
     Dosage: UNKNOWN
  548. AMLODIPINE BESYLATE [Interacting]
     Active Substance: AMLODIPINE BESYLATE
     Indication: Angina pectoris
     Dosage: UNKNOWN
  549. AMLODIPINE BESYLATE [Interacting]
     Active Substance: AMLODIPINE BESYLATE
     Indication: Hypertension
     Dosage: UNKNOWN
  550. AMLODIPINE BESYLATE [Interacting]
     Active Substance: AMLODIPINE BESYLATE
     Indication: Coronary artery disease
     Dosage: UNKNOWN
  551. AMLODIPINE BESYLATE [Interacting]
     Active Substance: AMLODIPINE BESYLATE
     Indication: Angina pectoris
     Dosage: UNKNOWN
  552. AMLODIPINE BESYLATE [Interacting]
     Active Substance: AMLODIPINE BESYLATE
     Indication: Hypertension
     Dosage: UNKNOWN
  553. AMLODIPINE BESYLATE [Interacting]
     Active Substance: AMLODIPINE BESYLATE
     Indication: Coronary artery disease
     Dosage: UNKNOWN
  554. AMLODIPINE BESYLATE [Interacting]
     Active Substance: AMLODIPINE BESYLATE
     Indication: Angina pectoris
     Dosage: UNKNOWN
  555. AMLODIPINE BESYLATE [Interacting]
     Active Substance: AMLODIPINE BESYLATE
     Indication: Hypertension
     Dosage: UNKNOWN
  556. AMLODIPINE BESYLATE [Interacting]
     Active Substance: AMLODIPINE BESYLATE
     Indication: Coronary artery disease
     Dosage: UNKNOWN
  557. AMLODIPINE BESYLATE [Interacting]
     Active Substance: AMLODIPINE BESYLATE
     Indication: Angina pectoris
     Dosage: UNKNOWN
  558. AMLODIPINE BESYLATE [Interacting]
     Active Substance: AMLODIPINE BESYLATE
     Indication: Hypertension
     Dosage: UNKNOWN
  559. AMLODIPINE BESYLATE [Interacting]
     Active Substance: AMLODIPINE BESYLATE
     Indication: Coronary artery disease
     Dosage: UNKNOWN
  560. AMLODIPINE BESYLATE [Interacting]
     Active Substance: AMLODIPINE BESYLATE
     Indication: Angina pectoris
     Dosage: UNKNOWN
  561. AMLODIPINE BESYLATE [Interacting]
     Active Substance: AMLODIPINE BESYLATE
     Indication: Hypertension
     Dosage: UNKNOWN
  562. AMLODIPINE BESYLATE [Interacting]
     Active Substance: AMLODIPINE BESYLATE
     Indication: Coronary artery disease
     Dosage: UNKNOWN
  563. AMLODIPINE BESYLATE [Interacting]
     Active Substance: AMLODIPINE BESYLATE
     Indication: Angina pectoris
     Dosage: UNKNOWN
  564. AMLODIPINE BESYLATE [Interacting]
     Active Substance: AMLODIPINE BESYLATE
     Indication: Hypertension
     Dosage: UNKNOWN
  565. AMLODIPINE BESYLATE [Interacting]
     Active Substance: AMLODIPINE BESYLATE
     Indication: Coronary artery disease
     Dosage: UNKNOWN
  566. AMLODIPINE BESYLATE [Interacting]
     Active Substance: AMLODIPINE BESYLATE
     Indication: Angina pectoris
     Dosage: UNKNOWN
  567. AMLODIPINE BESYLATE [Interacting]
     Active Substance: AMLODIPINE BESYLATE
     Indication: Hypertension
     Dosage: UNKNOWN
  568. AMLODIPINE BESYLATE [Interacting]
     Active Substance: AMLODIPINE BESYLATE
     Indication: Coronary artery disease
     Dosage: UNKNOWN
  569. AMLODIPINE BESYLATE [Interacting]
     Active Substance: AMLODIPINE BESYLATE
     Indication: Angina pectoris
     Dosage: UNKNOWN
  570. AMITRIPTYLINE HYDROCHLORIDE [Interacting]
     Active Substance: AMITRIPTYLINE HYDROCHLORIDE
     Indication: Insomnia
  571. AMITRIPTYLINE HYDROCHLORIDE [Interacting]
     Active Substance: AMITRIPTYLINE HYDROCHLORIDE
     Indication: Insomnia
  572. AMITRIPTYLINE HYDROCHLORIDE [Interacting]
     Active Substance: AMITRIPTYLINE HYDROCHLORIDE
     Indication: Insomnia
  573. AMITRIPTYLINE HYDROCHLORIDE [Interacting]
     Active Substance: AMITRIPTYLINE HYDROCHLORIDE
     Indication: Insomnia
  574. AMITRIPTYLINE HYDROCHLORIDE [Interacting]
     Active Substance: AMITRIPTYLINE HYDROCHLORIDE
     Indication: Insomnia
  575. AMITRIPTYLINE HYDROCHLORIDE [Interacting]
     Active Substance: AMITRIPTYLINE HYDROCHLORIDE
     Indication: Insomnia
  576. AMITRIPTYLINE HYDROCHLORIDE [Interacting]
     Active Substance: AMITRIPTYLINE HYDROCHLORIDE
     Indication: Insomnia
  577. CARBAMAZEPINE [Interacting]
     Active Substance: CARBAMAZEPINE
     Indication: Prophylaxis
     Dosage: UNKNOWN
  578. CARBAMAZEPINE [Interacting]
     Active Substance: CARBAMAZEPINE
     Indication: Fibromyalgia
     Dosage: UNKNOWN
  579. CARBAMAZEPINE [Interacting]
     Active Substance: CARBAMAZEPINE
     Indication: Prophylaxis
     Dosage: 200.0MG UNKNOWN
  580. CARBAMAZEPINE [Interacting]
     Active Substance: CARBAMAZEPINE
     Indication: Fibromyalgia
     Dosage: 200.0MG UNKNOWN
  581. CARBAMAZEPINE [Interacting]
     Active Substance: CARBAMAZEPINE
     Indication: Prophylaxis
     Dosage: UNKNOWN
  582. CARBAMAZEPINE [Interacting]
     Active Substance: CARBAMAZEPINE
     Indication: Fibromyalgia
     Dosage: UNKNOWN
  583. CARBAMAZEPINE [Interacting]
     Active Substance: CARBAMAZEPINE
     Indication: Prophylaxis
     Dosage: UNKNOWN
  584. CARBAMAZEPINE [Interacting]
     Active Substance: CARBAMAZEPINE
     Indication: Fibromyalgia
     Dosage: UNKNOWN
  585. CARBAMAZEPINE [Interacting]
     Active Substance: CARBAMAZEPINE
     Indication: Prophylaxis
     Dosage: UNKNOWN
  586. CARBAMAZEPINE [Interacting]
     Active Substance: CARBAMAZEPINE
     Indication: Fibromyalgia
     Dosage: UNKNOWN
  587. CARBAMAZEPINE [Interacting]
     Active Substance: CARBAMAZEPINE
     Indication: Prophylaxis
     Dosage: UNKNOWN
  588. CARBAMAZEPINE [Interacting]
     Active Substance: CARBAMAZEPINE
     Indication: Fibromyalgia
     Dosage: UNKNOWN
  589. CARBAMAZEPINE [Interacting]
     Active Substance: CARBAMAZEPINE
     Indication: Prophylaxis
     Dosage: UNKNOWN
  590. CARBAMAZEPINE [Interacting]
     Active Substance: CARBAMAZEPINE
     Indication: Fibromyalgia
     Dosage: UNKNOWN
  591. CARBAMAZEPINE [Interacting]
     Active Substance: CARBAMAZEPINE
     Indication: Prophylaxis
     Dosage: UNKNOWN
  592. CARBAMAZEPINE [Interacting]
     Active Substance: CARBAMAZEPINE
     Indication: Fibromyalgia
     Dosage: UNKNOWN
  593. CARBAMAZEPINE [Interacting]
     Active Substance: CARBAMAZEPINE
     Indication: Prophylaxis
     Dosage: UNKNOWN
  594. CARBAMAZEPINE [Interacting]
     Active Substance: CARBAMAZEPINE
     Indication: Fibromyalgia
     Dosage: UNKNOWN
  595. CARBAMAZEPINE [Interacting]
     Active Substance: CARBAMAZEPINE
     Indication: Prophylaxis
     Dosage: 200.0MG UNKNOWN
  596. CARBAMAZEPINE [Interacting]
     Active Substance: CARBAMAZEPINE
     Indication: Fibromyalgia
     Dosage: 200.0MG UNKNOWN
  597. CARBAMAZEPINE [Interacting]
     Active Substance: CARBAMAZEPINE
     Indication: Prophylaxis
     Dosage: 200.0MG UNKNOWN
  598. CARBAMAZEPINE [Interacting]
     Active Substance: CARBAMAZEPINE
     Indication: Fibromyalgia
     Dosage: 200.0MG UNKNOWN
  599. CARBAMAZEPINE [Interacting]
     Active Substance: CARBAMAZEPINE
     Indication: Prophylaxis
     Dosage: 200.0MG UNKNOWN
  600. CARBAMAZEPINE [Interacting]
     Active Substance: CARBAMAZEPINE
     Indication: Fibromyalgia
     Dosage: 200.0MG UNKNOWN
  601. CARBAMAZEPINE [Interacting]
     Active Substance: CARBAMAZEPINE
     Indication: Prophylaxis
     Dosage: 200.0MG UNKNOWN
  602. CARBAMAZEPINE [Interacting]
     Active Substance: CARBAMAZEPINE
     Indication: Fibromyalgia
     Dosage: 200.0MG UNKNOWN
  603. CARBAMAZEPINE [Interacting]
     Active Substance: CARBAMAZEPINE
     Indication: Prophylaxis
     Dosage: 200.0MG UNKNOWN
  604. CARBAMAZEPINE [Interacting]
     Active Substance: CARBAMAZEPINE
     Indication: Fibromyalgia
     Dosage: 200.0MG UNKNOWN
  605. CARBAMAZEPINE [Interacting]
     Active Substance: CARBAMAZEPINE
     Indication: Prophylaxis
     Dosage: 200.0MG UNKNOWN
  606. CARBAMAZEPINE [Interacting]
     Active Substance: CARBAMAZEPINE
     Indication: Fibromyalgia
     Dosage: 200.0MG UNKNOWN
  607. CYCLOBENZAPRINE [Interacting]
     Active Substance: CYCLOBENZAPRINE
     Indication: Fibromyalgia
  608. CYCLOBENZAPRINE [Interacting]
     Active Substance: CYCLOBENZAPRINE
     Indication: Fibromyalgia
  609. CYCLOBENZAPRINE [Interacting]
     Active Substance: CYCLOBENZAPRINE
     Indication: Fibromyalgia
  610. CYCLOBENZAPRINE [Interacting]
     Active Substance: CYCLOBENZAPRINE
     Indication: Fibromyalgia
  611. CYCLOBENZAPRINE [Interacting]
     Active Substance: CYCLOBENZAPRINE
     Indication: Fibromyalgia
  612. CYCLOBENZAPRINE [Interacting]
     Active Substance: CYCLOBENZAPRINE
     Indication: Fibromyalgia
  613. CYCLOBENZAPRINE [Interacting]
     Active Substance: CYCLOBENZAPRINE
     Indication: Fibromyalgia
  614. DILTIAZEM HYDROCHLORIDE [Interacting]
     Active Substance: DILTIAZEM HYDROCHLORIDE
     Indication: Hypertension
  615. DILTIAZEM HYDROCHLORIDE [Interacting]
     Active Substance: DILTIAZEM HYDROCHLORIDE
     Indication: Coronary artery disease
  616. DILTIAZEM HYDROCHLORIDE [Interacting]
     Active Substance: DILTIAZEM HYDROCHLORIDE
     Indication: Angina pectoris
  617. DILTIAZEM HYDROCHLORIDE [Interacting]
     Active Substance: DILTIAZEM HYDROCHLORIDE
     Indication: Hypertension
     Dosage: UNKNOWN
  618. DILTIAZEM HYDROCHLORIDE [Interacting]
     Active Substance: DILTIAZEM HYDROCHLORIDE
     Indication: Coronary artery disease
     Dosage: UNKNOWN
  619. DILTIAZEM HYDROCHLORIDE [Interacting]
     Active Substance: DILTIAZEM HYDROCHLORIDE
     Indication: Angina pectoris
     Dosage: UNKNOWN
  620. DILTIAZEM HYDROCHLORIDE [Interacting]
     Active Substance: DILTIAZEM HYDROCHLORIDE
     Indication: Hypertension
     Dosage: UNKNOWN
  621. DILTIAZEM HYDROCHLORIDE [Interacting]
     Active Substance: DILTIAZEM HYDROCHLORIDE
     Indication: Coronary artery disease
     Dosage: UNKNOWN
  622. DILTIAZEM HYDROCHLORIDE [Interacting]
     Active Substance: DILTIAZEM HYDROCHLORIDE
     Indication: Angina pectoris
     Dosage: UNKNOWN
  623. DILTIAZEM HYDROCHLORIDE [Interacting]
     Active Substance: DILTIAZEM HYDROCHLORIDE
     Indication: Hypertension
     Dosage: 360.0MG UNKNOWN
  624. DILTIAZEM HYDROCHLORIDE [Interacting]
     Active Substance: DILTIAZEM HYDROCHLORIDE
     Indication: Coronary artery disease
     Dosage: 360.0MG UNKNOWN
  625. DILTIAZEM HYDROCHLORIDE [Interacting]
     Active Substance: DILTIAZEM HYDROCHLORIDE
     Indication: Angina pectoris
     Dosage: 360.0MG UNKNOWN
  626. DILTIAZEM HYDROCHLORIDE [Interacting]
     Active Substance: DILTIAZEM HYDROCHLORIDE
     Indication: Hypertension
     Dosage: 360.0MG UNKNOWN
  627. DILTIAZEM HYDROCHLORIDE [Interacting]
     Active Substance: DILTIAZEM HYDROCHLORIDE
     Indication: Coronary artery disease
     Dosage: 360.0MG UNKNOWN
  628. DILTIAZEM HYDROCHLORIDE [Interacting]
     Active Substance: DILTIAZEM HYDROCHLORIDE
     Indication: Angina pectoris
     Dosage: 360.0MG UNKNOWN
  629. DILTIAZEM HYDROCHLORIDE [Interacting]
     Active Substance: DILTIAZEM HYDROCHLORIDE
     Indication: Hypertension
     Dosage: 360.0MG UNKNOWN
  630. DILTIAZEM HYDROCHLORIDE [Interacting]
     Active Substance: DILTIAZEM HYDROCHLORIDE
     Indication: Coronary artery disease
     Dosage: 360.0MG UNKNOWN
  631. DILTIAZEM HYDROCHLORIDE [Interacting]
     Active Substance: DILTIAZEM HYDROCHLORIDE
     Indication: Angina pectoris
     Dosage: 360.0MG UNKNOWN
  632. DILTIAZEM HYDROCHLORIDE [Interacting]
     Active Substance: DILTIAZEM HYDROCHLORIDE
     Indication: Hypertension
     Dosage: 360.0MG UNKNOWN
  633. DILTIAZEM HYDROCHLORIDE [Interacting]
     Active Substance: DILTIAZEM HYDROCHLORIDE
     Indication: Coronary artery disease
     Dosage: 360.0MG UNKNOWN
  634. DILTIAZEM HYDROCHLORIDE [Interacting]
     Active Substance: DILTIAZEM HYDROCHLORIDE
     Indication: Angina pectoris
     Dosage: 360.0MG UNKNOWN
  635. DILTIAZEM HYDROCHLORIDE [Interacting]
     Active Substance: DILTIAZEM HYDROCHLORIDE
     Indication: Hypertension
     Dosage: 360.0MG UNKNOWN
  636. DILTIAZEM HYDROCHLORIDE [Interacting]
     Active Substance: DILTIAZEM HYDROCHLORIDE
     Indication: Coronary artery disease
     Dosage: 360.0MG UNKNOWN
  637. DILTIAZEM HYDROCHLORIDE [Interacting]
     Active Substance: DILTIAZEM HYDROCHLORIDE
     Indication: Angina pectoris
     Dosage: 360.0MG UNKNOWN
  638. DILTIAZEM HYDROCHLORIDE [Interacting]
     Active Substance: DILTIAZEM HYDROCHLORIDE
     Indication: Hypertension
     Dosage: 360.0MG UNKNOWN
  639. DILTIAZEM HYDROCHLORIDE [Interacting]
     Active Substance: DILTIAZEM HYDROCHLORIDE
     Indication: Coronary artery disease
     Dosage: 360.0MG UNKNOWN
  640. DILTIAZEM HYDROCHLORIDE [Interacting]
     Active Substance: DILTIAZEM HYDROCHLORIDE
     Indication: Angina pectoris
     Dosage: 360.0MG UNKNOWN
  641. DILTIAZEM HYDROCHLORIDE [Interacting]
     Active Substance: DILTIAZEM HYDROCHLORIDE
     Indication: Hypertension
     Dosage: 360.0MG UNKNOWN
  642. DILTIAZEM HYDROCHLORIDE [Interacting]
     Active Substance: DILTIAZEM HYDROCHLORIDE
     Indication: Coronary artery disease
     Dosage: 360.0MG UNKNOWN
  643. DILTIAZEM HYDROCHLORIDE [Interacting]
     Active Substance: DILTIAZEM HYDROCHLORIDE
     Indication: Angina pectoris
     Dosage: 360.0MG UNKNOWN
  644. DILTIAZEM HYDROCHLORIDE [Interacting]
     Active Substance: DILTIAZEM HYDROCHLORIDE
     Indication: Hypertension
     Dosage: 360.0MG UNKNOWN
  645. DILTIAZEM HYDROCHLORIDE [Interacting]
     Active Substance: DILTIAZEM HYDROCHLORIDE
     Indication: Coronary artery disease
     Dosage: 360.0MG UNKNOWN
  646. DILTIAZEM HYDROCHLORIDE [Interacting]
     Active Substance: DILTIAZEM HYDROCHLORIDE
     Indication: Angina pectoris
     Dosage: 360.0MG UNKNOWN
  647. DILTIAZEM HYDROCHLORIDE [Interacting]
     Active Substance: DILTIAZEM HYDROCHLORIDE
     Indication: Hypertension
     Dosage: 360.0MG UNKNOWN
  648. DILTIAZEM HYDROCHLORIDE [Interacting]
     Active Substance: DILTIAZEM HYDROCHLORIDE
     Indication: Coronary artery disease
     Dosage: 360.0MG UNKNOWN
  649. DILTIAZEM HYDROCHLORIDE [Interacting]
     Active Substance: DILTIAZEM HYDROCHLORIDE
     Indication: Angina pectoris
     Dosage: 360.0MG UNKNOWN
  650. DILTIAZEM HYDROCHLORIDE [Interacting]
     Active Substance: DILTIAZEM HYDROCHLORIDE
     Indication: Hypertension
     Dosage: 360.0MG UNKNOWN
  651. DILTIAZEM HYDROCHLORIDE [Interacting]
     Active Substance: DILTIAZEM HYDROCHLORIDE
     Indication: Coronary artery disease
     Dosage: 360.0MG UNKNOWN
  652. DILTIAZEM HYDROCHLORIDE [Interacting]
     Active Substance: DILTIAZEM HYDROCHLORIDE
     Indication: Angina pectoris
     Dosage: 360.0MG UNKNOWN
  653. DILTIAZEM HYDROCHLORIDE [Interacting]
     Active Substance: DILTIAZEM HYDROCHLORIDE
     Indication: Hypertension
     Dosage: UNKNOWN
  654. DILTIAZEM HYDROCHLORIDE [Interacting]
     Active Substance: DILTIAZEM HYDROCHLORIDE
     Indication: Coronary artery disease
     Dosage: UNKNOWN
  655. DILTIAZEM HYDROCHLORIDE [Interacting]
     Active Substance: DILTIAZEM HYDROCHLORIDE
     Indication: Angina pectoris
     Dosage: UNKNOWN
  656. DILTIAZEM HYDROCHLORIDE [Interacting]
     Active Substance: DILTIAZEM HYDROCHLORIDE
     Indication: Hypertension
     Dosage: UNKNOWN
  657. DILTIAZEM HYDROCHLORIDE [Interacting]
     Active Substance: DILTIAZEM HYDROCHLORIDE
     Indication: Coronary artery disease
     Dosage: UNKNOWN
  658. DILTIAZEM HYDROCHLORIDE [Interacting]
     Active Substance: DILTIAZEM HYDROCHLORIDE
     Indication: Angina pectoris
     Dosage: UNKNOWN
  659. DILTIAZEM HYDROCHLORIDE [Interacting]
     Active Substance: DILTIAZEM HYDROCHLORIDE
     Indication: Hypertension
     Dosage: UNKNOWN
  660. DILTIAZEM HYDROCHLORIDE [Interacting]
     Active Substance: DILTIAZEM HYDROCHLORIDE
     Indication: Coronary artery disease
     Dosage: UNKNOWN
  661. DILTIAZEM HYDROCHLORIDE [Interacting]
     Active Substance: DILTIAZEM HYDROCHLORIDE
     Indication: Angina pectoris
     Dosage: UNKNOWN
  662. DILTIAZEM HYDROCHLORIDE [Interacting]
     Active Substance: DILTIAZEM HYDROCHLORIDE
     Indication: Hypertension
     Dosage: UNKNOWN
  663. DILTIAZEM HYDROCHLORIDE [Interacting]
     Active Substance: DILTIAZEM HYDROCHLORIDE
     Indication: Coronary artery disease
     Dosage: UNKNOWN
  664. DILTIAZEM HYDROCHLORIDE [Interacting]
     Active Substance: DILTIAZEM HYDROCHLORIDE
     Indication: Angina pectoris
     Dosage: UNKNOWN
  665. DILTIAZEM HYDROCHLORIDE [Interacting]
     Active Substance: DILTIAZEM HYDROCHLORIDE
     Indication: Hypertension
     Dosage: UNKNOWN
  666. DILTIAZEM HYDROCHLORIDE [Interacting]
     Active Substance: DILTIAZEM HYDROCHLORIDE
     Indication: Coronary artery disease
     Dosage: UNKNOWN
  667. DILTIAZEM HYDROCHLORIDE [Interacting]
     Active Substance: DILTIAZEM HYDROCHLORIDE
     Indication: Angina pectoris
     Dosage: UNKNOWN
  668. DILTIAZEM HYDROCHLORIDE [Interacting]
     Active Substance: DILTIAZEM HYDROCHLORIDE
     Indication: Hypertension
     Dosage: UNKNOWN
  669. DILTIAZEM HYDROCHLORIDE [Interacting]
     Active Substance: DILTIAZEM HYDROCHLORIDE
     Indication: Coronary artery disease
     Dosage: UNKNOWN
  670. DILTIAZEM HYDROCHLORIDE [Interacting]
     Active Substance: DILTIAZEM HYDROCHLORIDE
     Indication: Angina pectoris
     Dosage: UNKNOWN
  671. DILTIAZEM HYDROCHLORIDE [Interacting]
     Active Substance: DILTIAZEM HYDROCHLORIDE
     Indication: Hypertension
     Dosage: UNKNOWN
  672. DILTIAZEM HYDROCHLORIDE [Interacting]
     Active Substance: DILTIAZEM HYDROCHLORIDE
     Indication: Coronary artery disease
     Dosage: UNKNOWN
  673. DILTIAZEM HYDROCHLORIDE [Interacting]
     Active Substance: DILTIAZEM HYDROCHLORIDE
     Indication: Angina pectoris
     Dosage: UNKNOWN
  674. DILTIAZEM HYDROCHLORIDE [Interacting]
     Active Substance: DILTIAZEM HYDROCHLORIDE
     Indication: Hypertension
     Dosage: UNKNOWN
  675. DILTIAZEM HYDROCHLORIDE [Interacting]
     Active Substance: DILTIAZEM HYDROCHLORIDE
     Indication: Coronary artery disease
     Dosage: UNKNOWN
  676. DILTIAZEM HYDROCHLORIDE [Interacting]
     Active Substance: DILTIAZEM HYDROCHLORIDE
     Indication: Angina pectoris
     Dosage: UNKNOWN
  677. DILTIAZEM HYDROCHLORIDE [Interacting]
     Active Substance: DILTIAZEM HYDROCHLORIDE
     Indication: Hypertension
     Dosage: UNKNOWN
  678. DILTIAZEM HYDROCHLORIDE [Interacting]
     Active Substance: DILTIAZEM HYDROCHLORIDE
     Indication: Coronary artery disease
     Dosage: UNKNOWN
  679. DILTIAZEM HYDROCHLORIDE [Interacting]
     Active Substance: DILTIAZEM HYDROCHLORIDE
     Indication: Angina pectoris
     Dosage: UNKNOWN
  680. DILTIAZEM HYDROCHLORIDE [Interacting]
     Active Substance: DILTIAZEM HYDROCHLORIDE
     Indication: Hypertension
     Dosage: UNKNOWN
  681. DILTIAZEM HYDROCHLORIDE [Interacting]
     Active Substance: DILTIAZEM HYDROCHLORIDE
     Indication: Coronary artery disease
     Dosage: UNKNOWN
  682. DILTIAZEM HYDROCHLORIDE [Interacting]
     Active Substance: DILTIAZEM HYDROCHLORIDE
     Indication: Angina pectoris
     Dosage: UNKNOWN
  683. DILTIAZEM HYDROCHLORIDE [Interacting]
     Active Substance: DILTIAZEM HYDROCHLORIDE
     Indication: Hypertension
     Dosage: UNKNOWN
  684. DILTIAZEM HYDROCHLORIDE [Interacting]
     Active Substance: DILTIAZEM HYDROCHLORIDE
     Indication: Coronary artery disease
     Dosage: UNKNOWN
  685. DILTIAZEM HYDROCHLORIDE [Interacting]
     Active Substance: DILTIAZEM HYDROCHLORIDE
     Indication: Angina pectoris
     Dosage: UNKNOWN
  686. OXAZEPAM [Interacting]
     Active Substance: OXAZEPAM
     Indication: Insomnia
  687. OXAZEPAM [Interacting]
     Active Substance: OXAZEPAM
     Indication: Hypertension
  688. OXAZEPAM [Interacting]
     Active Substance: OXAZEPAM
     Indication: Coronary artery disease
  689. OXAZEPAM [Interacting]
     Active Substance: OXAZEPAM
     Indication: Duodenal ulcer
  690. OXAZEPAM [Interacting]
     Active Substance: OXAZEPAM
     Indication: Angina pectoris
  691. OXAZEPAM [Interacting]
     Active Substance: OXAZEPAM
     Indication: Insomnia
     Dosage: 40 MG, QD
  692. OXAZEPAM [Interacting]
     Active Substance: OXAZEPAM
     Indication: Hypertension
     Dosage: 40 MG, QD
  693. OXAZEPAM [Interacting]
     Active Substance: OXAZEPAM
     Indication: Coronary artery disease
     Dosage: 40 MG, QD
  694. OXAZEPAM [Interacting]
     Active Substance: OXAZEPAM
     Indication: Duodenal ulcer
     Dosage: 40 MG, QD
  695. OXAZEPAM [Interacting]
     Active Substance: OXAZEPAM
     Indication: Angina pectoris
     Dosage: 40 MG, QD
  696. OXAZEPAM [Interacting]
     Active Substance: OXAZEPAM
     Indication: Insomnia
  697. OXAZEPAM [Interacting]
     Active Substance: OXAZEPAM
     Indication: Hypertension
  698. OXAZEPAM [Interacting]
     Active Substance: OXAZEPAM
     Indication: Coronary artery disease
  699. OXAZEPAM [Interacting]
     Active Substance: OXAZEPAM
     Indication: Duodenal ulcer
  700. OXAZEPAM [Interacting]
     Active Substance: OXAZEPAM
     Indication: Angina pectoris
  701. OXAZEPAM [Interacting]
     Active Substance: OXAZEPAM
     Indication: Insomnia
  702. OXAZEPAM [Interacting]
     Active Substance: OXAZEPAM
     Indication: Hypertension
  703. OXAZEPAM [Interacting]
     Active Substance: OXAZEPAM
     Indication: Coronary artery disease
  704. OXAZEPAM [Interacting]
     Active Substance: OXAZEPAM
     Indication: Duodenal ulcer
  705. OXAZEPAM [Interacting]
     Active Substance: OXAZEPAM
     Indication: Angina pectoris
  706. OXAZEPAM [Interacting]
     Active Substance: OXAZEPAM
     Indication: Insomnia
  707. OXAZEPAM [Interacting]
     Active Substance: OXAZEPAM
     Indication: Hypertension
  708. OXAZEPAM [Interacting]
     Active Substance: OXAZEPAM
     Indication: Coronary artery disease
  709. OXAZEPAM [Interacting]
     Active Substance: OXAZEPAM
     Indication: Duodenal ulcer
  710. OXAZEPAM [Interacting]
     Active Substance: OXAZEPAM
     Indication: Angina pectoris
  711. OXAZEPAM [Interacting]
     Active Substance: OXAZEPAM
     Indication: Insomnia
  712. OXAZEPAM [Interacting]
     Active Substance: OXAZEPAM
     Indication: Hypertension
  713. OXAZEPAM [Interacting]
     Active Substance: OXAZEPAM
     Indication: Coronary artery disease
  714. OXAZEPAM [Interacting]
     Active Substance: OXAZEPAM
     Indication: Duodenal ulcer
  715. OXAZEPAM [Interacting]
     Active Substance: OXAZEPAM
     Indication: Angina pectoris
  716. FUROSEMIDE SODIUM [Interacting]
     Active Substance: FUROSEMIDE SODIUM
     Indication: Oedema
  717. FUROSEMIDE SODIUM [Interacting]
     Active Substance: FUROSEMIDE SODIUM
     Indication: Oedema
  718. FUROSEMIDE SODIUM [Interacting]
     Active Substance: FUROSEMIDE SODIUM
     Indication: Oedema
  719. FUROSEMIDE SODIUM [Interacting]
     Active Substance: FUROSEMIDE SODIUM
     Indication: Oedema
  720. FUROSEMIDE SODIUM [Interacting]
     Active Substance: FUROSEMIDE SODIUM
     Indication: Oedema
  721. FUROSEMIDE SODIUM [Interacting]
     Active Substance: FUROSEMIDE SODIUM
     Indication: Oedema
  722. FUROSEMIDE SODIUM [Interacting]
     Active Substance: FUROSEMIDE SODIUM
     Indication: Oedema
  723. BISACODYL [Interacting]
     Active Substance: BISACODYL
     Indication: Constipation
     Dosage: 2.0DF AS REQUIRED
  724. BISACODYL [Interacting]
     Active Substance: BISACODYL
     Indication: Constipation
     Dosage: 1.0DF AS REQUIRED
  725. BISACODYL [Interacting]
     Active Substance: BISACODYL
     Indication: Constipation
     Dosage: 2.0DF AS REQUIRED
  726. BISACODYL [Interacting]
     Active Substance: BISACODYL
     Indication: Constipation
     Dosage: 2.0DF AS REQUIRED
  727. BISACODYL [Interacting]
     Active Substance: BISACODYL
     Indication: Constipation
     Dosage: 2.0DF AS REQUIRED
  728. BISACODYL [Interacting]
     Active Substance: BISACODYL
     Indication: Constipation
     Dosage: 2.0DF AS REQUIRED
  729. CARBAMAZEPINE [Interacting]
     Active Substance: CARBAMAZEPINE
     Indication: Seizure prophylaxis
  730. CARBAMAZEPINE [Interacting]
     Active Substance: CARBAMAZEPINE
     Indication: Seizure
  731. CARBAMAZEPINE [Interacting]
     Active Substance: CARBAMAZEPINE
     Indication: Product used for unknown indication
  732. CARBAMAZEPINE [Interacting]
     Active Substance: CARBAMAZEPINE
     Indication: Fibromyalgia
  733. CARBAMAZEPINE [Interacting]
     Active Substance: CARBAMAZEPINE
     Indication: Seizure prophylaxis
  734. CARBAMAZEPINE [Interacting]
     Active Substance: CARBAMAZEPINE
     Indication: Seizure
  735. CARBAMAZEPINE [Interacting]
     Active Substance: CARBAMAZEPINE
     Indication: Product used for unknown indication
  736. CARBAMAZEPINE [Interacting]
     Active Substance: CARBAMAZEPINE
     Indication: Fibromyalgia
  737. CARBAMAZEPINE [Interacting]
     Active Substance: CARBAMAZEPINE
     Indication: Seizure prophylaxis
  738. CARBAMAZEPINE [Interacting]
     Active Substance: CARBAMAZEPINE
     Indication: Seizure
  739. CARBAMAZEPINE [Interacting]
     Active Substance: CARBAMAZEPINE
     Indication: Product used for unknown indication
  740. CARBAMAZEPINE [Interacting]
     Active Substance: CARBAMAZEPINE
     Indication: Fibromyalgia
  741. CARBAMAZEPINE [Interacting]
     Active Substance: CARBAMAZEPINE
     Indication: Seizure prophylaxis
     Dosage: UNK, 1 EVERY 12 HOURS
  742. CARBAMAZEPINE [Interacting]
     Active Substance: CARBAMAZEPINE
     Indication: Seizure
     Dosage: UNK, 1 EVERY 12 HOURS
  743. CARBAMAZEPINE [Interacting]
     Active Substance: CARBAMAZEPINE
     Indication: Product used for unknown indication
     Dosage: UNK, 1 EVERY 12 HOURS
  744. CARBAMAZEPINE [Interacting]
     Active Substance: CARBAMAZEPINE
     Indication: Fibromyalgia
     Dosage: UNK, 1 EVERY 12 HOURS
  745. CARBAMAZEPINE [Interacting]
     Active Substance: CARBAMAZEPINE
     Indication: Seizure prophylaxis
     Dosage: 400 MG, BID
  746. CARBAMAZEPINE [Interacting]
     Active Substance: CARBAMAZEPINE
     Indication: Seizure
     Dosage: 400 MG, BID
  747. CARBAMAZEPINE [Interacting]
     Active Substance: CARBAMAZEPINE
     Indication: Product used for unknown indication
     Dosage: 400 MG, BID
  748. CARBAMAZEPINE [Interacting]
     Active Substance: CARBAMAZEPINE
     Indication: Fibromyalgia
     Dosage: 400 MG, BID
  749. CARBAMAZEPINE [Interacting]
     Active Substance: CARBAMAZEPINE
     Indication: Seizure prophylaxis
     Dosage: 200 MG
  750. CARBAMAZEPINE [Interacting]
     Active Substance: CARBAMAZEPINE
     Indication: Seizure
     Dosage: 200 MG
  751. CARBAMAZEPINE [Interacting]
     Active Substance: CARBAMAZEPINE
     Indication: Product used for unknown indication
     Dosage: 200 MG
  752. CARBAMAZEPINE [Interacting]
     Active Substance: CARBAMAZEPINE
     Indication: Fibromyalgia
     Dosage: 200 MG
  753. CARBAMAZEPINE [Interacting]
     Active Substance: CARBAMAZEPINE
     Indication: Seizure prophylaxis
     Dosage: 200 MG, 1 EVERY 5 DAY
  754. CARBAMAZEPINE [Interacting]
     Active Substance: CARBAMAZEPINE
     Indication: Seizure
     Dosage: 200 MG, 1 EVERY 5 DAY
  755. CARBAMAZEPINE [Interacting]
     Active Substance: CARBAMAZEPINE
     Indication: Product used for unknown indication
     Dosage: 200 MG, 1 EVERY 5 DAY
  756. CARBAMAZEPINE [Interacting]
     Active Substance: CARBAMAZEPINE
     Indication: Fibromyalgia
     Dosage: 200 MG, 1 EVERY 5 DAY
  757. CARBAMAZEPINE [Interacting]
     Active Substance: CARBAMAZEPINE
     Indication: Seizure prophylaxis
     Dosage: 500 MG, QD, 1 EVERY 1 DAY
  758. CARBAMAZEPINE [Interacting]
     Active Substance: CARBAMAZEPINE
     Indication: Seizure
     Dosage: 500 MG, QD, 1 EVERY 1 DAY
  759. CARBAMAZEPINE [Interacting]
     Active Substance: CARBAMAZEPINE
     Indication: Product used for unknown indication
     Dosage: 500 MG, QD, 1 EVERY 1 DAY
  760. CARBAMAZEPINE [Interacting]
     Active Substance: CARBAMAZEPINE
     Indication: Fibromyalgia
     Dosage: 500 MG, QD, 1 EVERY 1 DAY
  761. CARBAMAZEPINE [Interacting]
     Active Substance: CARBAMAZEPINE
     Indication: Seizure prophylaxis
     Dosage: 100 MG, QD, 1 EVERY 1 DAY
  762. CARBAMAZEPINE [Interacting]
     Active Substance: CARBAMAZEPINE
     Indication: Seizure
     Dosage: 100 MG, QD, 1 EVERY 1 DAY
  763. CARBAMAZEPINE [Interacting]
     Active Substance: CARBAMAZEPINE
     Indication: Product used for unknown indication
     Dosage: 100 MG, QD, 1 EVERY 1 DAY
  764. CARBAMAZEPINE [Interacting]
     Active Substance: CARBAMAZEPINE
     Indication: Fibromyalgia
     Dosage: 100 MG, QD, 1 EVERY 1 DAY
  765. CARBAMAZEPINE [Interacting]
     Active Substance: CARBAMAZEPINE
     Indication: Seizure prophylaxis
     Dosage: 10 MG
  766. CARBAMAZEPINE [Interacting]
     Active Substance: CARBAMAZEPINE
     Indication: Seizure
     Dosage: 10 MG
  767. CARBAMAZEPINE [Interacting]
     Active Substance: CARBAMAZEPINE
     Indication: Product used for unknown indication
     Dosage: 10 MG
  768. CARBAMAZEPINE [Interacting]
     Active Substance: CARBAMAZEPINE
     Indication: Fibromyalgia
     Dosage: 10 MG
  769. CARBAMAZEPINE [Interacting]
     Active Substance: CARBAMAZEPINE
     Indication: Seizure prophylaxis
     Dosage: 200 MG, Z (1 EVERY 2 DAYS)
  770. CARBAMAZEPINE [Interacting]
     Active Substance: CARBAMAZEPINE
     Indication: Seizure
     Dosage: 200 MG, Z (1 EVERY 2 DAYS)
  771. CARBAMAZEPINE [Interacting]
     Active Substance: CARBAMAZEPINE
     Indication: Product used for unknown indication
     Dosage: 200 MG, Z (1 EVERY 2 DAYS)
  772. CARBAMAZEPINE [Interacting]
     Active Substance: CARBAMAZEPINE
     Indication: Fibromyalgia
     Dosage: 200 MG, Z (1 EVERY 2 DAYS)
  773. CARBAMAZEPINE [Interacting]
     Active Substance: CARBAMAZEPINE
     Indication: Seizure prophylaxis
     Dosage: 200 MG, QD
  774. CARBAMAZEPINE [Interacting]
     Active Substance: CARBAMAZEPINE
     Indication: Seizure
     Dosage: 200 MG, QD
  775. CARBAMAZEPINE [Interacting]
     Active Substance: CARBAMAZEPINE
     Indication: Product used for unknown indication
     Dosage: 200 MG, QD
  776. CARBAMAZEPINE [Interacting]
     Active Substance: CARBAMAZEPINE
     Indication: Fibromyalgia
     Dosage: 200 MG, QD
  777. CARBAMAZEPINE [Interacting]
     Active Substance: CARBAMAZEPINE
     Indication: Seizure prophylaxis
     Dosage: 400 MG, BID
  778. CARBAMAZEPINE [Interacting]
     Active Substance: CARBAMAZEPINE
     Indication: Seizure
     Dosage: 400 MG, BID
  779. CARBAMAZEPINE [Interacting]
     Active Substance: CARBAMAZEPINE
     Indication: Product used for unknown indication
     Dosage: 400 MG, BID
  780. CARBAMAZEPINE [Interacting]
     Active Substance: CARBAMAZEPINE
     Indication: Fibromyalgia
     Dosage: 400 MG, BID
  781. CARBAMAZEPINE [Interacting]
     Active Substance: CARBAMAZEPINE
     Indication: Seizure prophylaxis
     Dosage: 2 DF, BID
  782. CARBAMAZEPINE [Interacting]
     Active Substance: CARBAMAZEPINE
     Indication: Seizure
     Dosage: 2 DF, BID
  783. CARBAMAZEPINE [Interacting]
     Active Substance: CARBAMAZEPINE
     Indication: Product used for unknown indication
     Dosage: 2 DF, BID
  784. CARBAMAZEPINE [Interacting]
     Active Substance: CARBAMAZEPINE
     Indication: Fibromyalgia
     Dosage: 2 DF, BID
  785. CARBAMAZEPINE [Interacting]
     Active Substance: CARBAMAZEPINE
     Indication: Seizure prophylaxis
     Dosage: 200 MG, QD
  786. CARBAMAZEPINE [Interacting]
     Active Substance: CARBAMAZEPINE
     Indication: Seizure
     Dosage: 200 MG, QD
  787. CARBAMAZEPINE [Interacting]
     Active Substance: CARBAMAZEPINE
     Indication: Product used for unknown indication
     Dosage: 200 MG, QD
  788. CARBAMAZEPINE [Interacting]
     Active Substance: CARBAMAZEPINE
     Indication: Fibromyalgia
     Dosage: 200 MG, QD
  789. CARBAMAZEPINE [Interacting]
     Active Substance: CARBAMAZEPINE
     Indication: Seizure prophylaxis
     Dosage: 200 MG, QD
  790. CARBAMAZEPINE [Interacting]
     Active Substance: CARBAMAZEPINE
     Indication: Seizure
     Dosage: 200 MG, QD
  791. CARBAMAZEPINE [Interacting]
     Active Substance: CARBAMAZEPINE
     Indication: Product used for unknown indication
     Dosage: 200 MG, QD
  792. CARBAMAZEPINE [Interacting]
     Active Substance: CARBAMAZEPINE
     Indication: Fibromyalgia
     Dosage: 200 MG, QD
  793. CARBAMAZEPINE [Interacting]
     Active Substance: CARBAMAZEPINE
     Indication: Seizure prophylaxis
     Dosage: 200 MG, QD
  794. CARBAMAZEPINE [Interacting]
     Active Substance: CARBAMAZEPINE
     Indication: Seizure
     Dosage: 200 MG, QD
  795. CARBAMAZEPINE [Interacting]
     Active Substance: CARBAMAZEPINE
     Indication: Product used for unknown indication
     Dosage: 200 MG, QD
  796. CARBAMAZEPINE [Interacting]
     Active Substance: CARBAMAZEPINE
     Indication: Fibromyalgia
     Dosage: 200 MG, QD
  797. CARBAMAZEPINE [Interacting]
     Active Substance: CARBAMAZEPINE
     Indication: Seizure prophylaxis
     Dosage: 200 MG, QD
  798. CARBAMAZEPINE [Interacting]
     Active Substance: CARBAMAZEPINE
     Indication: Seizure
     Dosage: 200 MG, QD
  799. CARBAMAZEPINE [Interacting]
     Active Substance: CARBAMAZEPINE
     Indication: Product used for unknown indication
     Dosage: 200 MG, QD
  800. CARBAMAZEPINE [Interacting]
     Active Substance: CARBAMAZEPINE
     Indication: Fibromyalgia
     Dosage: 200 MG, QD
  801. CARBAMAZEPINE [Interacting]
     Active Substance: CARBAMAZEPINE
     Indication: Seizure prophylaxis
     Dosage: 200 MG, QD
  802. CARBAMAZEPINE [Interacting]
     Active Substance: CARBAMAZEPINE
     Indication: Seizure
     Dosage: 200 MG, QD
  803. CARBAMAZEPINE [Interacting]
     Active Substance: CARBAMAZEPINE
     Indication: Product used for unknown indication
     Dosage: 200 MG, QD
  804. CARBAMAZEPINE [Interacting]
     Active Substance: CARBAMAZEPINE
     Indication: Fibromyalgia
     Dosage: 200 MG, QD
  805. CARBAMAZEPINE [Interacting]
     Active Substance: CARBAMAZEPINE
     Indication: Seizure prophylaxis
     Dosage: 200 MG, QD
  806. CARBAMAZEPINE [Interacting]
     Active Substance: CARBAMAZEPINE
     Indication: Seizure
     Dosage: 200 MG, QD
  807. CARBAMAZEPINE [Interacting]
     Active Substance: CARBAMAZEPINE
     Indication: Product used for unknown indication
     Dosage: 200 MG, QD
  808. CARBAMAZEPINE [Interacting]
     Active Substance: CARBAMAZEPINE
     Indication: Fibromyalgia
     Dosage: 200 MG, QD
  809. CARBAMAZEPINE [Interacting]
     Active Substance: CARBAMAZEPINE
     Indication: Seizure prophylaxis
     Dosage: 200 MG, QD
  810. CARBAMAZEPINE [Interacting]
     Active Substance: CARBAMAZEPINE
     Indication: Seizure
     Dosage: 200 MG, QD
  811. CARBAMAZEPINE [Interacting]
     Active Substance: CARBAMAZEPINE
     Indication: Product used for unknown indication
     Dosage: 200 MG, QD
  812. CARBAMAZEPINE [Interacting]
     Active Substance: CARBAMAZEPINE
     Indication: Fibromyalgia
     Dosage: 200 MG, QD
  813. CARBAMAZEPINE [Interacting]
     Active Substance: CARBAMAZEPINE
     Indication: Seizure prophylaxis
     Dosage: 100 MG, QD, 1 EVERY 1 DAY
  814. CARBAMAZEPINE [Interacting]
     Active Substance: CARBAMAZEPINE
     Indication: Seizure
     Dosage: 100 MG, QD, 1 EVERY 1 DAY
  815. CARBAMAZEPINE [Interacting]
     Active Substance: CARBAMAZEPINE
     Indication: Product used for unknown indication
     Dosage: 100 MG, QD, 1 EVERY 1 DAY
  816. CARBAMAZEPINE [Interacting]
     Active Substance: CARBAMAZEPINE
     Indication: Fibromyalgia
     Dosage: 100 MG, QD, 1 EVERY 1 DAY
  817. CARBAMAZEPINE [Interacting]
     Active Substance: CARBAMAZEPINE
     Indication: Seizure prophylaxis
     Dosage: 100 MG, QD, 1 EVERY 1 DAY
  818. CARBAMAZEPINE [Interacting]
     Active Substance: CARBAMAZEPINE
     Indication: Seizure
     Dosage: 100 MG, QD, 1 EVERY 1 DAY
  819. CARBAMAZEPINE [Interacting]
     Active Substance: CARBAMAZEPINE
     Indication: Product used for unknown indication
     Dosage: 100 MG, QD, 1 EVERY 1 DAY
  820. CARBAMAZEPINE [Interacting]
     Active Substance: CARBAMAZEPINE
     Indication: Fibromyalgia
     Dosage: 100 MG, QD, 1 EVERY 1 DAY
  821. CARBAMAZEPINE [Interacting]
     Active Substance: CARBAMAZEPINE
     Indication: Seizure prophylaxis
     Dosage: 100 MG, QD, 1 EVERY 1 DAY
  822. CARBAMAZEPINE [Interacting]
     Active Substance: CARBAMAZEPINE
     Indication: Seizure
     Dosage: 100 MG, QD, 1 EVERY 1 DAY
  823. CARBAMAZEPINE [Interacting]
     Active Substance: CARBAMAZEPINE
     Indication: Product used for unknown indication
     Dosage: 100 MG, QD, 1 EVERY 1 DAY
  824. CARBAMAZEPINE [Interacting]
     Active Substance: CARBAMAZEPINE
     Indication: Fibromyalgia
     Dosage: 100 MG, QD, 1 EVERY 1 DAY
  825. CARBAMAZEPINE [Interacting]
     Active Substance: CARBAMAZEPINE
     Indication: Seizure prophylaxis
     Dosage: 100 MG, QD, 1 EVERY 1 DAY
  826. CARBAMAZEPINE [Interacting]
     Active Substance: CARBAMAZEPINE
     Indication: Seizure
     Dosage: 100 MG, QD, 1 EVERY 1 DAY
  827. CARBAMAZEPINE [Interacting]
     Active Substance: CARBAMAZEPINE
     Indication: Product used for unknown indication
     Dosage: 100 MG, QD, 1 EVERY 1 DAY
  828. CARBAMAZEPINE [Interacting]
     Active Substance: CARBAMAZEPINE
     Indication: Fibromyalgia
     Dosage: 100 MG, QD, 1 EVERY 1 DAY
  829. CARBAMAZEPINE [Interacting]
     Active Substance: CARBAMAZEPINE
     Indication: Seizure prophylaxis
     Dosage: 100 MG, QD, 1 EVERY 1 DAY
  830. CARBAMAZEPINE [Interacting]
     Active Substance: CARBAMAZEPINE
     Indication: Seizure
     Dosage: 100 MG, QD, 1 EVERY 1 DAY
  831. CARBAMAZEPINE [Interacting]
     Active Substance: CARBAMAZEPINE
     Indication: Product used for unknown indication
     Dosage: 100 MG, QD, 1 EVERY 1 DAY
  832. CARBAMAZEPINE [Interacting]
     Active Substance: CARBAMAZEPINE
     Indication: Fibromyalgia
     Dosage: 100 MG, QD, 1 EVERY 1 DAY
  833. CARBAMAZEPINE [Interacting]
     Active Substance: CARBAMAZEPINE
     Indication: Seizure prophylaxis
     Dosage: 100 MG, QD, 1 EVERY 1 DAY
  834. CARBAMAZEPINE [Interacting]
     Active Substance: CARBAMAZEPINE
     Indication: Seizure
     Dosage: 100 MG, QD, 1 EVERY 1 DAY
  835. CARBAMAZEPINE [Interacting]
     Active Substance: CARBAMAZEPINE
     Indication: Product used for unknown indication
     Dosage: 100 MG, QD, 1 EVERY 1 DAY
  836. CARBAMAZEPINE [Interacting]
     Active Substance: CARBAMAZEPINE
     Indication: Fibromyalgia
     Dosage: 100 MG, QD, 1 EVERY 1 DAY
  837. CARBAMAZEPINE [Interacting]
     Active Substance: CARBAMAZEPINE
     Indication: Seizure prophylaxis
     Dosage: 100 MG, QD, 1 EVERY 1 DAY
  838. CARBAMAZEPINE [Interacting]
     Active Substance: CARBAMAZEPINE
     Indication: Seizure
     Dosage: 100 MG, QD, 1 EVERY 1 DAY
  839. CARBAMAZEPINE [Interacting]
     Active Substance: CARBAMAZEPINE
     Indication: Product used for unknown indication
     Dosage: 100 MG, QD, 1 EVERY 1 DAY
  840. CARBAMAZEPINE [Interacting]
     Active Substance: CARBAMAZEPINE
     Indication: Fibromyalgia
     Dosage: 100 MG, QD, 1 EVERY 1 DAY
  841. CARBAMAZEPINE [Interacting]
     Active Substance: CARBAMAZEPINE
     Indication: Seizure prophylaxis
     Dosage: 100 MG, QD, 1 EVERY 1 DAY
  842. CARBAMAZEPINE [Interacting]
     Active Substance: CARBAMAZEPINE
     Indication: Seizure
     Dosage: 100 MG, QD, 1 EVERY 1 DAY
  843. CARBAMAZEPINE [Interacting]
     Active Substance: CARBAMAZEPINE
     Indication: Product used for unknown indication
     Dosage: 100 MG, QD, 1 EVERY 1 DAY
  844. CARBAMAZEPINE [Interacting]
     Active Substance: CARBAMAZEPINE
     Indication: Fibromyalgia
     Dosage: 100 MG, QD, 1 EVERY 1 DAY
  845. CARBAMAZEPINE [Interacting]
     Active Substance: CARBAMAZEPINE
     Indication: Seizure prophylaxis
     Dosage: 100 MG, QD, 1 EVERY 1 DAY
  846. CARBAMAZEPINE [Interacting]
     Active Substance: CARBAMAZEPINE
     Indication: Seizure
     Dosage: 100 MG, QD, 1 EVERY 1 DAY
  847. CARBAMAZEPINE [Interacting]
     Active Substance: CARBAMAZEPINE
     Indication: Product used for unknown indication
     Dosage: 100 MG, QD, 1 EVERY 1 DAY
  848. CARBAMAZEPINE [Interacting]
     Active Substance: CARBAMAZEPINE
     Indication: Fibromyalgia
     Dosage: 100 MG, QD, 1 EVERY 1 DAY
  849. CARBAMAZEPINE [Interacting]
     Active Substance: CARBAMAZEPINE
     Indication: Seizure prophylaxis
     Dosage: 100 MG, QD, 1 EVERY 1 DAY
  850. CARBAMAZEPINE [Interacting]
     Active Substance: CARBAMAZEPINE
     Indication: Seizure
     Dosage: 100 MG, QD, 1 EVERY 1 DAY
  851. CARBAMAZEPINE [Interacting]
     Active Substance: CARBAMAZEPINE
     Indication: Product used for unknown indication
     Dosage: 100 MG, QD, 1 EVERY 1 DAY
  852. CARBAMAZEPINE [Interacting]
     Active Substance: CARBAMAZEPINE
     Indication: Fibromyalgia
     Dosage: 100 MG, QD, 1 EVERY 1 DAY
  853. CYCLOBENZAPRINE [Interacting]
     Active Substance: CYCLOBENZAPRINE
     Indication: Seizure prophylaxis
  854. CYCLOBENZAPRINE [Interacting]
     Active Substance: CYCLOBENZAPRINE
     Indication: Seizure
  855. CYCLOBENZAPRINE [Interacting]
     Active Substance: CYCLOBENZAPRINE
     Indication: Pain
  856. CYCLOBENZAPRINE [Interacting]
     Active Substance: CYCLOBENZAPRINE
     Indication: Fibromyalgia
  857. CYCLOBENZAPRINE [Interacting]
     Active Substance: CYCLOBENZAPRINE
     Indication: Seizure prophylaxis
  858. CYCLOBENZAPRINE [Interacting]
     Active Substance: CYCLOBENZAPRINE
     Indication: Seizure
  859. CYCLOBENZAPRINE [Interacting]
     Active Substance: CYCLOBENZAPRINE
     Indication: Pain
  860. CYCLOBENZAPRINE [Interacting]
     Active Substance: CYCLOBENZAPRINE
     Indication: Fibromyalgia
  861. CYCLOBENZAPRINE [Interacting]
     Active Substance: CYCLOBENZAPRINE
     Indication: Seizure prophylaxis
  862. CYCLOBENZAPRINE [Interacting]
     Active Substance: CYCLOBENZAPRINE
     Indication: Seizure
  863. CYCLOBENZAPRINE [Interacting]
     Active Substance: CYCLOBENZAPRINE
     Indication: Pain
  864. CYCLOBENZAPRINE [Interacting]
     Active Substance: CYCLOBENZAPRINE
     Indication: Fibromyalgia
  865. CYCLOBENZAPRINE [Interacting]
     Active Substance: CYCLOBENZAPRINE
     Indication: Seizure prophylaxis
  866. CYCLOBENZAPRINE [Interacting]
     Active Substance: CYCLOBENZAPRINE
     Indication: Seizure
  867. CYCLOBENZAPRINE [Interacting]
     Active Substance: CYCLOBENZAPRINE
     Indication: Pain
  868. CYCLOBENZAPRINE [Interacting]
     Active Substance: CYCLOBENZAPRINE
     Indication: Fibromyalgia
  869. CYCLOBENZAPRINE [Interacting]
     Active Substance: CYCLOBENZAPRINE
     Indication: Seizure prophylaxis
  870. CYCLOBENZAPRINE [Interacting]
     Active Substance: CYCLOBENZAPRINE
     Indication: Seizure
  871. CYCLOBENZAPRINE [Interacting]
     Active Substance: CYCLOBENZAPRINE
     Indication: Pain
  872. CYCLOBENZAPRINE [Interacting]
     Active Substance: CYCLOBENZAPRINE
     Indication: Fibromyalgia
  873. DILTIAZEM [Interacting]
     Active Substance: DILTIAZEM
     Indication: Hypertension
  874. DILTIAZEM [Interacting]
     Active Substance: DILTIAZEM
     Indication: Coronary artery disease
  875. DILTIAZEM [Interacting]
     Active Substance: DILTIAZEM
     Indication: Chest pain
  876. DILTIAZEM [Interacting]
     Active Substance: DILTIAZEM
     Indication: Hypertension
     Dosage: UNKNOWN
  877. DILTIAZEM [Interacting]
     Active Substance: DILTIAZEM
     Indication: Coronary artery disease
     Dosage: UNKNOWN
  878. DILTIAZEM [Interacting]
     Active Substance: DILTIAZEM
     Indication: Chest pain
     Dosage: UNKNOWN
  879. DILTIAZEM [Interacting]
     Active Substance: DILTIAZEM
     Indication: Hypertension
     Dosage: UNKNOWN
  880. DILTIAZEM [Interacting]
     Active Substance: DILTIAZEM
     Indication: Coronary artery disease
     Dosage: UNKNOWN
  881. DILTIAZEM [Interacting]
     Active Substance: DILTIAZEM
     Indication: Chest pain
     Dosage: UNKNOWN
  882. DIPYRIDAMOLE [Interacting]
     Active Substance: DIPYRIDAMOLE
     Indication: Cerebrovascular accident
  883. DIPYRIDAMOLE [Interacting]
     Active Substance: DIPYRIDAMOLE
     Indication: Product used for unknown indication
  884. DIPYRIDAMOLE [Interacting]
     Active Substance: DIPYRIDAMOLE
     Indication: Cerebrovascular accident
  885. DIPYRIDAMOLE [Interacting]
     Active Substance: DIPYRIDAMOLE
     Indication: Product used for unknown indication
  886. DIPYRIDAMOLE [Interacting]
     Active Substance: DIPYRIDAMOLE
     Indication: Cerebrovascular accident
     Dosage: 0.5 DF, 1 EVERY DAYS
  887. DIPYRIDAMOLE [Interacting]
     Active Substance: DIPYRIDAMOLE
     Indication: Product used for unknown indication
     Dosage: 0.5 DF, 1 EVERY DAYS
  888. FUROSEMIDE [Interacting]
     Active Substance: FUROSEMIDE
     Indication: Product used for unknown indication
  889. FUROSEMIDE [Interacting]
     Active Substance: FUROSEMIDE
     Indication: Oedema
  890. FUROSEMIDE [Interacting]
     Active Substance: FUROSEMIDE
     Indication: Oedema
  891. FUROSEMIDE [Interacting]
     Active Substance: FUROSEMIDE
     Indication: Coronary artery disease
  892. FUROSEMIDE [Interacting]
     Active Substance: FUROSEMIDE
     Indication: Chest pain
  893. FUROSEMIDE [Interacting]
     Active Substance: FUROSEMIDE
     Indication: Angina pectoris
  894. FUROSEMIDE [Interacting]
     Active Substance: FUROSEMIDE
     Indication: Product used for unknown indication
  895. FUROSEMIDE [Interacting]
     Active Substance: FUROSEMIDE
     Indication: Oedema
  896. FUROSEMIDE [Interacting]
     Active Substance: FUROSEMIDE
     Indication: Oedema
  897. FUROSEMIDE [Interacting]
     Active Substance: FUROSEMIDE
     Indication: Coronary artery disease
  898. FUROSEMIDE [Interacting]
     Active Substance: FUROSEMIDE
     Indication: Chest pain
  899. FUROSEMIDE [Interacting]
     Active Substance: FUROSEMIDE
     Indication: Angina pectoris
  900. FUROSEMIDE [Interacting]
     Active Substance: FUROSEMIDE
     Indication: Product used for unknown indication
     Dosage: 10 MG, QD
  901. FUROSEMIDE [Interacting]
     Active Substance: FUROSEMIDE
     Indication: Oedema
     Dosage: 10 MG, QD
  902. FUROSEMIDE [Interacting]
     Active Substance: FUROSEMIDE
     Indication: Oedema
     Dosage: 10 MG, QD
  903. FUROSEMIDE [Interacting]
     Active Substance: FUROSEMIDE
     Indication: Coronary artery disease
     Dosage: 10 MG, QD
  904. FUROSEMIDE [Interacting]
     Active Substance: FUROSEMIDE
     Indication: Chest pain
     Dosage: 10 MG, QD
  905. FUROSEMIDE [Interacting]
     Active Substance: FUROSEMIDE
     Indication: Angina pectoris
     Dosage: 10 MG, QD
  906. FUROSEMIDE [Interacting]
     Active Substance: FUROSEMIDE
     Indication: Product used for unknown indication
     Dosage: 20 MG, QD
  907. FUROSEMIDE [Interacting]
     Active Substance: FUROSEMIDE
     Indication: Oedema
     Dosage: 20 MG, QD
  908. FUROSEMIDE [Interacting]
     Active Substance: FUROSEMIDE
     Indication: Oedema
     Dosage: 20 MG, QD
  909. FUROSEMIDE [Interacting]
     Active Substance: FUROSEMIDE
     Indication: Coronary artery disease
     Dosage: 20 MG, QD
  910. FUROSEMIDE [Interacting]
     Active Substance: FUROSEMIDE
     Indication: Chest pain
     Dosage: 20 MG, QD
  911. FUROSEMIDE [Interacting]
     Active Substance: FUROSEMIDE
     Indication: Angina pectoris
     Dosage: 20 MG, QD
  912. GALANTAMINE [Interacting]
     Active Substance: GALANTAMINE
     Indication: Dementia
  913. GLUCOSAMINE [Interacting]
     Active Substance: GLUCOSAMINE
     Indication: Pain
  914. GLUCOSAMINE [Interacting]
     Active Substance: GLUCOSAMINE
     Indication: Arthritis
  915. GLUCOSAMINE [Interacting]
     Active Substance: GLUCOSAMINE
     Indication: Pain
     Dosage: UNKNOWN
  916. GLUCOSAMINE [Interacting]
     Active Substance: GLUCOSAMINE
     Indication: Arthritis
     Dosage: UNKNOWN
  917. GLUCOSAMINE [Interacting]
     Active Substance: GLUCOSAMINE
     Indication: Pain
     Dosage: 250.0MG UNKNOWN
  918. GLUCOSAMINE [Interacting]
     Active Substance: GLUCOSAMINE
     Indication: Arthritis
     Dosage: 250.0MG UNKNOWN
  919. GLUCOSAMINE [Interacting]
     Active Substance: GLUCOSAMINE
     Indication: Pain
     Dosage: 1000 MG, QD1000.0MG UNKNOWN
  920. GLUCOSAMINE [Interacting]
     Active Substance: GLUCOSAMINE
     Indication: Arthritis
     Dosage: 1000 MG, QD1000.0MG UNKNOWN
  921. GLUCOSAMINE [Interacting]
     Active Substance: GLUCOSAMINE
     Indication: Pain
     Dosage: 500 MG, 1 EVERY 1 HOURS500.0MG UNKNOWN
  922. GLUCOSAMINE [Interacting]
     Active Substance: GLUCOSAMINE
     Indication: Arthritis
     Dosage: 500 MG, 1 EVERY 1 HOURS500.0MG UNKNOWN
  923. GLUCOSAMINE [Interacting]
     Active Substance: GLUCOSAMINE
     Indication: Pain
     Dosage: 2500 MG, QD2500.0MG UNKNOWN
  924. GLUCOSAMINE [Interacting]
     Active Substance: GLUCOSAMINE
     Indication: Arthritis
     Dosage: 2500 MG, QD2500.0MG UNKNOWN
  925. GLUCOSAMINE [Interacting]
     Active Substance: GLUCOSAMINE
     Indication: Pain
     Dosage: 500 MG, 1 EVERY 12 HOURS500.0MG UNKNOWN
  926. GLUCOSAMINE [Interacting]
     Active Substance: GLUCOSAMINE
     Indication: Arthritis
     Dosage: 500 MG, 1 EVERY 12 HOURS500.0MG UNKNOWN
  927. GLUCOSAMINE [Interacting]
     Active Substance: GLUCOSAMINE
     Indication: Pain
     Dosage: 500 MG, ( 5 EVERY 1 DAY)500.0MG UNKNOWN
  928. GLUCOSAMINE [Interacting]
     Active Substance: GLUCOSAMINE
     Indication: Arthritis
     Dosage: 500 MG, ( 5 EVERY 1 DAY)500.0MG UNKNOWN
  929. GLUCOSAMINE [Interacting]
     Active Substance: GLUCOSAMINE
     Indication: Pain
     Dosage: 500 MG, QD500.0MG UNKNOWN
  930. GLUCOSAMINE [Interacting]
     Active Substance: GLUCOSAMINE
     Indication: Arthritis
     Dosage: 500 MG, QD500.0MG UNKNOWN
  931. GLUCOSAMINE [Interacting]
     Active Substance: GLUCOSAMINE
     Indication: Pain
     Dosage: 500 MG, BID500.0MG UNKNOWN
  932. GLUCOSAMINE [Interacting]
     Active Substance: GLUCOSAMINE
     Indication: Arthritis
     Dosage: 500 MG, BID500.0MG UNKNOWN
  933. GLUCOSAMINE [Interacting]
     Active Substance: GLUCOSAMINE
     Indication: Pain
     Dosage: 250 MG, BID250.0MG UNKNOWN
  934. GLUCOSAMINE [Interacting]
     Active Substance: GLUCOSAMINE
     Indication: Arthritis
     Dosage: 250 MG, BID250.0MG UNKNOWN
  935. LACTULOSE [Interacting]
     Active Substance: LACTULOSE
     Indication: Constipation
     Route: 048
  936. LACTULOSE [Interacting]
     Active Substance: LACTULOSE
     Indication: Urinary tract infection
     Route: 048
  937. LACTULOSE [Interacting]
     Active Substance: LACTULOSE
     Indication: Thyroid disorder
     Route: 048
  938. LACTULOSE [Interacting]
     Active Substance: LACTULOSE
     Indication: Radioactive iodine therapy
     Route: 048
  939. LACTULOSE [Interacting]
     Active Substance: LACTULOSE
     Indication: Constipation
     Route: 048
  940. LACTULOSE [Interacting]
     Active Substance: LACTULOSE
     Indication: Urinary tract infection
     Route: 048
  941. LACTULOSE [Interacting]
     Active Substance: LACTULOSE
     Indication: Thyroid disorder
     Route: 048
  942. LACTULOSE [Interacting]
     Active Substance: LACTULOSE
     Indication: Radioactive iodine therapy
     Route: 048
  943. LEVOFLOXACIN [Interacting]
     Active Substance: LEVOFLOXACIN
     Indication: Urinary tract infection
  944. LEVOFLOXACIN [Interacting]
     Active Substance: LEVOFLOXACIN
     Indication: Thyroid disorder
  945. LEVOFLOXACIN [Interacting]
     Active Substance: LEVOFLOXACIN
     Indication: Radioactive iodine therapy
  946. LEVOFLOXACIN [Interacting]
     Active Substance: LEVOFLOXACIN
     Indication: Urinary tract infection
     Dosage: 200 MG, QD
  947. LEVOFLOXACIN [Interacting]
     Active Substance: LEVOFLOXACIN
     Indication: Thyroid disorder
     Dosage: 200 MG, QD
  948. LEVOFLOXACIN [Interacting]
     Active Substance: LEVOFLOXACIN
     Indication: Radioactive iodine therapy
     Dosage: 200 MG, QD
  949. LEVOFLOXACIN [Interacting]
     Active Substance: LEVOFLOXACIN
     Indication: Urinary tract infection
  950. LEVOFLOXACIN [Interacting]
     Active Substance: LEVOFLOXACIN
     Indication: Thyroid disorder
  951. LEVOFLOXACIN [Interacting]
     Active Substance: LEVOFLOXACIN
     Indication: Radioactive iodine therapy
  952. LEVOTHYROXINE SODIUM [Interacting]
     Active Substance: LEVOTHYROXINE SODIUM
     Indication: Thyroid disorder
  953. LEVOTHYROXINE SODIUM [Interacting]
     Active Substance: LEVOTHYROXINE SODIUM
     Indication: Radioactive iodine therapy
  954. LEVOTHYROXINE SODIUM [Interacting]
     Active Substance: LEVOTHYROXINE SODIUM
     Indication: Thyroid disorder
  955. LEVOTHYROXINE SODIUM [Interacting]
     Active Substance: LEVOTHYROXINE SODIUM
     Indication: Radioactive iodine therapy
  956. LEVOTHYROXINE SODIUM [Interacting]
     Active Substance: LEVOTHYROXINE SODIUM
     Indication: Thyroid disorder
  957. LEVOTHYROXINE SODIUM [Interacting]
     Active Substance: LEVOTHYROXINE SODIUM
     Indication: Radioactive iodine therapy
  958. LEVOTHYROXINE SODIUM [Interacting]
     Active Substance: LEVOTHYROXINE SODIUM
     Indication: Thyroid disorder
  959. LEVOTHYROXINE SODIUM [Interacting]
     Active Substance: LEVOTHYROXINE SODIUM
     Indication: Radioactive iodine therapy
  960. LEVOTHYROXINE SODIUM [Interacting]
     Active Substance: LEVOTHYROXINE SODIUM
     Indication: Thyroid disorder
     Dosage: 622 MG, BID
  961. LEVOTHYROXINE SODIUM [Interacting]
     Active Substance: LEVOTHYROXINE SODIUM
     Indication: Radioactive iodine therapy
     Dosage: 622 MG, BID
  962. MAGNESIUM HYDROXIDE [Interacting]
     Active Substance: MAGNESIUM HYDROXIDE
     Indication: Constipation
     Dosage: 622 MG, BID
  963. MAGNESIUM HYDROXIDE [Interacting]
     Active Substance: MAGNESIUM HYDROXIDE
     Indication: Product used for unknown indication
     Dosage: 622 MG, BID
  964. MAGNESIUM HYDROXIDE [Interacting]
     Active Substance: MAGNESIUM HYDROXIDE
     Indication: Constipation
     Dosage: 2 DF, QD
  965. MAGNESIUM HYDROXIDE [Interacting]
     Active Substance: MAGNESIUM HYDROXIDE
     Indication: Product used for unknown indication
     Dosage: 2 DF, QD
  966. MAGNESIUM HYDROXIDE [Interacting]
     Active Substance: MAGNESIUM HYDROXIDE
     Indication: Constipation
     Dosage: 1 DF, QD
  967. MAGNESIUM HYDROXIDE [Interacting]
     Active Substance: MAGNESIUM HYDROXIDE
     Indication: Product used for unknown indication
     Dosage: 1 DF, QD
  968. MAGNESIUM HYDROXIDE [Interacting]
     Active Substance: MAGNESIUM HYDROXIDE
     Indication: Constipation
     Dosage: 622 MG, QD
  969. MAGNESIUM HYDROXIDE [Interacting]
     Active Substance: MAGNESIUM HYDROXIDE
     Indication: Product used for unknown indication
     Dosage: 622 MG, QD
  970. MAGNESIUM HYDROXIDE [Interacting]
     Active Substance: MAGNESIUM HYDROXIDE
     Indication: Constipation
     Dosage: 1240 MG, QD
  971. MAGNESIUM HYDROXIDE [Interacting]
     Active Substance: MAGNESIUM HYDROXIDE
     Indication: Product used for unknown indication
     Dosage: 1240 MG, QD
  972. MAGNESIUM HYDROXIDE [Interacting]
     Active Substance: MAGNESIUM HYDROXIDE
     Indication: Constipation
     Dosage: 1 EVERY 1 DAY
  973. MAGNESIUM HYDROXIDE [Interacting]
     Active Substance: MAGNESIUM HYDROXIDE
     Indication: Product used for unknown indication
     Dosage: 1 EVERY 1 DAY
  974. MAGNESIUM HYDROXIDE [Interacting]
     Active Substance: MAGNESIUM HYDROXIDE
     Indication: Constipation
     Dosage: UNK
  975. MAGNESIUM HYDROXIDE [Interacting]
     Active Substance: MAGNESIUM HYDROXIDE
     Indication: Product used for unknown indication
     Dosage: UNK
  976. MAGNESIUM HYDROXIDE [Interacting]
     Active Substance: MAGNESIUM HYDROXIDE
     Indication: Constipation
     Dosage: 311 MG
  977. MAGNESIUM HYDROXIDE [Interacting]
     Active Substance: MAGNESIUM HYDROXIDE
     Indication: Product used for unknown indication
     Dosage: 311 MG
  978. MAGNESIUM HYDROXIDE [Interacting]
     Active Substance: MAGNESIUM HYDROXIDE
     Indication: Constipation
     Dosage: 1 DF, BID
  979. MAGNESIUM HYDROXIDE [Interacting]
     Active Substance: MAGNESIUM HYDROXIDE
     Indication: Product used for unknown indication
     Dosage: 1 DF, BID
  980. MAGNESIUM HYDROXIDE [Interacting]
     Active Substance: MAGNESIUM HYDROXIDE
     Indication: Constipation
     Dosage: 622 MG
  981. MAGNESIUM HYDROXIDE [Interacting]
     Active Substance: MAGNESIUM HYDROXIDE
     Indication: Product used for unknown indication
     Dosage: 622 MG
  982. MAGNESIUM HYDROXIDE [Interacting]
     Active Substance: MAGNESIUM HYDROXIDE
     Indication: Constipation
     Dosage: 1244 MG, QD
  983. MAGNESIUM HYDROXIDE [Interacting]
     Active Substance: MAGNESIUM HYDROXIDE
     Indication: Product used for unknown indication
     Dosage: 1244 MG, QD
  984. MORPHINE SULFATE [Interacting]
     Active Substance: MORPHINE SULFATE
     Indication: Pain
  985. MORPHINE SULFATE [Interacting]
     Active Substance: MORPHINE SULFATE
     Indication: Fibromyalgia
  986. MORPHINE SULFATE [Interacting]
     Active Substance: MORPHINE SULFATE
     Indication: Pain
  987. MORPHINE SULFATE [Interacting]
     Active Substance: MORPHINE SULFATE
     Indication: Fibromyalgia
  988. NITROGLYCERIN [Interacting]
     Active Substance: NITROGLYCERIN
     Indication: Coronary artery disease
     Dosage: 4.0MG UNKNOWN
  989. NITROGLYCERIN [Interacting]
     Active Substance: NITROGLYCERIN
     Indication: Chest pain
     Dosage: 4.0MG UNKNOWN
  990. NITROGLYCERIN [Interacting]
     Active Substance: NITROGLYCERIN
     Indication: Angina pectoris
     Dosage: 4.0MG UNKNOWN
  991. NITROGLYCERIN [Interacting]
     Active Substance: NITROGLYCERIN
     Indication: Product used for unknown indication
     Dosage: 4.0MG UNKNOWN
  992. NITROGLYCERIN [Interacting]
     Active Substance: NITROGLYCERIN
     Indication: Coronary artery disease
     Dosage: 1.0DF UNKNOWN
  993. NITROGLYCERIN [Interacting]
     Active Substance: NITROGLYCERIN
     Indication: Chest pain
     Dosage: 1.0DF UNKNOWN
  994. NITROGLYCERIN [Interacting]
     Active Substance: NITROGLYCERIN
     Indication: Angina pectoris
     Dosage: 1.0DF UNKNOWN
  995. NITROGLYCERIN [Interacting]
     Active Substance: NITROGLYCERIN
     Indication: Product used for unknown indication
     Dosage: 1.0DF UNKNOWN
  996. NITROGLYCERIN [Interacting]
     Active Substance: NITROGLYCERIN
     Indication: Coronary artery disease
     Dosage: 0.6MG UNKNOWN
  997. NITROGLYCERIN [Interacting]
     Active Substance: NITROGLYCERIN
     Indication: Chest pain
     Dosage: 0.6MG UNKNOWN
  998. NITROGLYCERIN [Interacting]
     Active Substance: NITROGLYCERIN
     Indication: Angina pectoris
     Dosage: 0.6MG UNKNOWN
  999. NITROGLYCERIN [Interacting]
     Active Substance: NITROGLYCERIN
     Indication: Product used for unknown indication
     Dosage: 0.6MG UNKNOWN
  1000. NITROGLYCERIN [Interacting]
     Active Substance: NITROGLYCERIN
     Indication: Coronary artery disease
     Dosage: 0.4 MG, UNK AS REQUIRED0.4MG UNKNOWN
     Route: 061
  1001. NITROGLYCERIN [Interacting]
     Active Substance: NITROGLYCERIN
     Indication: Chest pain
     Dosage: 0.4 MG, UNK AS REQUIRED0.4MG UNKNOWN
     Route: 061
  1002. NITROGLYCERIN [Interacting]
     Active Substance: NITROGLYCERIN
     Indication: Angina pectoris
     Dosage: 0.4 MG, UNK AS REQUIRED0.4MG UNKNOWN
     Route: 061
  1003. NITROGLYCERIN [Interacting]
     Active Substance: NITROGLYCERIN
     Indication: Product used for unknown indication
     Dosage: 0.4 MG, UNK AS REQUIRED0.4MG UNKNOWN
     Route: 061
  1004. NITROGLYCERIN [Interacting]
     Active Substance: NITROGLYCERIN
     Indication: Coronary artery disease
     Dosage: 6 MG, QD6.0MG UNKNOWN
     Route: 061
  1005. NITROGLYCERIN [Interacting]
     Active Substance: NITROGLYCERIN
     Indication: Chest pain
     Dosage: 6 MG, QD6.0MG UNKNOWN
     Route: 061
  1006. NITROGLYCERIN [Interacting]
     Active Substance: NITROGLYCERIN
     Indication: Angina pectoris
     Dosage: 6 MG, QD6.0MG UNKNOWN
     Route: 061
  1007. NITROGLYCERIN [Interacting]
     Active Substance: NITROGLYCERIN
     Indication: Product used for unknown indication
     Dosage: 6 MG, QD6.0MG UNKNOWN
     Route: 061
  1008. NITROGLYCERIN [Interacting]
     Active Substance: NITROGLYCERIN
     Indication: Coronary artery disease
     Dosage: 4.0MG UNKNOWN
     Route: 061
  1009. NITROGLYCERIN [Interacting]
     Active Substance: NITROGLYCERIN
     Indication: Chest pain
     Dosage: 4.0MG UNKNOWN
     Route: 061
  1010. NITROGLYCERIN [Interacting]
     Active Substance: NITROGLYCERIN
     Indication: Angina pectoris
     Dosage: 4.0MG UNKNOWN
     Route: 061
  1011. NITROGLYCERIN [Interacting]
     Active Substance: NITROGLYCERIN
     Indication: Product used for unknown indication
     Dosage: 4.0MG UNKNOWN
     Route: 061
  1012. OXAZEPAM [Interacting]
     Active Substance: OXAZEPAM
     Indication: Insomnia
     Dosage: UNKNOWN
  1013. OXAZEPAM [Interacting]
     Active Substance: OXAZEPAM
     Indication: Hypertension
     Dosage: UNKNOWN
  1014. OXAZEPAM [Interacting]
     Active Substance: OXAZEPAM
     Indication: Coronary artery disease
     Dosage: UNKNOWN
  1015. OXAZEPAM [Interacting]
     Active Substance: OXAZEPAM
     Indication: Insomnia
     Dosage: UNKNOWN
  1016. OXAZEPAM [Interacting]
     Active Substance: OXAZEPAM
     Indication: Hypertension
     Dosage: UNKNOWN
  1017. OXAZEPAM [Interacting]
     Active Substance: OXAZEPAM
     Indication: Coronary artery disease
     Dosage: UNKNOWN
  1018. OXAZEPAM [Interacting]
     Active Substance: OXAZEPAM
     Indication: Insomnia
     Dosage: 15.0MG UNKNOWN
  1019. OXAZEPAM [Interacting]
     Active Substance: OXAZEPAM
     Indication: Hypertension
     Dosage: 15.0MG UNKNOWN
  1020. OXAZEPAM [Interacting]
     Active Substance: OXAZEPAM
     Indication: Coronary artery disease
     Dosage: 15.0MG UNKNOWN
  1021. QUINAPRIL HYDROCHLORIDE [Interacting]
     Active Substance: QUINAPRIL HYDROCHLORIDE
     Indication: Hypertension
  1022. QUINAPRIL HYDROCHLORIDE [Interacting]
     Active Substance: QUINAPRIL HYDROCHLORIDE
     Indication: Coronary artery disease
  1023. QUINAPRIL HYDROCHLORIDE [Interacting]
     Active Substance: QUINAPRIL HYDROCHLORIDE
     Indication: Angina pectoris
  1024. QUINAPRIL HYDROCHLORIDE [Interacting]
     Active Substance: QUINAPRIL HYDROCHLORIDE
     Indication: Hypertension
  1025. QUINAPRIL HYDROCHLORIDE [Interacting]
     Active Substance: QUINAPRIL HYDROCHLORIDE
     Indication: Coronary artery disease
  1026. QUINAPRIL HYDROCHLORIDE [Interacting]
     Active Substance: QUINAPRIL HYDROCHLORIDE
     Indication: Angina pectoris
  1027. ALBUTEROL [Interacting]
     Active Substance: ALBUTEROL
     Indication: Product used for unknown indication
  1028. ALBUTEROL [Interacting]
     Active Substance: ALBUTEROL
     Indication: Hypertension
  1029. ALBUTEROL [Interacting]
     Active Substance: ALBUTEROL
     Indication: Coronary artery disease
  1030. ALBUTEROL [Interacting]
     Active Substance: ALBUTEROL
     Indication: Angina pectoris
  1031. ALBUTEROL [Interacting]
     Active Substance: ALBUTEROL
     Indication: Product used for unknown indication
     Dosage: 100 UG, QD, 1 EVERY 1 DAY100.0MG UNKNOWN
  1032. ALBUTEROL [Interacting]
     Active Substance: ALBUTEROL
     Indication: Hypertension
     Dosage: 100 UG, QD, 1 EVERY 1 DAY100.0MG UNKNOWN
  1033. ALBUTEROL [Interacting]
     Active Substance: ALBUTEROL
     Indication: Coronary artery disease
     Dosage: 100 UG, QD, 1 EVERY 1 DAY100.0MG UNKNOWN
  1034. ALBUTEROL [Interacting]
     Active Substance: ALBUTEROL
     Indication: Angina pectoris
     Dosage: 100 UG, QD, 1 EVERY 1 DAY100.0MG UNKNOWN
  1035. ALBUTEROL [Interacting]
     Active Substance: ALBUTEROL
     Indication: Product used for unknown indication
     Dosage: 800 MG, QD800.0MG UNKNOWN
  1036. ALBUTEROL [Interacting]
     Active Substance: ALBUTEROL
     Indication: Hypertension
     Dosage: 800 MG, QD800.0MG UNKNOWN
  1037. ALBUTEROL [Interacting]
     Active Substance: ALBUTEROL
     Indication: Coronary artery disease
     Dosage: 800 MG, QD800.0MG UNKNOWN
  1038. ALBUTEROL [Interacting]
     Active Substance: ALBUTEROL
     Indication: Angina pectoris
     Dosage: 800 MG, QD800.0MG UNKNOWN
  1039. ALBUTEROL [Interacting]
     Active Substance: ALBUTEROL
     Indication: Product used for unknown indication
     Dosage: 400 MG, QID400.0MG UNKNOWN
  1040. ALBUTEROL [Interacting]
     Active Substance: ALBUTEROL
     Indication: Hypertension
     Dosage: 400 MG, QID400.0MG UNKNOWN
  1041. ALBUTEROL [Interacting]
     Active Substance: ALBUTEROL
     Indication: Coronary artery disease
     Dosage: 400 MG, QID400.0MG UNKNOWN
  1042. ALBUTEROL [Interacting]
     Active Substance: ALBUTEROL
     Indication: Angina pectoris
     Dosage: 400 MG, QID400.0MG UNKNOWN
  1043. ALBUTEROL [Interacting]
     Active Substance: ALBUTEROL
     Indication: Product used for unknown indication
     Dosage: 200 MG, QID200.0MG UNKNOWN
  1044. ALBUTEROL [Interacting]
     Active Substance: ALBUTEROL
     Indication: Hypertension
     Dosage: 200 MG, QID200.0MG UNKNOWN
  1045. ALBUTEROL [Interacting]
     Active Substance: ALBUTEROL
     Indication: Coronary artery disease
     Dosage: 200 MG, QID200.0MG UNKNOWN
  1046. ALBUTEROL [Interacting]
     Active Substance: ALBUTEROL
     Indication: Angina pectoris
     Dosage: 200 MG, QID200.0MG UNKNOWN
  1047. ALBUTEROL [Interacting]
     Active Substance: ALBUTEROL
     Indication: Product used for unknown indication
     Dosage: 400 UG, QD400.0UG UNKNOWN
  1048. ALBUTEROL [Interacting]
     Active Substance: ALBUTEROL
     Indication: Hypertension
     Dosage: 400 UG, QD400.0UG UNKNOWN
  1049. ALBUTEROL [Interacting]
     Active Substance: ALBUTEROL
     Indication: Coronary artery disease
     Dosage: 400 UG, QD400.0UG UNKNOWN
  1050. ALBUTEROL [Interacting]
     Active Substance: ALBUTEROL
     Indication: Angina pectoris
     Dosage: 400 UG, QD400.0UG UNKNOWN
  1051. ALBUTEROL [Interacting]
     Active Substance: ALBUTEROL
     Indication: Product used for unknown indication
     Dosage: 200 MG, BID200.0MG UNKNOWN
  1052. ALBUTEROL [Interacting]
     Active Substance: ALBUTEROL
     Indication: Hypertension
     Dosage: 200 MG, BID200.0MG UNKNOWN
  1053. ALBUTEROL [Interacting]
     Active Substance: ALBUTEROL
     Indication: Coronary artery disease
     Dosage: 200 MG, BID200.0MG UNKNOWN
  1054. ALBUTEROL [Interacting]
     Active Substance: ALBUTEROL
     Indication: Angina pectoris
     Dosage: 200 MG, BID200.0MG UNKNOWN
  1055. ALBUTEROL [Interacting]
     Active Substance: ALBUTEROL
     Indication: Product used for unknown indication
     Dosage: 360 MG, QD360.0MG UNKNOWN
  1056. ALBUTEROL [Interacting]
     Active Substance: ALBUTEROL
     Indication: Hypertension
     Dosage: 360 MG, QD360.0MG UNKNOWN
  1057. ALBUTEROL [Interacting]
     Active Substance: ALBUTEROL
     Indication: Coronary artery disease
     Dosage: 360 MG, QD360.0MG UNKNOWN
  1058. ALBUTEROL [Interacting]
     Active Substance: ALBUTEROL
     Indication: Angina pectoris
     Dosage: 360 MG, QD360.0MG UNKNOWN
  1059. SPIRIVA [Interacting]
     Active Substance: TIOTROPIUM BROMIDE MONOHYDRATE
     Indication: Chronic obstructive pulmonary disease
  1060. TIOTROPIUM BROMIDE [Interacting]
     Active Substance: TIOTROPIUM BROMIDE
     Indication: Product used for unknown indication
  1061. TIOTROPIUM BROMIDE [Interacting]
     Active Substance: TIOTROPIUM BROMIDE
     Indication: Chronic obstructive pulmonary disease
  1062. ASPIRIN [Interacting]
     Active Substance: ASPIRIN
     Indication: Hypertension
     Dosage: UNK
     Route: 048
  1063. ASPIRIN [Interacting]
     Active Substance: ASPIRIN
     Indication: Coronary artery disease
     Dosage: UNK
     Route: 048
  1064. ASPIRIN [Interacting]
     Active Substance: ASPIRIN
     Indication: Angina pectoris
     Dosage: UNK
     Route: 048
  1065. CALCIUM CARBONATE [Interacting]
     Active Substance: CALCIUM CARBONATE
     Indication: Product used for unknown indication
  1066. EX-LAX REGULAR STRENGTH STIMULANT LAXATIVE [Interacting]
     Active Substance: SENNOSIDES
     Indication: Pain
     Dosage: UNK
  1067. PHENYLEPHRINE HYDROCHLORIDE [Interacting]
     Active Substance: PHENYLEPHRINE HYDROCHLORIDE
     Indication: Pain
     Dosage: UNK
  1068. CAFFEINE\MINERALS\VITAMINS [Interacting]
     Active Substance: CAFFEINE\MINERALS\VITAMINS
     Indication: Product used for unknown indication
     Dosage: UNK
  1069. ACETAMINOPHEN [Interacting]
     Active Substance: ACETAMINOPHEN
     Indication: Pain
     Dosage: 650 MG, QD
  1070. ACETAMINOPHEN [Interacting]
     Active Substance: ACETAMINOPHEN
     Indication: Fibromyalgia
     Dosage: 650 MG, QD
  1071. ACETAMINOPHEN [Interacting]
     Active Substance: ACETAMINOPHEN
     Indication: Angina pectoris
     Dosage: 650 MG, QD
  1072. ACETAMINOPHEN [Interacting]
     Active Substance: ACETAMINOPHEN
     Indication: Pain
     Dosage: 650 MG, AS REQUIRED
  1073. ACETAMINOPHEN [Interacting]
     Active Substance: ACETAMINOPHEN
     Indication: Fibromyalgia
     Dosage: 650 MG, AS REQUIRED
  1074. ACETAMINOPHEN [Interacting]
     Active Substance: ACETAMINOPHEN
     Indication: Angina pectoris
     Dosage: 650 MG, AS REQUIRED
  1075. ACETAMINOPHEN [Interacting]
     Active Substance: ACETAMINOPHEN
     Indication: Pain
     Dosage: 650 MG
  1076. ACETAMINOPHEN [Interacting]
     Active Substance: ACETAMINOPHEN
     Indication: Fibromyalgia
     Dosage: 650 MG
  1077. ACETAMINOPHEN [Interacting]
     Active Substance: ACETAMINOPHEN
     Indication: Angina pectoris
     Dosage: 650 MG
  1078. ACETAMINOPHEN [Interacting]
     Active Substance: ACETAMINOPHEN
     Indication: Pain
     Dosage: 650 MG, QID
  1079. ACETAMINOPHEN [Interacting]
     Active Substance: ACETAMINOPHEN
     Indication: Fibromyalgia
     Dosage: 650 MG, QID
  1080. ACETAMINOPHEN [Interacting]
     Active Substance: ACETAMINOPHEN
     Indication: Angina pectoris
     Dosage: 650 MG, QID
  1081. GLYCERIN\LECITHIN\SOYBEAN OIL [Interacting]
     Active Substance: GLYCERIN\LECITHIN\SOYBEAN OIL
     Indication: Product used for unknown indication
     Dosage: UNK
  1082. ACETAMINOPHEN\CODEINE PHOSPHATE [Interacting]
     Active Substance: ACETAMINOPHEN\CODEINE PHOSPHATE
     Indication: Product used for unknown indication
  1083. DILTIAZEM HYDROCHLORIDE [Interacting]
     Active Substance: DILTIAZEM HYDROCHLORIDE
     Indication: Coronary artery disease
     Dosage: 36 MG, QD
  1084. DILTIAZEM HYDROCHLORIDE [Interacting]
     Active Substance: DILTIAZEM HYDROCHLORIDE
     Indication: Chest pain
     Dosage: 36 MG, QD
  1085. DILTIAZEM HYDROCHLORIDE [Interacting]
     Active Substance: DILTIAZEM HYDROCHLORIDE
     Indication: Angina pectoris
     Dosage: 36 MG, QD
  1086. DILTIAZEM HYDROCHLORIDE [Interacting]
     Active Substance: DILTIAZEM HYDROCHLORIDE
     Indication: Coronary artery disease
     Dosage: 15 MG, QD
  1087. DILTIAZEM HYDROCHLORIDE [Interacting]
     Active Substance: DILTIAZEM HYDROCHLORIDE
     Indication: Chest pain
     Dosage: 15 MG, QD
  1088. DILTIAZEM HYDROCHLORIDE [Interacting]
     Active Substance: DILTIAZEM HYDROCHLORIDE
     Indication: Angina pectoris
     Dosage: 15 MG, QD
  1089. DILTIAZEM HYDROCHLORIDE [Interacting]
     Active Substance: DILTIAZEM HYDROCHLORIDE
     Indication: Coronary artery disease
     Dosage: 300 MG, QD
  1090. DILTIAZEM HYDROCHLORIDE [Interacting]
     Active Substance: DILTIAZEM HYDROCHLORIDE
     Indication: Chest pain
     Dosage: 300 MG, QD
  1091. DILTIAZEM HYDROCHLORIDE [Interacting]
     Active Substance: DILTIAZEM HYDROCHLORIDE
     Indication: Angina pectoris
     Dosage: 300 MG, QD
  1092. DILTIAZEM HYDROCHLORIDE [Interacting]
     Active Substance: DILTIAZEM HYDROCHLORIDE
     Indication: Coronary artery disease
     Dosage: 360 MG
  1093. DILTIAZEM HYDROCHLORIDE [Interacting]
     Active Substance: DILTIAZEM HYDROCHLORIDE
     Indication: Chest pain
     Dosage: 360 MG
  1094. DILTIAZEM HYDROCHLORIDE [Interacting]
     Active Substance: DILTIAZEM HYDROCHLORIDE
     Indication: Angina pectoris
     Dosage: 360 MG
  1095. DIAZEPAM [Interacting]
     Active Substance: DIAZEPAM
     Indication: Insomnia
  1096. DIAZEPAM [Interacting]
     Active Substance: DIAZEPAM
     Indication: Hypertension
  1097. DIAZEPAM [Interacting]
     Active Substance: DIAZEPAM
     Indication: Coronary artery disease
  1098. DIAZEPAM [Interacting]
     Active Substance: DIAZEPAM
     Indication: Angina pectoris
  1099. ALBUTEROL SULFATE [Interacting]
     Active Substance: ALBUTEROL SULFATE
     Indication: Hypertension
  1100. ALBUTEROL SULFATE [Interacting]
     Active Substance: ALBUTEROL SULFATE
     Indication: Coronary artery disease
  1101. ALBUTEROL SULFATE [Interacting]
     Active Substance: ALBUTEROL SULFATE
     Indication: Chronic obstructive pulmonary disease
  1102. ALBUTEROL SULFATE [Interacting]
     Active Substance: ALBUTEROL SULFATE
     Indication: Hypertension
  1103. ALBUTEROL SULFATE [Interacting]
     Active Substance: ALBUTEROL SULFATE
     Indication: Coronary artery disease
  1104. ALBUTEROL SULFATE [Interacting]
     Active Substance: ALBUTEROL SULFATE
     Indication: Chronic obstructive pulmonary disease
  1105. ALBUTEROL SULFATE [Interacting]
     Active Substance: ALBUTEROL SULFATE
     Indication: Hypertension
  1106. ALBUTEROL SULFATE [Interacting]
     Active Substance: ALBUTEROL SULFATE
     Indication: Coronary artery disease
  1107. ALBUTEROL SULFATE [Interacting]
     Active Substance: ALBUTEROL SULFATE
     Indication: Chronic obstructive pulmonary disease
  1108. ALBUTEROL SULFATE [Interacting]
     Active Substance: ALBUTEROL SULFATE
     Indication: Hypertension
  1109. ALBUTEROL SULFATE [Interacting]
     Active Substance: ALBUTEROL SULFATE
     Indication: Coronary artery disease
  1110. ALBUTEROL SULFATE [Interacting]
     Active Substance: ALBUTEROL SULFATE
     Indication: Chronic obstructive pulmonary disease
  1111. LEVOFLOXACIN HEMIHYDRATE [Interacting]
     Active Substance: LEVOFLOXACIN
     Indication: Urinary tract infection
  1112. LEVOFLOXACIN HEMIHYDRATE [Interacting]
     Active Substance: LEVOFLOXACIN
     Indication: Urinary tract infection
  1113. SALICYLAMIDE [Interacting]
     Active Substance: SALICYLAMIDE
     Indication: Pain
  1114. NITROGLYCERIN [Interacting]
     Active Substance: NITROGLYCERIN
     Indication: Coronary artery disease
     Dosage: 0.4 MG, 1 EVERY 1 DAY
  1115. NITROGLYCERIN [Interacting]
     Active Substance: NITROGLYCERIN
     Indication: Angina pectoris
     Dosage: 0.4 MG, 1 EVERY 1 DAY
  1116. NITROGLYCERIN [Interacting]
     Active Substance: NITROGLYCERIN
     Indication: Hypertension
     Dosage: 0.4 MG, 1 EVERY 1 DAY
  1117. NITROGLYCERIN [Interacting]
     Active Substance: NITROGLYCERIN
     Indication: Coronary artery disease
     Dosage: 0.6 MG, QD, 1 EVERY 1 DAY
  1118. NITROGLYCERIN [Interacting]
     Active Substance: NITROGLYCERIN
     Indication: Angina pectoris
     Dosage: 0.6 MG, QD, 1 EVERY 1 DAY
  1119. NITROGLYCERIN [Interacting]
     Active Substance: NITROGLYCERIN
     Indication: Hypertension
     Dosage: 0.6 MG, QD, 1 EVERY 1 DAY
  1120. NITROGLYCERIN [Interacting]
     Active Substance: NITROGLYCERIN
     Indication: Coronary artery disease
  1121. NITROGLYCERIN [Interacting]
     Active Substance: NITROGLYCERIN
     Indication: Angina pectoris
  1122. NITROGLYCERIN [Interacting]
     Active Substance: NITROGLYCERIN
     Indication: Hypertension
  1123. NITROGLYCERIN [Interacting]
     Active Substance: NITROGLYCERIN
     Indication: Coronary artery disease
  1124. NITROGLYCERIN [Interacting]
     Active Substance: NITROGLYCERIN
     Indication: Angina pectoris
  1125. NITROGLYCERIN [Interacting]
     Active Substance: NITROGLYCERIN
     Indication: Hypertension
  1126. NITROGLYCERIN [Interacting]
     Active Substance: NITROGLYCERIN
     Indication: Coronary artery disease
     Route: 061
  1127. NITROGLYCERIN [Interacting]
     Active Substance: NITROGLYCERIN
     Indication: Angina pectoris
     Route: 061
  1128. NITROGLYCERIN [Interacting]
     Active Substance: NITROGLYCERIN
     Indication: Hypertension
     Route: 061
  1129. ERGOCALCIFEROL [Interacting]
     Active Substance: ERGOCALCIFEROL
     Indication: Product used for unknown indication
     Route: 065
  1130. ATROPINE [Interacting]
     Active Substance: ATROPINE\ATROPINE SULFATE
     Indication: Coronary artery disease
     Dosage: 6.0 MG, QD, 1 EVERY 1 DAY
     Route: 065
  1131. ATROPINE [Interacting]
     Active Substance: ATROPINE\ATROPINE SULFATE
     Indication: Chest pain
     Dosage: 6.0 MG, QD, 1 EVERY 1 DAY
     Route: 065
  1132. ATROPINE [Interacting]
     Active Substance: ATROPINE\ATROPINE SULFATE
     Indication: Angina pectoris
     Dosage: 6.0 MG, QD, 1 EVERY 1 DAY
     Route: 065
  1133. PAPAVERINE [Interacting]
     Active Substance: PAPAVERINE
     Indication: Coronary artery disease
     Dosage: 6.0 MG, QD, 1 EVERY 1 DAY
     Route: 065
  1134. PAPAVERINE [Interacting]
     Active Substance: PAPAVERINE
     Indication: Chest pain
     Dosage: 6.0 MG, QD, 1 EVERY 1 DAY
     Route: 065
  1135. PAPAVERINE [Interacting]
     Active Substance: PAPAVERINE
     Indication: Angina pectoris
     Dosage: 6.0 MG, QD, 1 EVERY 1 DAY
     Route: 065
  1136. PHENOBARBITAL [Interacting]
     Active Substance: PHENOBARBITAL
     Indication: Coronary artery disease
     Dosage: 6.0 MG, QD, 1 EVERY 1 DAY
     Route: 065
  1137. PHENOBARBITAL [Interacting]
     Active Substance: PHENOBARBITAL
     Indication: Chest pain
     Dosage: 6.0 MG, QD, 1 EVERY 1 DAY
     Route: 065
  1138. PHENOBARBITAL [Interacting]
     Active Substance: PHENOBARBITAL
     Indication: Angina pectoris
     Dosage: 6.0 MG, QD, 1 EVERY 1 DAY
     Route: 065
  1139. PERPHENAZINE [Interacting]
     Active Substance: PERPHENAZINE
     Indication: Insomnia
     Route: 065
  1140. ACETAMINOPHEN\CAFFEINE [Interacting]
     Active Substance: ACETAMINOPHEN\CAFFEINE
     Indication: Pain
     Route: 065
  1141. ACETAMINOPHEN\CAFFEINE [Interacting]
     Active Substance: ACETAMINOPHEN\CAFFEINE
     Indication: Fibromyalgia
     Route: 065
  1142. CRANBERRY [Concomitant]
     Active Substance: CRANBERRY
     Indication: Product used for unknown indication
     Route: 065
  1143. ZINC [Concomitant]
     Active Substance: PYRITHIONE ZINC\ZINC\ZINC CHLORIDE
     Indication: Product used for unknown indication
     Route: 065
  1144. CRANBERRY [Concomitant]
     Active Substance: CRANBERRY
     Indication: Bladder disorder
     Route: 065
  1145. HERBALS\PLANTAGO INDICA WHOLE [Concomitant]
     Active Substance: HERBALS\PLANTAGO INDICA WHOLE
     Indication: Constipation
     Route: 065
  1146. ASPIRIN [Concomitant]
     Active Substance: ASPIRIN
     Indication: Product used for unknown indication
     Route: 048
  1147. ASCORBIC ACID [Concomitant]
     Active Substance: ASCORBIC ACID
     Indication: Product used for unknown indication
     Route: 065
  1148. PHOSPHORIC ACID [Concomitant]
     Active Substance: PHOSPHORIC ACID
  1149. POTASSIUM [Concomitant]
     Active Substance: POTASSIUM
  1150. SODIUM BENZOATE [Concomitant]
     Active Substance: SODIUM BENZOATE
  1151. CALCIUM POLYCARBOPHIL [Concomitant]
     Active Substance: CALCIUM POLYCARBOPHIL
  1152. POTASSIUM SORBATE [Concomitant]
     Active Substance: POTASSIUM SORBATE
  1153. HERBALS [Interacting]
     Active Substance: HERBALS
     Indication: Hypertension
  1154. AMBROXOL HYDROCHLORIDE\CLENBUTEROL [Interacting]
     Active Substance: AMBROXOL HYDROCHLORIDE\CLENBUTEROL
     Indication: Product used for unknown indication
  1155. AMLODIPINE BESYLATE [Interacting]
     Active Substance: AMLODIPINE BESYLATE
     Indication: Coronary artery disease
  1156. AMLODIPINE BESYLATE [Interacting]
     Active Substance: AMLODIPINE BESYLATE
     Indication: Hypertension
  1157. AMLODIPINE BESYLATE [Interacting]
     Active Substance: AMLODIPINE BESYLATE
     Indication: Constipation
  1158. AMLODIPINE BESYLATE [Interacting]
     Active Substance: AMLODIPINE BESYLATE
     Indication: Chest pain
  1159. AMLODIPINE BESYLATE [Interacting]
     Active Substance: AMLODIPINE BESYLATE
     Indication: Angina pectoris
  1160. CHONDROITIN SULFATE (BOVINE)\GLUCOSAMINE [Interacting]
     Active Substance: CHONDROITIN SULFATE (BOVINE)\GLUCOSAMINE SULFATE
     Indication: Product used for unknown indication
  1161. DOCUSATE SODIUM [Interacting]
     Active Substance: DOCUSATE SODIUM
     Indication: Constipation
  1162. DROTAVERINE [Interacting]
     Active Substance: DROTAVERINE
     Indication: Product used for unknown indication
  1163. DULCOLAX (BISACODYL) [Interacting]
     Active Substance: BISACODYL
     Indication: Constipation
  1164. AMITRIPTYLINE PAMOATE\PERPHENAZINE [Interacting]
     Active Substance: AMITRIPTYLINE PAMOATE\PERPHENAZINE
     Indication: Insomnia
  1165. AMITRIPTYLINE PAMOATE\PERPHENAZINE [Interacting]
     Active Substance: AMITRIPTYLINE PAMOATE\PERPHENAZINE
     Indication: Hypertension
  1166. AMITRIPTYLINE PAMOATE\PERPHENAZINE [Interacting]
     Active Substance: AMITRIPTYLINE PAMOATE\PERPHENAZINE
     Indication: Fibromyalgia
  1167. AMITRIPTYLINE PAMOATE\PERPHENAZINE [Interacting]
     Active Substance: AMITRIPTYLINE PAMOATE\PERPHENAZINE
     Indication: Duodenal ulcer
  1168. AMITRIPTYLINE PAMOATE\PERPHENAZINE [Interacting]
     Active Substance: AMITRIPTYLINE PAMOATE\PERPHENAZINE
     Indication: Dementia
  1169. AMITRIPTYLINE PAMOATE\PERPHENAZINE [Interacting]
     Active Substance: AMITRIPTYLINE PAMOATE\PERPHENAZINE
     Indication: Coronary artery disease
  1170. AMITRIPTYLINE PAMOATE\PERPHENAZINE [Interacting]
     Active Substance: AMITRIPTYLINE PAMOATE\PERPHENAZINE
     Indication: Constipation
  1171. AMITRIPTYLINE PAMOATE\PERPHENAZINE [Interacting]
     Active Substance: AMITRIPTYLINE PAMOATE\PERPHENAZINE
     Indication: Chest pain
  1172. AMITRIPTYLINE PAMOATE\PERPHENAZINE [Interacting]
     Active Substance: AMITRIPTYLINE PAMOATE\PERPHENAZINE
     Indication: Arthritis
  1173. AMITRIPTYLINE PAMOATE\PERPHENAZINE [Interacting]
     Active Substance: AMITRIPTYLINE PAMOATE\PERPHENAZINE
     Indication: Angina pectoris
  1174. MAGNESIUM ALUMINUM SILICATE [Interacting]
     Active Substance: MAGNESIUM ALUMINUM SILICATE
     Indication: Constipation
  1175. AMLODIPINE MESYLATE [Interacting]
     Active Substance: AMLODIPINE MESYLATE
     Indication: Hypertension
  1176. AMLODIPINE MESYLATE [Interacting]
     Active Substance: AMLODIPINE MESYLATE
     Indication: Coronary artery disease
  1177. AMLODIPINE MESYLATE [Interacting]
     Active Substance: AMLODIPINE MESYLATE
     Indication: Angina pectoris
  1178. AMLODIPINE MESYLATE [Interacting]
     Active Substance: AMLODIPINE MESYLATE
     Indication: Hypertension
     Dosage: UNKNOWN
  1179. AMLODIPINE MESYLATE [Interacting]
     Active Substance: AMLODIPINE MESYLATE
     Indication: Coronary artery disease
     Dosage: UNKNOWN
  1180. AMLODIPINE MESYLATE [Interacting]
     Active Substance: AMLODIPINE MESYLATE
     Indication: Angina pectoris
     Dosage: UNKNOWN
  1181. AMLODIPINE MESYLATE [Interacting]
     Active Substance: AMLODIPINE MESYLATE
     Indication: Hypertension
     Dosage: UNKNOWN
  1182. AMLODIPINE MESYLATE [Interacting]
     Active Substance: AMLODIPINE MESYLATE
     Indication: Coronary artery disease
     Dosage: UNKNOWN
  1183. AMLODIPINE MESYLATE [Interacting]
     Active Substance: AMLODIPINE MESYLATE
     Indication: Angina pectoris
     Dosage: UNKNOWN
  1184. AMLODIPINE MESYLATE [Interacting]
     Active Substance: AMLODIPINE MESYLATE
     Indication: Hypertension
     Dosage: 5.0MG UNKNOWN
  1185. AMLODIPINE MESYLATE [Interacting]
     Active Substance: AMLODIPINE MESYLATE
     Indication: Coronary artery disease
     Dosage: 5.0MG UNKNOWN
  1186. AMLODIPINE MESYLATE [Interacting]
     Active Substance: AMLODIPINE MESYLATE
     Indication: Angina pectoris
     Dosage: 5.0MG UNKNOWN
  1187. AMLODIPINE MESYLATE [Interacting]
     Active Substance: AMLODIPINE MESYLATE
     Indication: Hypertension
     Dosage: 5.0MG UNKNOWN
  1188. AMLODIPINE MESYLATE [Interacting]
     Active Substance: AMLODIPINE MESYLATE
     Indication: Coronary artery disease
     Dosage: 5.0MG UNKNOWN
  1189. AMLODIPINE MESYLATE [Interacting]
     Active Substance: AMLODIPINE MESYLATE
     Indication: Angina pectoris
     Dosage: 5.0MG UNKNOWN
  1190. AMLODIPINE MESYLATE [Interacting]
     Active Substance: AMLODIPINE MESYLATE
     Indication: Hypertension
     Dosage: 5.0MG UNKNOWN
  1191. AMLODIPINE MESYLATE [Interacting]
     Active Substance: AMLODIPINE MESYLATE
     Indication: Coronary artery disease
     Dosage: 5.0MG UNKNOWN
  1192. AMLODIPINE MESYLATE [Interacting]
     Active Substance: AMLODIPINE MESYLATE
     Indication: Angina pectoris
     Dosage: 5.0MG UNKNOWN
  1193. AMLODIPINE MESYLATE [Interacting]
     Active Substance: AMLODIPINE MESYLATE
     Indication: Hypertension
     Dosage: 5.0MG UNKNOWN
  1194. AMLODIPINE MESYLATE [Interacting]
     Active Substance: AMLODIPINE MESYLATE
     Indication: Coronary artery disease
     Dosage: 5.0MG UNKNOWN
  1195. AMLODIPINE MESYLATE [Interacting]
     Active Substance: AMLODIPINE MESYLATE
     Indication: Angina pectoris
     Dosage: 5.0MG UNKNOWN
  1196. AMLODIPINE MESYLATE [Interacting]
     Active Substance: AMLODIPINE MESYLATE
     Indication: Hypertension
     Dosage: UNKNOWN
  1197. AMLODIPINE MESYLATE [Interacting]
     Active Substance: AMLODIPINE MESYLATE
     Indication: Coronary artery disease
     Dosage: UNKNOWN
  1198. AMLODIPINE MESYLATE [Interacting]
     Active Substance: AMLODIPINE MESYLATE
     Indication: Angina pectoris
     Dosage: UNKNOWN
  1199. AMLODIPINE MESYLATE [Interacting]
     Active Substance: AMLODIPINE MESYLATE
     Indication: Hypertension
     Dosage: UNKNOWN
  1200. AMLODIPINE MESYLATE [Interacting]
     Active Substance: AMLODIPINE MESYLATE
     Indication: Coronary artery disease
     Dosage: UNKNOWN
  1201. AMLODIPINE MESYLATE [Interacting]
     Active Substance: AMLODIPINE MESYLATE
     Indication: Angina pectoris
     Dosage: UNKNOWN
  1202. AMLODIPINE MESYLATE [Interacting]
     Active Substance: AMLODIPINE MESYLATE
     Indication: Hypertension
     Dosage: UNKNOWN
  1203. AMLODIPINE MESYLATE [Interacting]
     Active Substance: AMLODIPINE MESYLATE
     Indication: Coronary artery disease
     Dosage: UNKNOWN
  1204. AMLODIPINE MESYLATE [Interacting]
     Active Substance: AMLODIPINE MESYLATE
     Indication: Angina pectoris
     Dosage: UNKNOWN
  1205. AMLODIPINE MESYLATE [Interacting]
     Active Substance: AMLODIPINE MESYLATE
     Indication: Hypertension
     Dosage: UNKNOWN
  1206. AMLODIPINE MESYLATE [Interacting]
     Active Substance: AMLODIPINE MESYLATE
     Indication: Coronary artery disease
     Dosage: UNKNOWN
  1207. AMLODIPINE MESYLATE [Interacting]
     Active Substance: AMLODIPINE MESYLATE
     Indication: Angina pectoris
     Dosage: UNKNOWN
  1208. AMLODIPINE MESYLATE [Interacting]
     Active Substance: AMLODIPINE MESYLATE
     Indication: Hypertension
     Dosage: UNKNOWN
  1209. AMLODIPINE MESYLATE [Interacting]
     Active Substance: AMLODIPINE MESYLATE
     Indication: Coronary artery disease
     Dosage: UNKNOWN
  1210. AMLODIPINE MESYLATE [Interacting]
     Active Substance: AMLODIPINE MESYLATE
     Indication: Angina pectoris
     Dosage: UNKNOWN
  1211. AMLODIPINE MESYLATE [Interacting]
     Active Substance: AMLODIPINE MESYLATE
     Indication: Hypertension
     Dosage: UNKNOWN
  1212. AMLODIPINE MESYLATE [Interacting]
     Active Substance: AMLODIPINE MESYLATE
     Indication: Coronary artery disease
     Dosage: UNKNOWN
  1213. AMLODIPINE MESYLATE [Interacting]
     Active Substance: AMLODIPINE MESYLATE
     Indication: Angina pectoris
     Dosage: UNKNOWN
  1214. AMLODIPINE MESYLATE [Interacting]
     Active Substance: AMLODIPINE MESYLATE
     Indication: Hypertension
     Dosage: UNKNOWN
  1215. AMLODIPINE MESYLATE [Interacting]
     Active Substance: AMLODIPINE MESYLATE
     Indication: Coronary artery disease
     Dosage: UNKNOWN
  1216. AMLODIPINE MESYLATE [Interacting]
     Active Substance: AMLODIPINE MESYLATE
     Indication: Angina pectoris
     Dosage: UNKNOWN
  1217. AMLODIPINE MESYLATE [Interacting]
     Active Substance: AMLODIPINE MESYLATE
     Indication: Hypertension
     Dosage: UNKNOWN
  1218. AMLODIPINE MESYLATE [Interacting]
     Active Substance: AMLODIPINE MESYLATE
     Indication: Coronary artery disease
     Dosage: UNKNOWN
  1219. AMLODIPINE MESYLATE [Interacting]
     Active Substance: AMLODIPINE MESYLATE
     Indication: Angina pectoris
     Dosage: UNKNOWN
  1220. AMLODIPINE MESYLATE [Interacting]
     Active Substance: AMLODIPINE MESYLATE
     Indication: Hypertension
     Dosage: UNKNOWN
  1221. AMLODIPINE MESYLATE [Interacting]
     Active Substance: AMLODIPINE MESYLATE
     Indication: Coronary artery disease
     Dosage: UNKNOWN
  1222. AMLODIPINE MESYLATE [Interacting]
     Active Substance: AMLODIPINE MESYLATE
     Indication: Angina pectoris
     Dosage: UNKNOWN
  1223. AMLODIPINE MESYLATE [Interacting]
     Active Substance: AMLODIPINE MESYLATE
     Indication: Hypertension
     Dosage: UNKNOWN
  1224. AMLODIPINE MESYLATE [Interacting]
     Active Substance: AMLODIPINE MESYLATE
     Indication: Coronary artery disease
     Dosage: UNKNOWN
  1225. AMLODIPINE MESYLATE [Interacting]
     Active Substance: AMLODIPINE MESYLATE
     Indication: Angina pectoris
     Dosage: UNKNOWN
  1226. AMLODIPINE MESYLATE [Interacting]
     Active Substance: AMLODIPINE MESYLATE
     Indication: Hypertension
     Dosage: UNKNOWN
  1227. AMLODIPINE MESYLATE [Interacting]
     Active Substance: AMLODIPINE MESYLATE
     Indication: Coronary artery disease
     Dosage: UNKNOWN
  1228. AMLODIPINE MESYLATE [Interacting]
     Active Substance: AMLODIPINE MESYLATE
     Indication: Angina pectoris
     Dosage: UNKNOWN
  1229. AMLODIPINE MESYLATE [Interacting]
     Active Substance: AMLODIPINE MESYLATE
     Indication: Hypertension
     Dosage: UNKNOWN
  1230. AMLODIPINE MESYLATE [Interacting]
     Active Substance: AMLODIPINE MESYLATE
     Indication: Coronary artery disease
     Dosage: UNKNOWN
  1231. AMLODIPINE MESYLATE [Interacting]
     Active Substance: AMLODIPINE MESYLATE
     Indication: Angina pectoris
     Dosage: UNKNOWN
  1232. AMLODIPINE MESYLATE [Interacting]
     Active Substance: AMLODIPINE MESYLATE
     Indication: Hypertension
     Dosage: UNKNOWN
  1233. AMLODIPINE MESYLATE [Interacting]
     Active Substance: AMLODIPINE MESYLATE
     Indication: Coronary artery disease
     Dosage: UNKNOWN
  1234. AMLODIPINE MESYLATE [Interacting]
     Active Substance: AMLODIPINE MESYLATE
     Indication: Angina pectoris
     Dosage: UNKNOWN
  1235. AMLODIPINE MESYLATE [Interacting]
     Active Substance: AMLODIPINE MESYLATE
     Indication: Hypertension
     Dosage: UNKNOWN
  1236. AMLODIPINE MESYLATE [Interacting]
     Active Substance: AMLODIPINE MESYLATE
     Indication: Coronary artery disease
     Dosage: UNKNOWN
  1237. AMLODIPINE MESYLATE [Interacting]
     Active Substance: AMLODIPINE MESYLATE
     Indication: Angina pectoris
     Dosage: UNKNOWN
  1238. AMLODIPINE MESYLATE [Interacting]
     Active Substance: AMLODIPINE MESYLATE
     Indication: Hypertension
     Dosage: UNKNOWN
  1239. AMLODIPINE MESYLATE [Interacting]
     Active Substance: AMLODIPINE MESYLATE
     Indication: Coronary artery disease
     Dosage: UNKNOWN
  1240. AMLODIPINE MESYLATE [Interacting]
     Active Substance: AMLODIPINE MESYLATE
     Indication: Angina pectoris
     Dosage: UNKNOWN
  1241. AMLODIPINE MESYLATE [Interacting]
     Active Substance: AMLODIPINE MESYLATE
     Indication: Hypertension
     Dosage: UNKNOWN
  1242. AMLODIPINE MESYLATE [Interacting]
     Active Substance: AMLODIPINE MESYLATE
     Indication: Coronary artery disease
     Dosage: UNKNOWN
  1243. AMLODIPINE MESYLATE [Interacting]
     Active Substance: AMLODIPINE MESYLATE
     Indication: Angina pectoris
     Dosage: UNKNOWN
  1244. AMLODIPINE MESYLATE [Interacting]
     Active Substance: AMLODIPINE MESYLATE
     Indication: Hypertension
     Dosage: UNKNOWN
  1245. AMLODIPINE MESYLATE [Interacting]
     Active Substance: AMLODIPINE MESYLATE
     Indication: Coronary artery disease
     Dosage: UNKNOWN
  1246. AMLODIPINE MESYLATE [Interacting]
     Active Substance: AMLODIPINE MESYLATE
     Indication: Angina pectoris
     Dosage: UNKNOWN

REACTIONS (23)
  - None [Recovered/Resolved]
  - None [Recovered/Resolved]
  - None [Recovered/Resolved]
  - None [Recovered/Resolved]
  - None [Recovered/Resolved]
  - None [Recovered/Resolved]
  - None [Recovered/Resolved]
  - None [Recovered/Resolved]
  - None [Recovered/Resolved]
  - None [Recovered/Resolved]
  - None [Recovered/Resolved]
  - None [Recovered/Resolved]
  - None [Recovered/Resolved]
  - None [Recovered/Resolved]
  - None [Recovered/Resolved]
  - None [Recovered/Resolved]
  - None [Recovered/Resolved]
  - None [Recovered/Resolved]
  - None [Recovered/Resolved]
  - None [Recovered/Resolved]
  - None [Recovered/Resolved]
  - None [Recovered/Resolved]
  - None [Recovered/Resolved]
